FAERS Safety Report 23714977 (Version 11)
Quarter: 2024Q4

REPORT INFORMATION
  Report Type: Spontaneous
  Country: GB (occurrence: GB)
  Receive Date: 20240406
  Receipt Date: 20241004
  Transmission Date: 20250115
  Serious: Yes (Hospitalization, Other)
  Sender: CELLTRION
  Company Number: GB-CELLTRION INC.-2023GB025604

PATIENT

DRUGS (1663)
  1. INFLIXIMAB [Suspect]
     Active Substance: INFLIXIMAB
     Indication: Crohn^s disease
     Dosage: ADDITIONAL INFO: ROUTE:OTHER
     Route: 050
  2. INFLIXIMAB [Suspect]
     Active Substance: INFLIXIMAB
     Dosage: UNKNOWN; PHARMACEUTICAL DOSE FORM: 230
     Route: 050
  3. INFLIXIMAB [Suspect]
     Active Substance: INFLIXIMAB
     Dosage: PHARMACEUTICAL DOSE FORM (FREE TEXT): 230
     Route: 065
  4. INFLIXIMAB [Suspect]
     Active Substance: INFLIXIMAB
     Dosage: UNK UNK, UNK
     Route: 065
  5. INFLIXIMAB [Suspect]
     Active Substance: INFLIXIMAB
     Dosage: UNKNOWN
     Route: 065
  6. INFLIXIMAB [Suspect]
     Active Substance: INFLIXIMAB
     Dosage: UNK (ADALIMUMAB SOLUTION FOR INJECTION, SINGLE DOSE PEN)
     Route: 050
  7. INFLIXIMAB [Suspect]
     Active Substance: INFLIXIMAB
     Dosage: UNKNOWN
     Route: 065
  8. INFLIXIMAB [Suspect]
     Active Substance: INFLIXIMAB
     Dosage: UNK (ADALIMUMAB SOLUTION FOR INJECTION, SINGLE DOSE PEN)
     Route: 050
  9. INFLIXIMAB [Suspect]
     Active Substance: INFLIXIMAB
     Dosage: UNK (ADALIMUMAB SOLUTION FOR INJECTION, SINGLE DOSE PEN)
     Route: 065
  10. INFLIXIMAB [Suspect]
     Active Substance: INFLIXIMAB
     Dosage: UNK (ADALIMUMAB SOLUTION FOR INJECTION, SINGLE DOSE PEN)
     Route: 050
  11. INFLIXIMAB [Suspect]
     Active Substance: INFLIXIMAB
     Dosage: UNK
     Route: 050
  12. INFLIXIMAB [Suspect]
     Active Substance: INFLIXIMAB
     Dosage: UNK, OTHER (ADALIMUMAB SOLUTION FOR INJECTION, SINGLE DOSE PEN)
     Route: 065
  13. INFLIXIMAB [Suspect]
     Active Substance: INFLIXIMAB
     Dosage: UNK, OTHER
     Route: 065
  14. INFLIXIMAB [Suspect]
     Active Substance: INFLIXIMAB
     Dosage: UNK, OTHER
     Route: 065
  15. INFLIXIMAB [Suspect]
     Active Substance: INFLIXIMAB
     Dosage: UNK, OTHER
     Route: 065
  16. INFLIXIMAB [Suspect]
     Active Substance: INFLIXIMAB
     Dosage: UNK, OTHER
     Route: 065
  17. INFLIXIMAB [Suspect]
     Active Substance: INFLIXIMAB
     Dosage: UNK, OTHER
     Route: 065
  18. INFLIXIMAB [Suspect]
     Active Substance: INFLIXIMAB
     Dosage: UNK, OTHER
     Route: 065
  19. INFLIXIMAB [Suspect]
     Active Substance: INFLIXIMAB
     Dosage: UNKNOWN; ;
     Route: 050
  20. INFLIXIMAB [Suspect]
     Active Substance: INFLIXIMAB
     Dosage: UNKNOWN; ;
     Route: 050
  21. INFLIXIMAB [Suspect]
     Active Substance: INFLIXIMAB
     Dosage: UNK; ; (ADALIMUMAB SOLUTION FOR INJECTION, SINGLE DOSE PEN)
     Route: 050
  22. INFLIXIMAB [Suspect]
     Active Substance: INFLIXIMAB
     Dosage: UNK; ;
     Route: 050
  23. INFLIXIMAB [Suspect]
     Active Substance: INFLIXIMAB
     Dosage: UNK; ;
     Route: 050
  24. INFLIXIMAB [Suspect]
     Active Substance: INFLIXIMAB
     Dosage: UNK; ;
     Route: 050
  25. INFLIXIMAB [Suspect]
     Active Substance: INFLIXIMAB
     Dosage: UNK; ;
     Route: 050
  26. INFLIXIMAB [Suspect]
     Active Substance: INFLIXIMAB
     Dosage: UNK; ;
     Route: 050
  27. INFLIXIMAB [Suspect]
     Active Substance: INFLIXIMAB
     Dosage: UNK; ;
     Route: 050
  28. INFLIXIMAB [Suspect]
     Active Substance: INFLIXIMAB
     Dosage: UNK; ;
     Route: 050
  29. INFLIXIMAB [Suspect]
     Active Substance: INFLIXIMAB
     Dosage: UNK; ;
     Route: 050
  30. INFLIXIMAB [Suspect]
     Active Substance: INFLIXIMAB
     Dosage: UNK (ADALIMUMAB SOLUTION FOR INJECTION, SINGLE DOSE PEN)
     Route: 050
  31. INFLIXIMAB [Suspect]
     Active Substance: INFLIXIMAB
     Dosage: UNK
     Route: 050
  32. INFLIXIMAB [Suspect]
     Active Substance: INFLIXIMAB
     Dosage: UNK
     Route: 065
  33. INFLIXIMAB [Suspect]
     Active Substance: INFLIXIMAB
     Dosage: UNK
     Route: 065
  34. INFLIXIMAB [Suspect]
     Active Substance: INFLIXIMAB
     Dosage: UNK (ADALIMUMAB SOLUTION FOR INJECTION, SINGLE DOSE PEN)
     Route: 042
  35. INFLIXIMAB [Suspect]
     Active Substance: INFLIXIMAB
     Dosage: UNK
     Route: 042
  36. INFLIXIMAB [Suspect]
     Active Substance: INFLIXIMAB
     Dosage: UNK
     Route: 042
  37. INFLIXIMAB [Suspect]
     Active Substance: INFLIXIMAB
     Dosage: UNK
     Route: 042
  38. INFLIXIMAB [Suspect]
     Active Substance: INFLIXIMAB
     Dosage: UNK; PHARMACEUTICAL DOSE FORM: 230
     Route: 050
  39. INFLIXIMAB [Suspect]
     Active Substance: INFLIXIMAB
     Dosage: UNK
     Route: 050
  40. INFLIXIMAB [Suspect]
     Active Substance: INFLIXIMAB
     Dosage: UNK
     Route: 050
  41. INFLIXIMAB [Suspect]
     Active Substance: INFLIXIMAB
     Dosage: UNK
     Route: 050
  42. INFLIXIMAB [Suspect]
     Active Substance: INFLIXIMAB
     Dosage: UNK
     Route: 042
  43. INFLIXIMAB [Suspect]
     Active Substance: INFLIXIMAB
     Dosage: UNK
     Route: 042
  44. INFLIXIMAB [Suspect]
     Active Substance: INFLIXIMAB
     Dosage: UNK
     Route: 042
  45. INFLIXIMAB [Suspect]
     Active Substance: INFLIXIMAB
     Dosage: UNK
     Route: 042
  46. INFLIXIMAB [Suspect]
     Active Substance: INFLIXIMAB
     Dosage: UNK
     Route: 042
  47. INFLIXIMAB [Suspect]
     Active Substance: INFLIXIMAB
     Dosage: UNK
     Route: 042
  48. INFLIXIMAB [Suspect]
     Active Substance: INFLIXIMAB
     Dosage: UNK
     Route: 042
  49. INFLIXIMAB [Suspect]
     Active Substance: INFLIXIMAB
     Dosage: UNK
     Route: 042
  50. INFLIXIMAB [Suspect]
     Active Substance: INFLIXIMAB
     Dosage: UNK
     Route: 042
  51. INFLIXIMAB [Suspect]
     Active Substance: INFLIXIMAB
     Indication: Crohn^s disease
     Dosage: UNK
     Route: 042
  52. INFLIXIMAB [Suspect]
     Active Substance: INFLIXIMAB
     Dosage: UNK
     Route: 042
  53. INFLIXIMAB [Suspect]
     Active Substance: INFLIXIMAB
     Dosage: UNK
     Route: 042
  54. INFLIXIMAB [Suspect]
     Active Substance: INFLIXIMAB
     Dosage: UNK
     Route: 042
  55. INFLIXIMAB [Suspect]
     Active Substance: INFLIXIMAB
     Dosage: UNK
     Route: 042
  56. INFLIXIMAB [Suspect]
     Active Substance: INFLIXIMAB
     Dosage: UNK
     Route: 042
  57. INFLIXIMAB [Suspect]
     Active Substance: INFLIXIMAB
     Dosage: UNK
     Route: 042
  58. INFLIXIMAB [Suspect]
     Active Substance: INFLIXIMAB
     Dosage: ADDITIONAL INFORMATION ON DRUG (FREE TEXT): ADALIMUMAB SOLUTION FOR INJECTION, SINGLE DOSE PEN
     Route: 065
  59. INFLIXIMAB [Suspect]
     Active Substance: INFLIXIMAB
     Dosage: ADDITIONAL INFORMATION ON DRUG (FREE TEXT): ADALIMUMAB SOLUTION FOR INJECTION, SINGLE DOSE PEN
     Route: 065
  60. INFLIXIMAB [Suspect]
     Active Substance: INFLIXIMAB
     Dosage: ADDITIONAL INFORMATION ON DRUG (FREE TEXT): ADALIMUMAB SOLUTION FOR INJECTION, SINGLE DOSE PEN
     Route: 065
  61. INFLIXIMAB [Suspect]
     Active Substance: INFLIXIMAB
     Dosage: ADDITIONAL INFORMATION ON DRUG (FREE TEXT): ADALIMUMAB SOLUTION FOR INJECTION, SINGLE DOSE PEN
     Route: 065
  62. INFLIXIMAB [Suspect]
     Active Substance: INFLIXIMAB
     Dosage: ADDITIONAL INFORMATION ON DRUG (FREE TEXT): ADALIMUMAB SOLUTION FOR INJECTION, SINGLE DOSE PEN
     Route: 065
  63. INFLIXIMAB [Suspect]
     Active Substance: INFLIXIMAB
     Dosage: ADDITIONAL INFORMATION ON DRUG (FREE TEXT): ADALIMUMAB SOLUTION FOR INJECTION, SINGLE DOSE PEN
     Route: 065
  64. INFLIXIMAB [Suspect]
     Active Substance: INFLIXIMAB
     Dosage: ADDITIONAL INFORMATION ON DRUG (FREE TEXT): ADALIMUMAB SOLUTION FOR INJECTION, SINGLE DOSE PEN
     Route: 065
  65. INFLIXIMAB [Suspect]
     Active Substance: INFLIXIMAB
     Dosage: ADDITIONAL INFORMATION ON DRUG (FREE TEXT): ADALIMUMAB SOLUTION FOR INJECTION, SINGLE DOSE PEN
     Route: 065
  66. INFLIXIMAB [Suspect]
     Active Substance: INFLIXIMAB
     Dosage: ADDITIONAL INFORMATION ON DRUG (FREE TEXT): ADALIMUMAB SOLUTION FOR INJECTION, SINGLE DOSE PEN
     Route: 042
  67. INFLIXIMAB [Suspect]
     Active Substance: INFLIXIMAB
     Dosage: ADDITIONAL INFORMATION ON DRUG (FREE TEXT): ADALIMUMAB SOLUTION FOR INJECTION, SINGLE DOSE PEN
     Route: 042
  68. INFLIXIMAB [Suspect]
     Active Substance: INFLIXIMAB
     Dosage: ADDITIONAL INFORMATION ON DRUG (FREE TEXT): ADALIMUMAB SOLUTION FOR INJECTION, SINGLE DOSE PEN
     Route: 042
  69. INFLIXIMAB [Suspect]
     Active Substance: INFLIXIMAB
     Dosage: ADDITIONAL INFORMATION ON DRUG (FREE TEXT): ADALIMUMAB SOLUTION FOR INJECTION, SINGLE DOSE PEN
     Route: 042
  70. INFLIXIMAB [Suspect]
     Active Substance: INFLIXIMAB
     Dosage: ADDITIONAL INFORMATION ON DRUG (FREE TEXT): ADALIMUMAB SOLUTION FOR INJECTION, SINGLE DOSE PEN
     Route: 050
  71. INFLIXIMAB [Suspect]
     Active Substance: INFLIXIMAB
     Dosage: ADDITIONAL INFORMATION ON DRUG (FREE TEXT): ADALIMUMAB SOLUTION FOR INJECTION, SINGLE DOSE PEN
     Route: 050
  72. INFLIXIMAB [Suspect]
     Active Substance: INFLIXIMAB
     Dosage: ADDITIONAL INFORMATION ON DRUG (FREE TEXT): ADALIMUMAB SOLUTION FOR INJECTION, SINGLE DOSE PEN
     Route: 050
  73. INFLIXIMAB [Suspect]
     Active Substance: INFLIXIMAB
     Dosage: ADDITIONAL INFORMATION ON DRUG (FREE TEXT): ADALIMUMAB SOLUTION FOR INJECTION, SINGLE DOSE PEN
     Route: 050
  74. INFLIXIMAB [Suspect]
     Active Substance: INFLIXIMAB
     Dosage: ADDITIONAL INFORMATION ON DRUG (FREE TEXT): ADALIMUMAB SOLUTION FOR INJECTION, SINGLE DOSE PEN
     Route: 050
  75. INFLIXIMAB [Suspect]
     Active Substance: INFLIXIMAB
     Dosage: ADDITIONAL INFORMATION ON DRUG (FREE TEXT): ADALIMUMAB SOLUTION FOR INJECTION, SINGLE DOSE PEN
     Route: 050
  76. INFLIXIMAB [Suspect]
     Active Substance: INFLIXIMAB
     Dosage: ADDITIONAL INFORMATION ON DRUG (FREE TEXT): ADALIMUMAB SOLUTION FOR INJECTION, SINGLE DOSE PEN
     Route: 050
  77. INFLIXIMAB [Suspect]
     Active Substance: INFLIXIMAB
     Dosage: ADDITIONAL INFORMATION ON DRUG (FREE TEXT): ADALIMUMAB SOLUTION FOR INJECTION, SINGLE DOSE PEN
     Route: 050
  78. INFLIXIMAB [Suspect]
     Active Substance: INFLIXIMAB
     Dosage: ADDITIONAL INFORMATION ON DRUG (FREE TEXT): ADALIMUMAB SOLUTION FOR INJECTION, SINGLE DOSE PEN
     Route: 050
  79. INFLIXIMAB [Suspect]
     Active Substance: INFLIXIMAB
     Dosage: ADDITIONAL INFORMATION ON DRUG (FREE TEXT): ADALIMUMAB SOLUTION FOR INJECTION, SINGLE DOSE PEN
     Route: 050
  80. INFLIXIMAB [Suspect]
     Active Substance: INFLIXIMAB
     Dosage: ADDITIONAL INFORMATION ON DRUG (FREE TEXT): ADALIMUMAB SOLUTION FOR INJECTION, SINGLE DOSE PEN
     Route: 050
  81. INFLIXIMAB [Suspect]
     Active Substance: INFLIXIMAB
     Dosage: ADDITIONAL INFORMATION ON DRUG (FREE TEXT): ADALIMUMAB SOLUTION FOR INJECTION, SINGLE DOSE PEN
     Route: 050
  82. INFLIXIMAB [Suspect]
     Active Substance: INFLIXIMAB
     Dosage: ADDITIONAL INFORMATION ON DRUG (FREE TEXT): ADALIMUMAB SOLUTION FOR INJECTION, SINGLE DOSE PEN
     Route: 050
  83. INFLIXIMAB [Suspect]
     Active Substance: INFLIXIMAB
     Dosage: ADDITIONAL INFORMATION ON DRUG (FREE TEXT): ADALIMUMAB SOLUTION FOR INJECTION, SINGLE DOSE PEN
     Route: 050
  84. ADALIMUMAB [Suspect]
     Active Substance: ADALIMUMAB
     Indication: Crohn^s disease
     Dosage: UNKNOWN; ADDITIONAL INFORMATION ON DRUG: ADALIMUMAB SOLUTION FOR INJECTION (DOSAGE1: UNITE=SURECLICK
     Route: 050
  85. ADALIMUMAB [Suspect]
     Active Substance: ADALIMUMAB
     Dosage: 1 UNIT; ADALIMUMAB SOLUTION FOR INJECTION, SINGLEDOSE PEN
     Route: 050
  86. ADALIMUMAB [Suspect]
     Active Substance: ADALIMUMAB
     Dosage: 1 UNIT, SINGLE DOSE PEN, UNIT EQUAL TO SURE CLICK (ADALIMUMAB SOLUTION FOR INJECTION, SINGLE DOSE PE
     Route: 050
  87. ADALIMUMAB [Suspect]
     Active Substance: ADALIMUMAB
     Dosage: 1 DOSAGE FORM (1 UNIT)
     Route: 050
  88. ADALIMUMAB [Suspect]
     Active Substance: ADALIMUMAB
     Dosage: UNK. ADDITIONAL INFO: ADALIMUMAB SOLUTION FOR INJECTION, SINGLE DOSE PEN DOSAGE1: UNIT=SURECLICK DOS
     Route: 050
  89. ADALIMUMAB [Suspect]
     Active Substance: ADALIMUMAB
     Dosage: UNK, ( 1UNIT, OTHER ; ADALIMUMAB SOLUTION FOR INJECTION, SINGLE DOSE PEN UNIT=SURECLICK
     Route: 050
  90. ADALIMUMAB [Suspect]
     Active Substance: ADALIMUMAB
     Dosage: UNK, OTHER (ADALIMUMAB SOLUTION FOR INJECTION, SINGLE DOSE PEN UNIT=SURECLICK)
     Route: 050
  91. ADALIMUMAB [Suspect]
     Active Substance: ADALIMUMAB
     Dosage: UNK
     Route: 050
  92. ADALIMUMAB [Suspect]
     Active Substance: ADALIMUMAB
     Dosage: SINGLE DOSE PEN, UNIT EQUAL TO SURE CLICK (ADALIMUMAB SOLUTION FOR INJECTION, SINGLE DOSE PEN UNIT=S
     Route: 050
  93. ADALIMUMAB [Suspect]
     Active Substance: ADALIMUMAB
     Dosage: UNK (SINGLE DOSE PEN, UNIT EQUAL TO SURE CLICK); ADALIMUMAB SOLUTION FOR INJECTION, SINGLE DOSE PEN
     Route: 050
  94. ADALIMUMAB [Suspect]
     Active Substance: ADALIMUMAB
     Dosage: UNK (SINGLE DOSE PEN, UNIT EQUAL TO SURE CLICK); ADALIMUMAB SOLUTION FOR INJECTION, SINGLE DOSE PEN
     Route: 050
  95. ADALIMUMAB [Suspect]
     Active Substance: ADALIMUMAB
     Dosage: UNK (SINGLE DOSE PEN, UNIT EQUAL TO SURE CLICK); ADALIMUMAB SOLUTION FOR INJECTION, SINGLE DOSE PEN
     Route: 050
  96. ADALIMUMAB [Suspect]
     Active Substance: ADALIMUMAB
     Dosage: UNK (1 UNIT, SINGLE DOSE PEN, UNIT EQUAL TO SURECLICK) (ADALIMUMAB SOLUTION FOR INJECTION, SINGLE DO
     Route: 065
  97. ADALIMUMAB [Suspect]
     Active Substance: ADALIMUMAB
     Dosage: UNK; ADALIMUMAB SOLUTION FOR INJECTION, SINGLE DOSE PEN
     Route: 050
  98. ADALIMUMAB [Suspect]
     Active Substance: ADALIMUMAB
     Dosage: UNK
     Route: 050
  99. ADALIMUMAB [Suspect]
     Active Substance: ADALIMUMAB
     Dosage: UNK; ADALIMUMAB SOLUTION FOR INJECTION, SINGLE DOSE PEN
     Route: 050
  100. ADALIMUMAB [Suspect]
     Active Substance: ADALIMUMAB
     Dosage: UNK
     Route: 050
  101. ADALIMUMAB [Suspect]
     Active Substance: ADALIMUMAB
     Dosage: 1 UNIT; ADALIMUMAB SOLUTION FOR INJECTION, SINGLE DOSE PEN
     Route: 050
  102. ADALIMUMAB [Suspect]
     Active Substance: ADALIMUMAB
     Dosage: 1 DOSAGE FORM (1 UNIT); ADDITIONAL INFORMATION ON DRUG (FREE TEXT): ADALIMUMAB SOLUTION FOR INJECTIO
     Route: 050
  103. ADALIMUMAB [Suspect]
     Active Substance: ADALIMUMAB
     Dosage: UNK, OTHER ADDITIONAL INFORMATION ON DRUG (FREE TEXT): ADALIMUMAB SOLUTION FOR INJECTION, SINGLE DOS
     Route: 050
  104. ADALIMUMAB [Suspect]
     Active Substance: ADALIMUMAB
     Dosage: UNK (SINGLE DOSE PEN, UNIT EQUAL TO SURE CLICK); ADALIMUMAB SOLUTION FOR INJECTION, SINGLE DOSE PEN
     Route: 065
  105. ADALIMUMAB [Suspect]
     Active Substance: ADALIMUMAB
     Dosage: 1 DOSAGE FORM (1 UNIT) (ADALIMUMAB SOLUTION FOR INJECTION, SINGLE DOSE PEN)
     Route: 065
  106. ADALIMUMAB [Suspect]
     Active Substance: ADALIMUMAB
     Dosage: UNK, OTER (ADALIMUMAB SOLUTION FOR INJECTION, SINGLE DOSE PEN)
     Route: 065
  107. ADALIMUMAB [Suspect]
     Active Substance: ADALIMUMAB
     Dosage: 1 UNIT, SINGLE DOSE PEN, UNIT EQUAL TO SURE CLICK (ADALIMUMAB SOLUTION FOR INJECTION, SINGLE DOSE PE
     Route: 065
  108. ADALIMUMAB [Suspect]
     Active Substance: ADALIMUMAB
     Dosage: UNKUNK (SINGLE DOSE PEN, UNIT EQUAL TO SURE CLICK) (ADALIMUMAB SOLUTION FOR INJECTION, SINGLE DOSE P
     Route: 065
  109. ADALIMUMAB [Suspect]
     Active Substance: ADALIMUMAB
     Dosage: 1 DOSAGE FORM (DOSAGE1: UNIT, SURECLICK) (ADALIMUMAB SOLUTION FOR INJECTION, SINGLE DOSE PEN)
     Route: 065
  110. ADALIMUMAB [Suspect]
     Active Substance: ADALIMUMAB
     Dosage: UNK, ( 1UNIT, OTHER) (ADALIMUMAB SOLUTION FOR INJECTION, SINGLE DOSE PEN)
     Route: 065
  111. ADALIMUMAB [Suspect]
     Active Substance: ADALIMUMAB
     Dosage: UNK (SINGLE DOSE PEN) (ADALIMUMAB SOLUTION FOR INJECTION, SINGLE DOSE PEN)
     Route: 065
  112. ADALIMUMAB [Suspect]
     Active Substance: ADALIMUMAB
     Indication: Crohn^s disease
     Dosage: ADALIMUMAB SOLUTION FOR INJECTION, SINGLE DOSE PEN UNIT=SURECLICK
     Route: 065
  113. ADALIMUMAB [Suspect]
     Active Substance: ADALIMUMAB
     Dosage: ADALIMUMAB SOLUTION FOR INJECTION, SINGLE DOSE PEN UNIT=SURECLICK
     Route: 065
  114. ADALIMUMAB [Suspect]
     Active Substance: ADALIMUMAB
     Dosage: ADALIMUMAB SOLUTION FOR INJECTION, SINGLE DOSE PEN UNIT=SURECLICK
     Route: 065
  115. ADALIMUMAB [Suspect]
     Active Substance: ADALIMUMAB
     Dosage: ADALIMUMAB SOLUTION FOR INJECTION, SINGLE DOSE PEN UNIT=SURECLICK
     Route: 065
  116. ADALIMUMAB [Suspect]
     Active Substance: ADALIMUMAB
     Dosage: ADALIMUMAB SOLUTION FOR INJECTION, SINGLE DOSE PEN UNIT=SURECLICK
     Route: 065
  117. ADALIMUMAB [Suspect]
     Active Substance: ADALIMUMAB
     Dosage: ADALIMUMAB SOLUTION FOR INJECTION, SINGLE DOSE PEN UNIT=SURECLICK
     Route: 065
  118. ADALIMUMAB [Suspect]
     Active Substance: ADALIMUMAB
     Dosage: ADALIMUMAB SOLUTION FOR INJECTION, SINGLE DOSE PEN UNIT=SURECLICK
     Route: 065
  119. ADALIMUMAB [Suspect]
     Active Substance: ADALIMUMAB
     Dosage: ADALIMUMAB SOLUTION FOR INJECTION, SINGLE DOSE PEN UNIT=SURECLICK
     Route: 065
  120. ADALIMUMAB [Suspect]
     Active Substance: ADALIMUMAB
     Dosage: ADALIMUMAB SOLUTION FOR INJECTION, SINGLE DOSE PEN UNIT=SURECLICK
     Route: 065
  121. ADALIMUMAB [Suspect]
     Active Substance: ADALIMUMAB
     Dosage: ADALIMUMAB SOLUTION FOR INJECTION, SINGLE DOSE PEN UNIT=SURECLICK
     Route: 065
  122. ADALIMUMAB [Suspect]
     Active Substance: ADALIMUMAB
     Dosage: ADALIMUMAB SOLUTION FOR INJECTION, SINGLE DOSE PEN UNIT=SURECLICK
     Route: 065
  123. ADALIMUMAB [Suspect]
     Active Substance: ADALIMUMAB
     Dosage: ADALIMUMAB SOLUTION FOR INJECTION, SINGLE DOSE PEN UNIT=SURECLICK
     Route: 065
  124. ADALIMUMAB [Suspect]
     Active Substance: ADALIMUMAB
     Dosage: ADALIMUMAB SOLUTION FOR INJECTION, SINGLE DOSE PEN UNIT=SURECLICK
     Route: 065
  125. ADALIMUMAB [Suspect]
     Active Substance: ADALIMUMAB
     Dosage: ADALIMUMAB SOLUTION FOR INJECTION, SINGLE DOSE PEN UNIT=SURECLICK
     Route: 065
  126. ADALIMUMAB [Suspect]
     Active Substance: ADALIMUMAB
     Dosage: ADALIMUMAB SOLUTION FOR INJECTION, SINGLE DOSE PEN UNIT=SURECLICK
     Route: 065
  127. ADALIMUMAB [Suspect]
     Active Substance: ADALIMUMAB
     Dosage: ADALIMUMAB SOLUTION FOR INJECTION, SINGLE DOSE PEN UNIT=SURECLICK
     Route: 065
  128. ADALIMUMAB [Suspect]
     Active Substance: ADALIMUMAB
     Dosage: ADALIMUMAB SOLUTION FOR INJECTION, SINGLE DOSE PEN UNIT=SURECLICK
     Route: 065
  129. ADALIMUMAB [Suspect]
     Active Substance: ADALIMUMAB
     Dosage: ADALIMUMAB SOLUTION FOR INJECTION, SINGLE DOSE PEN UNIT=SURECLICK
     Route: 065
  130. ADALIMUMAB [Suspect]
     Active Substance: ADALIMUMAB
     Dosage: ADALIMUMAB SOLUTION FOR INJECTION, SINGLE DOSE PEN UNIT=SURECLICK
     Route: 065
  131. ADALIMUMAB [Suspect]
     Active Substance: ADALIMUMAB
     Dosage: ADALIMUMAB SOLUTION FOR INJECTION, SINGLE DOSE PEN UNIT=SURECLICK
     Route: 065
  132. ADALIMUMAB [Suspect]
     Active Substance: ADALIMUMAB
     Dosage: ADALIMUMAB SOLUTION FOR INJECTION, SINGLE DOSE PEN UNIT=SURECLICK
     Route: 065
  133. ADALIMUMAB [Suspect]
     Active Substance: ADALIMUMAB
     Dosage: ADALIMUMAB SOLUTION FOR INJECTION, SINGLE DOSE PEN UNIT=SURECLICK
     Route: 065
  134. ADALIMUMAB [Suspect]
     Active Substance: ADALIMUMAB
     Dosage: ADALIMUMAB SOLUTION FOR INJECTION, SINGLE DOSE PEN UNIT=SURECLICK
     Route: 065
  135. ADALIMUMAB [Suspect]
     Active Substance: ADALIMUMAB
     Dosage: ADALIMUMAB SOLUTION FOR INJECTION, SINGLE DOSE PEN UNIT=SURECLICK
     Route: 050
  136. ADALIMUMAB [Suspect]
     Active Substance: ADALIMUMAB
     Dosage: ADALIMUMAB SOLUTION FOR INJECTION, SINGLE DOSE PEN UNIT=SURECLICK
     Route: 050
  137. ADALIMUMAB [Suspect]
     Active Substance: ADALIMUMAB
     Dosage: ADALIMUMAB SOLUTION FOR INJECTION, SINGLE DOSE PEN UNIT=SURECLICK
     Route: 050
  138. ADALIMUMAB [Suspect]
     Active Substance: ADALIMUMAB
     Dosage: ADALIMUMAB SOLUTION FOR INJECTION, SINGLE DOSE PEN UNIT=SURECLICK
     Route: 050
  139. ADALIMUMAB [Suspect]
     Active Substance: ADALIMUMAB
     Dosage: ADALIMUMAB SOLUTION FOR INJECTION, SINGLE DOSE PEN UNIT=SURECLICK
     Route: 050
  140. ADALIMUMAB [Suspect]
     Active Substance: ADALIMUMAB
     Dosage: ADALIMUMAB SOLUTION FOR INJECTION, SINGLE DOSE PEN UNIT=SURECLICK
     Route: 050
  141. ADALIMUMAB [Suspect]
     Active Substance: ADALIMUMAB
     Dosage: ADALIMUMAB SOLUTION FOR INJECTION, SINGLE DOSE PEN UNIT=SURECLICK
     Route: 050
  142. ADALIMUMAB [Suspect]
     Active Substance: ADALIMUMAB
     Dosage: ADALIMUMAB SOLUTION FOR INJECTION, SINGLE DOSE PEN UNIT=SURECLICK
     Route: 050
  143. ADALIMUMAB [Suspect]
     Active Substance: ADALIMUMAB
     Dosage: ADALIMUMAB SOLUTION FOR INJECTION, SINGLE DOSE PEN UNIT=SURECLICK
     Route: 050
  144. ADALIMUMAB [Suspect]
     Active Substance: ADALIMUMAB
     Dosage: ADALIMUMAB SOLUTION FOR INJECTION, SINGLE DOSE PEN UNIT=SURECLICK
     Route: 050
  145. ADALIMUMAB [Suspect]
     Active Substance: ADALIMUMAB
     Dosage: ADALIMUMAB SOLUTION FOR INJECTION, SINGLE DOSE PEN UNIT=SURECLICK
     Route: 050
  146. ADALIMUMAB [Suspect]
     Active Substance: ADALIMUMAB
     Dosage: ADALIMUMAB SOLUTION FOR INJECTION, SINGLE DOSE PEN UNIT=SURECLICK
     Route: 050
  147. ADALIMUMAB [Suspect]
     Active Substance: ADALIMUMAB
     Dosage: ADALIMUMAB SOLUTION FOR INJECTION, SINGLE DOSE PEN UNIT=SURECLICK
     Route: 050
  148. ADALIMUMAB [Suspect]
     Active Substance: ADALIMUMAB
     Dosage: ADALIMUMAB SOLUTION FOR INJECTION, SINGLE DOSE PEN UNIT=SURECLICK
     Route: 050
  149. ADALIMUMAB [Suspect]
     Active Substance: ADALIMUMAB
     Dosage: ADALIMUMAB SOLUTION FOR INJECTION, SINGLE DOSE PEN UNIT=SURECLICK
     Route: 050
  150. ADALIMUMAB [Suspect]
     Active Substance: ADALIMUMAB
     Dosage: ADALIMUMAB SOLUTION FOR INJECTION, SINGLE DOSE PEN UNIT=SURECLICK
     Route: 050
  151. ADALIMUMAB [Suspect]
     Active Substance: ADALIMUMAB
     Dosage: ADALIMUMAB SOLUTION FOR INJECTION, SINGLE DOSE PEN UNIT=SURECLICK
     Route: 050
  152. ADALIMUMAB [Suspect]
     Active Substance: ADALIMUMAB
     Dosage: ADALIMUMAB SOLUTION FOR INJECTION, SINGLE DOSE PEN UNIT=SURECLICK
     Route: 050
  153. ADALIMUMAB [Suspect]
     Active Substance: ADALIMUMAB
     Dosage: ADALIMUMAB SOLUTION FOR INJECTION, SINGLE DOSE PEN UNIT=SURECLICK
     Route: 050
  154. ADALIMUMAB [Suspect]
     Active Substance: ADALIMUMAB
     Dosage: ADALIMUMAB SOLUTION FOR INJECTION, SINGLE DOSE PEN UNIT=SURECLICK
     Route: 050
  155. ADALIMUMAB [Suspect]
     Active Substance: ADALIMUMAB
     Dosage: ADALIMUMAB SOLUTION FOR INJECTION, SINGLE DOSE PEN UNIT=SURECLICK
     Route: 050
  156. ADALIMUMAB [Suspect]
     Active Substance: ADALIMUMAB
     Dosage: ADALIMUMAB SOLUTION FOR INJECTION, SINGLE DOSE PEN UNIT=SURECLICK
     Route: 050
  157. ADALIMUMAB [Suspect]
     Active Substance: ADALIMUMAB
     Dosage: ADALIMUMAB SOLUTION FOR INJECTION, SINGLE DOSE PEN UNIT=SURECLICK
     Route: 050
  158. ADALIMUMAB [Suspect]
     Active Substance: ADALIMUMAB
     Dosage: ADALIMUMAB SOLUTION FOR INJECTION, SINGLE DOSE PEN UNIT=SURECLICK
     Route: 050
  159. ADALIMUMAB [Suspect]
     Active Substance: ADALIMUMAB
     Dosage: ADALIMUMAB SOLUTION FOR INJECTION, SINGLE DOSE PEN UNIT=SURECLICK
     Route: 050
  160. ADALIMUMAB [Suspect]
     Active Substance: ADALIMUMAB
     Dosage: ADALIMUMAB SOLUTION FOR INJECTION, SINGLE DOSE PEN UNIT=SURECLICK
     Route: 050
  161. ADALIMUMAB [Suspect]
     Active Substance: ADALIMUMAB
     Dosage: ADALIMUMAB SOLUTION FOR INJECTION, SINGLE DOSE PEN UNIT=SURECLICK
     Route: 050
  162. ADALIMUMAB [Suspect]
     Active Substance: ADALIMUMAB
     Indication: Crohn^s disease
     Dosage: ADALIMUMAB SOLUTION FOR INJECTION, SINGLE DOSE PEN UNIT=SURECLICK
     Route: 050
  163. ADALIMUMAB [Suspect]
     Active Substance: ADALIMUMAB
     Indication: Crohn^s disease
     Dosage: ADALIMUMAB SOLUTION FOR INJECTION, SINGLE DOSE PEN UNIT=SURECLICK
     Route: 050
  164. ADALIMUMAB [Suspect]
     Active Substance: ADALIMUMAB
     Dosage: ADALIMUMAB SOLUTION FOR INJECTION, SINGLE DOSE PEN UNIT=SURECLICK
     Route: 050
  165. ADALIMUMAB [Suspect]
     Active Substance: ADALIMUMAB
     Dosage: ADALIMUMAB SOLUTION FOR INJECTION, SINGLE DOSE PEN UNIT=SURECLICK
     Route: 050
  166. ADALIMUMAB [Suspect]
     Active Substance: ADALIMUMAB
     Dosage: ADALIMUMAB SOLUTION FOR INJECTION, SINGLE DOSE PEN UNIT=SURECLICK
     Route: 050
  167. ADALIMUMAB [Suspect]
     Active Substance: ADALIMUMAB
     Dosage: ADALIMUMAB SOLUTION FOR INJECTION, SINGLE DOSE PEN UNIT=SURECLICK
     Route: 050
  168. ADALIMUMAB [Suspect]
     Active Substance: ADALIMUMAB
     Dosage: 1 DOSAGE FORM (1 UNIT)/UNK (1 UNIT, SINGLE DOSE PEN, UNIT EQUAL TO SURE CLICK)
     Route: 050
  169. ADALIMUMAB [Suspect]
     Active Substance: ADALIMUMAB
     Dosage: UNK (1 UNIT, SINGLE DOSE PEN, UNIT EQUAL TO SURE CLICK)
     Route: 050
  170. ADALIMUMAB [Suspect]
     Active Substance: ADALIMUMAB
     Dosage: UNK (1 UNIT, SINGLE DOSE PEN, UNIT EQUAL TO SURE CLICK)
     Route: 050
  171. ADALIMUMAB [Suspect]
     Active Substance: ADALIMUMAB
     Dosage: UNK (1 UNIT, SINGLE DOSE PEN, UNIT EQUAL TO SURE CLICK)
     Route: 050
  172. ADALIMUMAB [Suspect]
     Active Substance: ADALIMUMAB
     Dosage: UNK (1 UNIT, SINGLE DOSE PEN, UNIT EQUAL TO SURE CLICK)
     Route: 050
  173. ADALIMUMAB [Suspect]
     Active Substance: ADALIMUMAB
     Dosage: 1 UNIT
     Route: 050
  174. ADALIMUMAB [Suspect]
     Active Substance: ADALIMUMAB
     Dosage: UNK (1 UNIT, SINGLE DOSE PEN, UNIT EQUAL TO SURE CLICK)
     Route: 050
  175. ADALIMUMAB [Suspect]
     Active Substance: ADALIMUMAB
     Dosage: UNK (1 UNIT, SINGLE DOSE PEN, UNIT EQUAL TO SURE CLICK)
     Route: 065
  176. ADALIMUMAB [Suspect]
     Active Substance: ADALIMUMAB
     Dosage: UNK (SINGLE DOSE PEN)
     Route: 050
  177. ADALIMUMAB [Suspect]
     Active Substance: ADALIMUMAB
     Dosage: UNK (1 UNIT, SINGLE DOSE PEN, UNIT EQUAL TO SURE CLICK)
     Route: 065
  178. ADALIMUMAB [Suspect]
     Active Substance: ADALIMUMAB
     Dosage: UNK (1 UNIT, SINGLE DOSE PEN, UNIT EQUAL TO SURE CLICK)
     Route: 065
  179. ADALIMUMAB [Suspect]
     Active Substance: ADALIMUMAB
     Dosage: UNK (1 UNIT, SINGLE DOSE PEN, UNIT EQUAL TO SURE CLICK)
     Route: 065
  180. ADALIMUMAB [Suspect]
     Active Substance: ADALIMUMAB
     Dosage: UNK (SINGLE DOSE PEN, UNIT EQUAL TO SURE CLICK)
     Route: 050
  181. ADALIMUMAB [Suspect]
     Active Substance: ADALIMUMAB
     Dosage: UNK (SINGLE DOSE PEN, UNIT EQUAL TO SURE CLICK)
     Route: 050
  182. ADALIMUMAB [Suspect]
     Active Substance: ADALIMUMAB
     Dosage: UNK (SINGLE DOSE PEN, UNIT EQUAL TO SURE CLICK)
     Route: 050
  183. ADALIMUMAB [Suspect]
     Active Substance: ADALIMUMAB
     Dosage: UNK (SINGLE DOSE PEN, UNIT EQUAL TO SURE CLICK)
     Route: 050
  184. ADALIMUMAB [Suspect]
     Active Substance: ADALIMUMAB
     Dosage: UNK
     Route: 050
  185. ADALIMUMAB [Suspect]
     Active Substance: ADALIMUMAB
     Dosage: UNK
     Route: 065
  186. ADALIMUMAB [Suspect]
     Active Substance: ADALIMUMAB
     Dosage: 1 DOSAGE FORM (1 UNIT)
     Route: 050
  187. ADALIMUMAB [Suspect]
     Active Substance: ADALIMUMAB
     Dosage: (1 UNIT, SINGLE DOSE PEN)
     Route: 065
  188. ADALIMUMAB [Suspect]
     Active Substance: ADALIMUMAB
     Dosage: UNK, OTHER
     Route: 050
  189. ADALIMUMAB [Suspect]
     Active Substance: ADALIMUMAB
     Dosage: UNK, ( 1UNIT, OTHER
     Route: 050
  190. ADALIMUMAB [Suspect]
     Active Substance: ADALIMUMAB
     Dosage: UNK
     Route: 050
  191. ADALIMUMAB [Suspect]
     Active Substance: ADALIMUMAB
     Dosage: UNK
     Route: 050
  192. ADALIMUMAB [Suspect]
     Active Substance: ADALIMUMAB
     Dosage: UNK
     Route: 050
  193. ADALIMUMAB [Suspect]
     Active Substance: ADALIMUMAB
     Dosage: UNK
     Route: 050
  194. ADALIMUMAB [Suspect]
     Active Substance: ADALIMUMAB
     Dosage: UNK
     Route: 050
  195. ADALIMUMAB [Suspect]
     Active Substance: ADALIMUMAB
     Dosage: UNK, ( 1UNIT, OTHER
     Route: 050
  196. ADALIMUMAB [Suspect]
     Active Substance: ADALIMUMAB
     Dosage: UNK, ( 1UNIT, OTHER
     Route: 050
  197. ADALIMUMAB [Suspect]
     Active Substance: ADALIMUMAB
     Dosage: UNK, ( 1UNIT, OTHER
     Route: 050
  198. ADALIMUMAB [Suspect]
     Active Substance: ADALIMUMAB
     Dosage: UNK, ( 1UNIT, OTHER
     Route: 050
  199. ADALIMUMAB [Suspect]
     Active Substance: ADALIMUMAB
     Dosage: UNK, ( 1UNIT, OTHER
     Route: 050
  200. ADALIMUMAB [Suspect]
     Active Substance: ADALIMUMAB
     Dosage: 1 DOSAGE FORM (1 UNIT)
     Route: 050
  201. ADALIMUMAB [Suspect]
     Active Substance: ADALIMUMAB
     Dosage: 1 DOSAGE FORM (1 UNIT)
     Route: 050
  202. ADALIMUMAB [Suspect]
     Active Substance: ADALIMUMAB
     Dosage: 1 DOSAGE FORM (1 UNIT)
     Route: 050
  203. ADALIMUMAB [Suspect]
     Active Substance: ADALIMUMAB
     Dosage: 1 DOSAGE FORM (1 UNIT)
     Route: 050
  204. ADALIMUMAB [Suspect]
     Active Substance: ADALIMUMAB
     Dosage: 1 DOSAGE FORM (1 UNIT)
     Route: 050
  205. ADALIMUMAB [Suspect]
     Active Substance: ADALIMUMAB
     Dosage: 1 DOSAGE FORM (1 UNIT)
     Route: 050
  206. ADALIMUMAB [Suspect]
     Active Substance: ADALIMUMAB
     Dosage: 1 DOSAGE FORM (1 UNIT)
     Route: 050
  207. ADALIMUMAB [Suspect]
     Active Substance: ADALIMUMAB
     Dosage: 1 DOSAGE FORM (1 UNIT)
     Route: 050
  208. ADALIMUMAB [Suspect]
     Active Substance: ADALIMUMAB
     Indication: Crohn^s disease
     Dosage: UNK (1 UNIT, SINGLE DOSE PEN, UNIT EQUAL TO SURE CLICK)
     Route: 050
  209. ADALIMUMAB [Suspect]
     Active Substance: ADALIMUMAB
     Dosage: UNK
     Route: 050
  210. ADALIMUMAB [Suspect]
     Active Substance: ADALIMUMAB
     Dosage: UNK
     Route: 050
  211. ADALIMUMAB [Suspect]
     Active Substance: ADALIMUMAB
     Dosage: UNK
     Route: 050
  212. ADALIMUMAB [Suspect]
     Active Substance: ADALIMUMAB
     Dosage: UNK (1 UNIT, SINGLE DOSE PEN, UNIT EQUAL TO SURE CLICK)
     Route: 050
  213. ADALIMUMAB [Suspect]
     Active Substance: ADALIMUMAB
     Dosage: 1 UNIT SOLUTION FOR INJECTION
     Route: 050
  214. ADALIMUMAB [Suspect]
     Active Substance: ADALIMUMAB
     Dosage: UNK
     Route: 050
  215. ADALIMUMAB [Suspect]
     Active Substance: ADALIMUMAB
     Dosage: UNK
     Route: 050
  216. ADALIMUMAB [Suspect]
     Active Substance: ADALIMUMAB
     Dosage: UNK (1 UNIT, SINGLE DOSE PEN, UNIT EQUAL TO SURE CLICK)
     Route: 050
  217. ADALIMUMAB [Suspect]
     Active Substance: ADALIMUMAB
     Dosage: UNK (1 UNIT, SINGLE DOSE PEN, UNIT EQUAL TO SURE CLICK)
     Route: 050
  218. ADALIMUMAB [Suspect]
     Active Substance: ADALIMUMAB
     Dosage: UNK
     Route: 050
  219. ADALIMUMAB [Suspect]
     Active Substance: ADALIMUMAB
     Dosage: UNK
     Route: 050
  220. ADALIMUMAB [Suspect]
     Active Substance: ADALIMUMAB
     Dosage: UNK
     Route: 050
  221. ADALIMUMAB [Suspect]
     Active Substance: ADALIMUMAB
     Dosage: UNK (1 UNIT, SINGLE DOSE PEN, UNIT EQUAL TO SURE CLICK)
     Route: 050
  222. ADALIMUMAB [Suspect]
     Active Substance: ADALIMUMAB
     Dosage: UNK (1 UNIT, SINGLE DOSE PEN, UNIT EQUAL TO SURE CLICK)
     Route: 050
  223. ADALIMUMAB [Suspect]
     Active Substance: ADALIMUMAB
     Dosage: UNK
     Route: 050
  224. ADALIMUMAB [Suspect]
     Active Substance: ADALIMUMAB
     Dosage: UNK (1 UNIT, SINGLE DOSE PEN, UNIT EQUAL TO SURE CLICK)
     Route: 050
  225. ADALIMUMAB [Suspect]
     Active Substance: ADALIMUMAB
     Dosage: UNK
     Route: 065
  226. ENTYVIO [Suspect]
     Active Substance: VEDOLIZUMAB
     Indication: Crohn^s disease
     Dosage: UNK (ADALIMUMAB SOLUTION FOR INJECTION, SINGLE DOSE PEN)
     Route: 065
  227. ENTYVIO [Suspect]
     Active Substance: VEDOLIZUMAB
     Dosage: UNKNOWN
     Route: 050
  228. ENTYVIO [Suspect]
     Active Substance: VEDOLIZUMAB
     Dosage: UNK (ADALIMUMAB SOLUTION FOR INJECTION, SINGLE DOSE PEN)
     Route: 050
  229. ENTYVIO [Suspect]
     Active Substance: VEDOLIZUMAB
     Dosage: UNKNOWN
     Route: 050
  230. ENTYVIO [Suspect]
     Active Substance: VEDOLIZUMAB
     Dosage: ADDITIONAL INFO: ROUTE:OTHER
     Route: 050
  231. ENTYVIO [Suspect]
     Active Substance: VEDOLIZUMAB
     Dosage: UNK
     Route: 050
  232. ENTYVIO [Suspect]
     Active Substance: VEDOLIZUMAB
     Dosage: UNK
     Route: 050
  233. ENTYVIO [Suspect]
     Active Substance: VEDOLIZUMAB
     Dosage: UNKNOWN
     Route: 050
  234. ENTYVIO [Suspect]
     Active Substance: VEDOLIZUMAB
     Dosage: UNKNOWN
     Route: 050
  235. ENTYVIO [Suspect]
     Active Substance: VEDOLIZUMAB
     Dosage: UNKNOWN
     Route: 050
  236. ENTYVIO [Suspect]
     Active Substance: VEDOLIZUMAB
     Dosage: UNK
     Route: 050
  237. ENTYVIO [Suspect]
     Active Substance: VEDOLIZUMAB
     Dosage: UNK
     Route: 050
  238. ENTYVIO [Suspect]
     Active Substance: VEDOLIZUMAB
     Dosage: UNK
     Route: 050
  239. ENTYVIO [Suspect]
     Active Substance: VEDOLIZUMAB
     Dosage: UNK
     Route: 050
  240. ENTYVIO [Suspect]
     Active Substance: VEDOLIZUMAB
     Dosage: UNK
     Route: 050
  241. ENTYVIO [Suspect]
     Active Substance: VEDOLIZUMAB
     Dosage: UNK
     Route: 050
  242. ENTYVIO [Suspect]
     Active Substance: VEDOLIZUMAB
     Dosage: UNK
     Route: 050
  243. ENTYVIO [Suspect]
     Active Substance: VEDOLIZUMAB
     Dosage: UNK
     Route: 050
  244. ENTYVIO [Suspect]
     Active Substance: VEDOLIZUMAB
     Dosage: UNK
     Route: 050
  245. ENTYVIO [Suspect]
     Active Substance: VEDOLIZUMAB
     Dosage: UNK
     Route: 050
  246. ENTYVIO [Suspect]
     Active Substance: VEDOLIZUMAB
     Dosage: UNK
     Route: 050
  247. ENTYVIO [Suspect]
     Active Substance: VEDOLIZUMAB
     Dosage: DOSE FORM: 231
  248. ENTYVIO [Suspect]
     Active Substance: VEDOLIZUMAB
     Dosage: UNK (ADALIMUMAB SOLUTION FOR INJECTION, SINGLE DOSE PEN)
  249. ENTYVIO [Suspect]
     Active Substance: VEDOLIZUMAB
     Dosage: DOSE FORM: 231
  250. ENTYVIO [Suspect]
     Active Substance: VEDOLIZUMAB
     Dosage: SOLUTION FOR INJECTION (ADALIMUMAB SOLUTION FOR INJECTION, SINGLE DOSE PEN)
     Route: 065
  251. ENTYVIO [Suspect]
     Active Substance: VEDOLIZUMAB
     Dosage: SOLUTION FOR INJECTION (ADALIMUMAB SOLUTION FOR INJECTION, SINGLE DOSE PEN)
     Route: 065
  252. ENTYVIO [Suspect]
     Active Substance: VEDOLIZUMAB
     Dosage: SOLUTION FOR INJECTION
     Route: 065
  253. ENTYVIO [Suspect]
     Active Substance: VEDOLIZUMAB
     Dosage: SOLUTION FOR INJECTION
     Route: 065
  254. ENTYVIO [Suspect]
     Active Substance: VEDOLIZUMAB
     Dosage: SOLUTION FOR INJECTION
     Route: 065
  255. ENTYVIO [Suspect]
     Active Substance: VEDOLIZUMAB
     Dosage: SOLUTION FOR INJECTION
     Route: 065
  256. ENTYVIO [Suspect]
     Active Substance: VEDOLIZUMAB
     Dosage: SOLUTION FOR INJECTION
     Route: 065
  257. ENTYVIO [Suspect]
     Active Substance: VEDOLIZUMAB
     Dosage: SOLUTION FOR INJECTION
     Route: 065
  258. ENTYVIO [Suspect]
     Active Substance: VEDOLIZUMAB
     Dosage: SOLUTION FOR INJECTION
     Route: 065
  259. ENTYVIO [Suspect]
     Active Substance: VEDOLIZUMAB
     Dosage: SOLUTION FOR INJECTION
     Route: 065
  260. ENTYVIO [Suspect]
     Active Substance: VEDOLIZUMAB
     Dosage: SOLUTION FOR INJECTION
     Route: 065
  261. ENTYVIO [Suspect]
     Active Substance: VEDOLIZUMAB
     Dosage: SOLUTION FOR INJECTION
     Route: 050
  262. ENTYVIO [Suspect]
     Active Substance: VEDOLIZUMAB
     Dosage: SOLUTION FOR INJECTION
     Route: 050
  263. ENTYVIO [Suspect]
     Active Substance: VEDOLIZUMAB
     Dosage: SOLUTION FOR INJECTION
     Route: 050
  264. ENTYVIO [Suspect]
     Active Substance: VEDOLIZUMAB
     Dosage: SOLUTION FOR INJECTION
     Route: 050
  265. ENTYVIO [Suspect]
     Active Substance: VEDOLIZUMAB
     Dosage: SOLUTION FOR INJECTION
     Route: 050
  266. ENTYVIO [Suspect]
     Active Substance: VEDOLIZUMAB
     Dosage: SOLUTION FOR INJECTION
     Route: 050
  267. ENTYVIO [Suspect]
     Active Substance: VEDOLIZUMAB
     Dosage: SOLUTION FOR INJECTION
     Route: 050
  268. ENTYVIO [Suspect]
     Active Substance: VEDOLIZUMAB
     Dosage: SOLUTION FOR INJECTION
     Route: 050
  269. ENTYVIO [Suspect]
     Active Substance: VEDOLIZUMAB
     Dosage: SOLUTION FOR INJECTION
     Route: 050
  270. ENTYVIO [Suspect]
     Active Substance: VEDOLIZUMAB
     Dosage: SOLUTION FOR INJECTION
     Route: 050
  271. ENTYVIO [Suspect]
     Active Substance: VEDOLIZUMAB
     Dosage: SOLUTION FOR INJECTION
     Route: 050
  272. ENTYVIO [Suspect]
     Active Substance: VEDOLIZUMAB
     Dosage: SOLUTION FOR INJECTION
     Route: 050
  273. ENTYVIO [Suspect]
     Active Substance: VEDOLIZUMAB
     Dosage: UNK, SINGLE DOSE PEN
     Route: 050
  274. ENTYVIO [Suspect]
     Active Substance: VEDOLIZUMAB
     Indication: Crohn^s disease
     Dosage: UNK, SINGLE DOSE PEN (OROMUCOSAL SUSPENSION)
     Route: 050
  275. ENTYVIO [Suspect]
     Active Substance: VEDOLIZUMAB
     Indication: Crohn^s disease
     Dosage: UNK, SINGLE DOSE PEN (OROMUCOSAL SUSPENSION)
     Route: 050
  276. ENTYVIO [Suspect]
     Active Substance: VEDOLIZUMAB
     Dosage: UNK, SINGLE DOSE PEN (OROMUCOSAL SUSPENSION)
     Route: 050
  277. ENTYVIO [Suspect]
     Active Substance: VEDOLIZUMAB
     Dosage: UNK, SINGLE DOSE PEN (OROMUCOSAL SUSPENSION)
     Route: 050
  278. ENTYVIO [Suspect]
     Active Substance: VEDOLIZUMAB
     Dosage: UNK, SINGLE DOSE PEN (OROMUCOSAL SUSPENSION)
     Route: 050
  279. ENTYVIO [Suspect]
     Active Substance: VEDOLIZUMAB
     Dosage: UNK, SINGLE DOSE PEN (OROMUCOSAL SUSPENSION)
     Route: 050
  280. ENTYVIO [Suspect]
     Active Substance: VEDOLIZUMAB
     Dosage: UNK, SINGLE DOSE PEN (OROMUCOSAL SUSPENSION)
     Route: 050
  281. ENTYVIO [Suspect]
     Active Substance: VEDOLIZUMAB
     Dosage: UNK, SINGLE DOSE PEN (OROMUCOSAL SUSPENSION)
     Route: 050
  282. ENTYVIO [Suspect]
     Active Substance: VEDOLIZUMAB
     Dosage: UNK, SINGLE DOSE PEN (OROMUCOSAL SUSPENSION)
     Route: 050
  283. ENTYVIO [Suspect]
     Active Substance: VEDOLIZUMAB
     Dosage: UNK, SINGLE DOSE PEN (OROMUCOSAL SUSPENSION)
     Route: 050
  284. ENTYVIO [Suspect]
     Active Substance: VEDOLIZUMAB
     Dosage: DOSE FORM: 231
  285. ENTYVIO [Suspect]
     Active Substance: VEDOLIZUMAB
     Dosage: UNK; ADDITIONAL INFO: ROUTE:OTHER
     Route: 050
  286. ENTYVIO [Suspect]
     Active Substance: VEDOLIZUMAB
     Dosage: SOLUTION FOR INJECTION (ADALIMUMAB SOLUTION FOR INJECTION, SINGLE DOSE PEN)
     Route: 065
  287. ENTYVIO [Suspect]
     Active Substance: VEDOLIZUMAB
     Dosage: SOLUTION FOR INJECTION (ADALIMUMAB SOLUTION FOR INJECTION, SINGLE DOSE PEN)
     Route: 065
  288. ENTYVIO [Suspect]
     Active Substance: VEDOLIZUMAB
     Dosage: SOLUTION FOR INJECTION (ADALIMUMAB SOLUTION FOR INJECTION, SINGLE DOSE PEN)
     Route: 065
  289. ENTYVIO [Suspect]
     Active Substance: VEDOLIZUMAB
     Dosage: SOLUTION FOR INJECTION (ADALIMUMAB SOLUTION FOR INJECTION, SINGLE DOSE PEN)
     Route: 065
  290. ENTYVIO [Suspect]
     Active Substance: VEDOLIZUMAB
     Dosage: SOLUTION FOR INJECTION (ADALIMUMAB SOLUTION FOR INJECTION, SINGLE DOSE PEN)
     Route: 065
  291. ENTYVIO [Suspect]
     Active Substance: VEDOLIZUMAB
     Dosage: SOLUTION FOR INJECTION (ADALIMUMAB SOLUTION FOR INJECTION, SINGLE DOSE PEN)
     Route: 065
  292. ENTYVIO [Suspect]
     Active Substance: VEDOLIZUMAB
     Dosage: SOLUTION FOR INJECTION (ADALIMUMAB SOLUTION FOR INJECTION, SINGLE DOSE PEN)
     Route: 065
  293. ENTYVIO [Suspect]
     Active Substance: VEDOLIZUMAB
     Dosage: SOLUTION FOR INJECTION (ADALIMUMAB SOLUTION FOR INJECTION, SINGLE DOSE PEN)
     Route: 065
  294. ENTYVIO [Suspect]
     Active Substance: VEDOLIZUMAB
     Dosage: SOLUTION FOR INJECTION (ADALIMUMAB SOLUTION FOR INJECTION, SINGLE DOSE PEN)
     Route: 065
  295. ENTYVIO [Suspect]
     Active Substance: VEDOLIZUMAB
     Dosage: SOLUTION FOR INJECTION (ADALIMUMAB SOLUTION FOR INJECTION, SINGLE DOSE PEN)
     Route: 065
  296. ENTYVIO [Suspect]
     Active Substance: VEDOLIZUMAB
     Dosage: SOLUTION FOR INJECTION (ADALIMUMAB SOLUTION FOR INJECTION, SINGLE DOSE PEN)
     Route: 065
  297. ENTYVIO [Suspect]
     Active Substance: VEDOLIZUMAB
     Dosage: SOLUTION FOR INJECTION (ADALIMUMAB SOLUTION FOR INJECTION, SINGLE DOSE PEN)
     Route: 065
  298. ENTYVIO [Suspect]
     Active Substance: VEDOLIZUMAB
     Dosage: SOLUTION FOR INJECTION
     Route: 065
  299. ENTYVIO [Suspect]
     Active Substance: VEDOLIZUMAB
     Dosage: UNK, SINGLE DOSE PEN (OROMUCOSAL SUSPENSION)
     Route: 050
  300. ENTYVIO [Suspect]
     Active Substance: VEDOLIZUMAB
     Dosage: UNK, SINGLE DOSE PEN (OROMUCOSAL SUSPENSION)
     Route: 050
  301. ENTYVIO [Suspect]
     Active Substance: VEDOLIZUMAB
     Dosage: UNK, SINGLE DOSE PEN (OROMUCOSAL SUSPENSION)
     Route: 050
  302. ENTYVIO [Suspect]
     Active Substance: VEDOLIZUMAB
     Dosage: UNK, SINGLE DOSE PEN (OROMUCOSAL SUSPENSION)
     Route: 050
  303. ENTYVIO [Suspect]
     Active Substance: VEDOLIZUMAB
     Dosage: UNK, SINGLE DOSE PEN (OROMUCOSAL SUSPENSION)
     Route: 050
  304. ENTYVIO [Suspect]
     Active Substance: VEDOLIZUMAB
     Dosage: UNK, SINGLE DOSE PEN (OROMUCOSAL SUSPENSION)
     Route: 050
  305. ENTYVIO [Suspect]
     Active Substance: VEDOLIZUMAB
     Dosage: UNK, SINGLE DOSE PEN (OROMUCOSAL SUSPENSION)
     Route: 050
  306. ENTYVIO [Suspect]
     Active Substance: VEDOLIZUMAB
     Dosage: UNK, SINGLE DOSE PEN (OROMUCOSAL SUSPENSION)
     Route: 050
  307. ENTYVIO [Suspect]
     Active Substance: VEDOLIZUMAB
     Dosage: UNK, SINGLE DOSE PEN (OROMUCOSAL SUSPENSION)
     Route: 050
  308. ENTYVIO [Suspect]
     Active Substance: VEDOLIZUMAB
     Dosage: UNK, SINGLE DOSE PEN (OROMUCOSAL SUSPENSION)
     Route: 050
  309. ENTYVIO [Suspect]
     Active Substance: VEDOLIZUMAB
     Dosage: UNK, SINGLE DOSE PEN (OROMUCOSAL SUSPENSION)
     Route: 050
  310. ENTYVIO [Suspect]
     Active Substance: VEDOLIZUMAB
     Dosage: UNK, SINGLE DOSE PEN (OROMUCOSAL SUSPENSION)
     Route: 050
  311. ENTYVIO [Suspect]
     Active Substance: VEDOLIZUMAB
     Dosage: UNK, SINGLE DOSE PEN (OROMUCOSAL SUSPENSION)
     Route: 050
  312. ENTYVIO [Suspect]
     Active Substance: VEDOLIZUMAB
     Dosage: UNK, SINGLE DOSE PEN (OROMUCOSAL SUSPENSION)
     Route: 050
  313. ENTYVIO [Suspect]
     Active Substance: VEDOLIZUMAB
     Dosage: UNK, SINGLE DOSE PEN (OROMUCOSAL SUSPENSION)
     Route: 050
  314. ENTYVIO [Suspect]
     Active Substance: VEDOLIZUMAB
     Dosage: UNK (ADALIMUMAB SOLUTION FOR INJECTION, SINGLE DOSE PEN)
     Route: 050
  315. ENTYVIO [Suspect]
     Active Substance: VEDOLIZUMAB
     Dosage: UNK (ADALIMUMAB SOLUTION FOR INJECTION, SINGLE DOSE PEN)
     Route: 050
  316. ENTYVIO [Suspect]
     Active Substance: VEDOLIZUMAB
     Dosage: UNK (ADALIMUMAB SOLUTION FOR INJECTION, SINGLE DOSE PEN)
     Route: 050
  317. ENTYVIO [Suspect]
     Active Substance: VEDOLIZUMAB
     Dosage: UNK (ADALIMUMAB SOLUTION FOR INJECTION, SINGLE DOSE PEN)
     Route: 050
  318. ENTYVIO [Suspect]
     Active Substance: VEDOLIZUMAB
     Dosage: UNK (ADALIMUMAB SOLUTION FOR INJECTION, SINGLE DOSE PEN)
     Route: 050
  319. ENTYVIO [Suspect]
     Active Substance: VEDOLIZUMAB
     Dosage: UNK (ADALIMUMAB SOLUTION FOR INJECTION, SINGLE DOSE PEN)
     Route: 050
  320. ENTYVIO [Suspect]
     Active Substance: VEDOLIZUMAB
     Dosage: UNK (SINGLE DOSE PEN) (ADALIMUMAB SOLUTION FOR INJECTION, SINGLE DOSE PEN)
     Route: 065
  321. ENTYVIO [Suspect]
     Active Substance: VEDOLIZUMAB
     Dosage: UNK OTHER (ADALIMUMAB SOLUTION FOR INJECTION, SINGLE DOSE PEN)
     Route: 065
  322. ENTYVIO [Suspect]
     Active Substance: VEDOLIZUMAB
     Indication: Crohn^s disease
     Dosage: UNK OTHER
     Route: 065
  323. ENTYVIO [Suspect]
     Active Substance: VEDOLIZUMAB
     Indication: Crohn^s disease
     Dosage: UNK OTHER
     Route: 065
  324. ENTYVIO [Suspect]
     Active Substance: VEDOLIZUMAB
     Dosage: UNK OTHER
     Route: 065
  325. ENTYVIO [Suspect]
     Active Substance: VEDOLIZUMAB
     Dosage: UNK OTHER
     Route: 065
  326. ENTYVIO [Suspect]
     Active Substance: VEDOLIZUMAB
     Dosage: UNK (SINGLE DOSE PEN)
     Route: 065
  327. ENTYVIO [Suspect]
     Active Substance: VEDOLIZUMAB
     Dosage: UNK
     Route: 050
  328. ENTYVIO [Suspect]
     Active Substance: VEDOLIZUMAB
     Dosage: UNK
     Route: 050
  329. ENTYVIO [Suspect]
     Active Substance: VEDOLIZUMAB
     Dosage: UNK
     Route: 050
  330. ENTYVIO [Suspect]
     Active Substance: VEDOLIZUMAB
     Dosage: UNK
     Route: 050
  331. ENTYVIO [Suspect]
     Active Substance: VEDOLIZUMAB
     Dosage: UNK
     Route: 050
  332. ENTYVIO [Suspect]
     Active Substance: VEDOLIZUMAB
     Dosage: UNK
     Route: 050
  333. ENTYVIO [Suspect]
     Active Substance: VEDOLIZUMAB
     Dosage: SINGLE DOSE PEN; ;
     Route: 050
  334. ENTYVIO [Suspect]
     Active Substance: VEDOLIZUMAB
     Dosage: UNK
     Route: 050
  335. ENTYVIO [Suspect]
     Active Substance: VEDOLIZUMAB
     Dosage: UNK, SINGLE DOSE PEN
     Route: 065
  336. ENTYVIO [Suspect]
     Active Substance: VEDOLIZUMAB
     Dosage: UNK
     Route: 065
  337. ENTYVIO [Suspect]
     Active Substance: VEDOLIZUMAB
     Dosage: UNK
     Route: 065
  338. ENTYVIO [Suspect]
     Active Substance: VEDOLIZUMAB
     Dosage: UNK
     Route: 065
  339. ENTYVIO [Suspect]
     Active Substance: VEDOLIZUMAB
     Dosage: UNK
     Route: 065
  340. ENTYVIO [Suspect]
     Active Substance: VEDOLIZUMAB
     Dosage: UNK
     Route: 065
  341. ENTYVIO [Suspect]
     Active Substance: VEDOLIZUMAB
     Dosage: UNK
     Route: 065
  342. ENTYVIO [Suspect]
     Active Substance: VEDOLIZUMAB
     Dosage: UNK
     Route: 065
  343. ENTYVIO [Suspect]
     Active Substance: VEDOLIZUMAB
     Dosage: UNK
     Route: 065
  344. ENTYVIO [Suspect]
     Active Substance: VEDOLIZUMAB
     Dosage: UNK, SINGLE DOSE PEN
     Route: 050
  345. ENTYVIO [Suspect]
     Active Substance: VEDOLIZUMAB
     Dosage: UNK, SINGLE DOSE PEN
     Route: 050
  346. ENTYVIO [Suspect]
     Active Substance: VEDOLIZUMAB
     Dosage: UNK, SINGLE DOSE PEN
     Route: 050
  347. ENTYVIO [Suspect]
     Active Substance: VEDOLIZUMAB
     Dosage: UNK, SINGLE DOSE PEN
     Route: 050
  348. ENTYVIO [Suspect]
     Active Substance: VEDOLIZUMAB
     Dosage: UNK
  349. ENTYVIO [Suspect]
     Active Substance: VEDOLIZUMAB
     Dosage: UNK, SINGLE DOSE PEN
     Route: 050
  350. ENTYVIO [Suspect]
     Active Substance: VEDOLIZUMAB
     Dosage: UNK, SINGLE DOSE PEN
     Route: 050
  351. ENTYVIO [Suspect]
     Active Substance: VEDOLIZUMAB
     Dosage: UNK, SINGLE DOSE PEN
     Route: 050
  352. ENTYVIO [Suspect]
     Active Substance: VEDOLIZUMAB
     Dosage: UNK, SINGLE DOSE PEN
     Route: 050
  353. ENTYVIO [Suspect]
     Active Substance: VEDOLIZUMAB
     Dosage: UNK, SINGLE DOSE PEN
     Route: 050
  354. ENTYVIO [Suspect]
     Active Substance: VEDOLIZUMAB
     Dosage: UNK, SINGLE DOSE PEN
     Route: 050
  355. ENTYVIO [Suspect]
     Active Substance: VEDOLIZUMAB
     Dosage: UNK, SINGLE DOSE PEN
     Route: 050
  356. ENTYVIO [Suspect]
     Active Substance: VEDOLIZUMAB
     Dosage: UNK, SINGLE DOSE PEN
     Route: 050
  357. ENTYVIO [Suspect]
     Active Substance: VEDOLIZUMAB
     Dosage: UNK, SINGLE DOSE PEN
     Route: 050
  358. ENTYVIO [Suspect]
     Active Substance: VEDOLIZUMAB
     Dosage: UNK, SINGLE DOSE PEN
     Route: 050
  359. ENTYVIO [Suspect]
     Active Substance: VEDOLIZUMAB
     Dosage: UNK, SINGLE DOSE PEN
     Route: 050
  360. ENTYVIO [Suspect]
     Active Substance: VEDOLIZUMAB
     Dosage: UNK, SINGLE DOSE PEN
     Route: 050
  361. ENTYVIO [Suspect]
     Active Substance: VEDOLIZUMAB
     Dosage: UNK, SINGLE DOSE PEN
     Route: 050
  362. ENTYVIO [Suspect]
     Active Substance: VEDOLIZUMAB
     Dosage: UNK, SINGLE DOSE PEN
     Route: 050
  363. ENTYVIO [Suspect]
     Active Substance: VEDOLIZUMAB
     Dosage: UNK, SINGLE DOSE PEN
     Route: 050
  364. ENTYVIO [Suspect]
     Active Substance: VEDOLIZUMAB
     Dosage: UNK, SINGLE DOSE PEN
     Route: 050
  365. ENTYVIO [Suspect]
     Active Substance: VEDOLIZUMAB
     Dosage: UNK, SINGLE DOSE PEN
     Route: 050
  366. ENTYVIO [Suspect]
     Active Substance: VEDOLIZUMAB
     Dosage: UNK, SINGLE DOSE PEN
     Route: 050
  367. ENTYVIO [Suspect]
     Active Substance: VEDOLIZUMAB
     Dosage: UNKNOWN
     Route: 065
  368. ENTYVIO [Suspect]
     Active Substance: VEDOLIZUMAB
     Dosage: UNKNOWN
     Route: 065
  369. ENTYVIO [Suspect]
     Active Substance: VEDOLIZUMAB
     Dosage: UNKNOWN
     Route: 065
  370. ENTYVIO [Suspect]
     Active Substance: VEDOLIZUMAB
     Dosage: UNKNOWN
     Route: 065
  371. ENTYVIO [Suspect]
     Active Substance: VEDOLIZUMAB
     Dosage: UNKNOWN
     Route: 065
  372. ENTYVIO [Suspect]
     Active Substance: VEDOLIZUMAB
     Indication: Crohn^s disease
     Dosage: UNKNOWN, UNK, SINGLE DOSE PEN
     Route: 065
  373. ENTYVIO [Suspect]
     Active Substance: VEDOLIZUMAB
     Indication: Crohn^s disease
     Dosage: UNKNOWN, UNK, SINGLE DOSE PEN
     Route: 065
  374. ENTYVIO [Suspect]
     Active Substance: VEDOLIZUMAB
     Dosage: UNKNOWN, UNK, SINGLE DOSE PEN
     Route: 065
  375. ENTYVIO [Suspect]
     Active Substance: VEDOLIZUMAB
     Dosage: UNKNOWN, UNK, SINGLE DOSE PEN
     Route: 065
  376. ENTYVIO [Suspect]
     Active Substance: VEDOLIZUMAB
     Dosage: UNKNOWN, UNK, SINGLE DOSE PEN
     Route: 065
  377. ENTYVIO [Suspect]
     Active Substance: VEDOLIZUMAB
     Dosage: UNKNOWN, UNK, SINGLE DOSE PEN
     Route: 065
  378. ENTYVIO [Suspect]
     Active Substance: VEDOLIZUMAB
     Dosage: UNKNOWN, UNK, SINGLE DOSE PEN
     Route: 065
  379. ENTYVIO [Suspect]
     Active Substance: VEDOLIZUMAB
     Dosage: UNKNOWN, UNK, SINGLE DOSE PEN
     Route: 065
  380. ENTYVIO [Suspect]
     Active Substance: VEDOLIZUMAB
     Dosage: UNKNOWN, UNK, SINGLE DOSE PEN
     Route: 065
  381. ENTYVIO [Suspect]
     Active Substance: VEDOLIZUMAB
     Dosage: UNKNOWN, UNK, SINGLE DOSE PEN
     Route: 065
  382. ENTYVIO [Suspect]
     Active Substance: VEDOLIZUMAB
     Dosage: UNKNOWN, UNK, SINGLE DOSE PEN
     Route: 065
  383. ENTYVIO [Suspect]
     Active Substance: VEDOLIZUMAB
     Dosage: UNKNOWN, UNK, SINGLE DOSE PEN
     Route: 065
  384. ENTYVIO [Suspect]
     Active Substance: VEDOLIZUMAB
     Dosage: UNKNOWN, UNK, SINGLE DOSE PEN
     Route: 065
  385. ENTYVIO [Suspect]
     Active Substance: VEDOLIZUMAB
     Dosage: UNKNOWN, UNK, SINGLE DOSE PEN
     Route: 065
  386. ENTYVIO [Suspect]
     Active Substance: VEDOLIZUMAB
     Dosage: UNKNOWN, UNK, SINGLE DOSE PEN
     Route: 065
  387. ENTYVIO [Suspect]
     Active Substance: VEDOLIZUMAB
     Dosage: UNKNOWN, UNK, SINGLE DOSE PEN
     Route: 065
  388. ENTYVIO [Suspect]
     Active Substance: VEDOLIZUMAB
     Dosage: UNKNOWN, UNK, SINGLE DOSE PEN
     Route: 065
  389. ENTYVIO [Suspect]
     Active Substance: VEDOLIZUMAB
     Dosage: UNKNOWN, UNK, SINGLE DOSE PEN
     Route: 065
  390. ENTYVIO [Suspect]
     Active Substance: VEDOLIZUMAB
     Dosage: UNKNOWN, UNK, SINGLE DOSE PEN
     Route: 065
  391. ENTYVIO [Suspect]
     Active Substance: VEDOLIZUMAB
     Dosage: UNKNOWN, UNK, SINGLE DOSE PEN
     Route: 065
  392. ENTYVIO [Suspect]
     Active Substance: VEDOLIZUMAB
     Dosage: UNKNOWN, UNK, SINGLE DOSE PEN
     Route: 065
  393. ENTYVIO [Suspect]
     Active Substance: VEDOLIZUMAB
     Dosage: UNKNOWN, UNK, SINGLE DOSE PEN
     Route: 065
  394. ENTYVIO [Suspect]
     Active Substance: VEDOLIZUMAB
     Dosage: UNKNOWN, UNK, SINGLE DOSE PEN
     Route: 065
  395. ENTYVIO [Suspect]
     Active Substance: VEDOLIZUMAB
     Dosage: UNKNOWN, UNK, SINGLE DOSE PEN
     Route: 065
  396. ENTYVIO [Suspect]
     Active Substance: VEDOLIZUMAB
     Dosage: UNKNOWN, UNK, SINGLE DOSE PEN
     Route: 050
  397. ENTYVIO [Suspect]
     Active Substance: VEDOLIZUMAB
     Dosage: UNKNOWN, UNK, SINGLE DOSE PEN
     Route: 050
  398. ENTYVIO [Suspect]
     Active Substance: VEDOLIZUMAB
     Dosage: UNKNOWN, UNK, SINGLE DOSE PEN
     Route: 050
  399. ENTYVIO [Suspect]
     Active Substance: VEDOLIZUMAB
     Dosage: UNKNOWN, UNK, SINGLE DOSE PEN
     Route: 050
  400. ENTYVIO [Suspect]
     Active Substance: VEDOLIZUMAB
     Dosage: UNKNOWN, UNK, SINGLE DOSE PEN
     Route: 050
  401. ENTYVIO [Suspect]
     Active Substance: VEDOLIZUMAB
     Dosage: UNKNOWN, UNK, SINGLE DOSE PEN
     Route: 050
  402. ENTYVIO [Suspect]
     Active Substance: VEDOLIZUMAB
     Dosage: UNKNOWN, UNK, SINGLE DOSE PEN
     Route: 050
  403. ENTYVIO [Suspect]
     Active Substance: VEDOLIZUMAB
     Dosage: UNKNOWN, UNK, SINGLE DOSE PEN
     Route: 050
  404. ENTYVIO [Suspect]
     Active Substance: VEDOLIZUMAB
     Dosage: UNKNOWN, UNK, SINGLE DOSE PEN
     Route: 050
  405. ENTYVIO [Suspect]
     Active Substance: VEDOLIZUMAB
     Dosage: UNKNOWN, UNK, SINGLE DOSE PEN
     Route: 050
  406. ENTYVIO [Suspect]
     Active Substance: VEDOLIZUMAB
     Dosage: UNKNOWN, UNK, SINGLE DOSE PEN
     Route: 050
  407. ENTYVIO [Suspect]
     Active Substance: VEDOLIZUMAB
     Dosage: UNKNOWN, UNK, SINGLE DOSE PEN
     Route: 050
  408. ENTYVIO [Suspect]
     Active Substance: VEDOLIZUMAB
     Indication: Crohn^s disease
     Dosage: UNKNOWN, UNK, SINGLE DOSE PEN
     Route: 065
  409. ENTYVIO [Suspect]
     Active Substance: VEDOLIZUMAB
     Indication: Crohn^s disease
     Dosage: UNKNOWN, UNK, SINGLE DOSE PEN
     Route: 065
  410. ENTYVIO [Suspect]
     Active Substance: VEDOLIZUMAB
     Dosage: UNKNOWN, UNK, SINGLE DOSE PEN
     Route: 065
  411. ENTYVIO [Suspect]
     Active Substance: VEDOLIZUMAB
     Dosage: UNKNOWN, UNK, SINGLE DOSE PEN
     Route: 065
  412. ENTYVIO [Suspect]
     Active Substance: VEDOLIZUMAB
     Dosage: UNKNOWN, UNK, SINGLE DOSE PEN
     Route: 065
  413. ENTYVIO [Suspect]
     Active Substance: VEDOLIZUMAB
     Dosage: UNKNOWN, UNK, SINGLE DOSE PEN
     Route: 065
  414. ENTYVIO [Suspect]
     Active Substance: VEDOLIZUMAB
     Dosage: UNKNOWN, UNK, SINGLE DOSE PEN
     Route: 065
  415. ENTYVIO [Suspect]
     Active Substance: VEDOLIZUMAB
     Dosage: UNKNOWN, UNK, SINGLE DOSE PEN
     Route: 065
  416. ENTYVIO [Suspect]
     Active Substance: VEDOLIZUMAB
     Dosage: UNKNOWN, UNK, SINGLE DOSE PEN
     Route: 065
  417. ENTYVIO [Suspect]
     Active Substance: VEDOLIZUMAB
     Dosage: UNKNOWN, UNK, SINGLE DOSE PEN
     Route: 065
  418. ENTYVIO [Suspect]
     Active Substance: VEDOLIZUMAB
     Dosage: UNKNOWN, UNK, SINGLE DOSE PEN
     Route: 065
  419. ENTYVIO [Suspect]
     Active Substance: VEDOLIZUMAB
     Dosage: UNKNOWN, UNK, SINGLE DOSE PEN
     Route: 065
  420. ENTYVIO [Suspect]
     Active Substance: VEDOLIZUMAB
     Dosage: UNKNOWN, UNK, SINGLE DOSE PEN
     Route: 065
  421. ENTYVIO [Suspect]
     Active Substance: VEDOLIZUMAB
     Dosage: UNKNOWN, UNK, SINGLE DOSE PEN
     Route: 065
  422. ENTYVIO [Suspect]
     Active Substance: VEDOLIZUMAB
     Dosage: UNKNOWN, UNK, SINGLE DOSE PEN
     Route: 065
  423. ENTYVIO [Suspect]
     Active Substance: VEDOLIZUMAB
     Dosage: UNKNOWN, UNK, SINGLE DOSE PEN
     Route: 065
  424. ENTYVIO [Suspect]
     Active Substance: VEDOLIZUMAB
     Dosage: UNKNOWN, UNK, SINGLE DOSE PEN
     Route: 065
  425. ENTYVIO [Suspect]
     Active Substance: VEDOLIZUMAB
     Dosage: UNKNOWN, UNK, SINGLE DOSE PEN
     Route: 065
  426. ENTYVIO [Suspect]
     Active Substance: VEDOLIZUMAB
     Dosage: UNKNOWN, UNK, SINGLE DOSE PEN
     Route: 065
  427. ENTYVIO [Suspect]
     Active Substance: VEDOLIZUMAB
     Dosage: UNKNOWN, UNK, SINGLE DOSE PEN
     Route: 065
  428. ENTYVIO [Suspect]
     Active Substance: VEDOLIZUMAB
     Dosage: UNKNOWN, UNK, SINGLE DOSE PEN
     Route: 065
  429. ENTYVIO [Suspect]
     Active Substance: VEDOLIZUMAB
     Dosage: UNKNOWN, UNK, SINGLE DOSE PEN
     Route: 065
  430. ENTYVIO [Suspect]
     Active Substance: VEDOLIZUMAB
     Dosage: UNKNOWN, UNK, SINGLE DOSE PEN
     Route: 065
  431. INFLIXIMAB [Suspect]
     Active Substance: INFLIXIMAB
     Indication: Crohn^s disease
     Dosage: UNK
     Route: 050
  432. INFLIXIMAB [Suspect]
     Active Substance: INFLIXIMAB
     Dosage: UNK
     Route: 050
  433. INFLIXIMAB [Suspect]
     Active Substance: INFLIXIMAB
     Dosage: UNK
     Route: 050
  434. INFLIXIMAB [Suspect]
     Active Substance: INFLIXIMAB
     Dosage: UNK
     Route: 050
  435. INFLIXIMAB [Suspect]
     Active Substance: INFLIXIMAB
     Dosage: UNK
     Route: 050
  436. INFLIXIMAB [Suspect]
     Active Substance: INFLIXIMAB
     Dosage: UNK
     Route: 050
  437. INFLIXIMAB [Suspect]
     Active Substance: INFLIXIMAB
     Dosage: UNK
     Route: 042
  438. INFLIXIMAB [Suspect]
     Active Substance: INFLIXIMAB
     Dosage: UNK
     Route: 042
  439. INFLIXIMAB [Suspect]
     Active Substance: INFLIXIMAB
     Dosage: UNK
     Route: 042
  440. INFLIXIMAB [Suspect]
     Active Substance: INFLIXIMAB
     Dosage: UNK
     Route: 042
  441. INFLIXIMAB [Suspect]
     Active Substance: INFLIXIMAB
     Dosage: UNK
     Route: 042
  442. INFLIXIMAB [Suspect]
     Active Substance: INFLIXIMAB
     Dosage: UNK
     Route: 042
  443. INFLIXIMAB [Suspect]
     Active Substance: INFLIXIMAB
     Dosage: UNK
     Route: 042
  444. INFLIXIMAB [Suspect]
     Active Substance: INFLIXIMAB
     Dosage: UNK
     Route: 042
  445. INFLIXIMAB [Suspect]
     Active Substance: INFLIXIMAB
     Dosage: UNK
     Route: 042
  446. INFLIXIMAB [Suspect]
     Active Substance: INFLIXIMAB
     Dosage: UNK
     Route: 042
  447. INFLIXIMAB [Suspect]
     Active Substance: INFLIXIMAB
     Dosage: UNK
     Route: 042
  448. INFLIXIMAB [Suspect]
     Active Substance: INFLIXIMAB
     Dosage: UNK
     Route: 042
  449. INFLIXIMAB [Suspect]
     Active Substance: INFLIXIMAB
     Dosage: UNK
     Route: 042
  450. INFLIXIMAB [Suspect]
     Active Substance: INFLIXIMAB
     Dosage: UNK
     Route: 042
  451. INFLIXIMAB [Suspect]
     Active Substance: INFLIXIMAB
     Dosage: UNK
     Route: 042
  452. INFLIXIMAB [Suspect]
     Active Substance: INFLIXIMAB
     Dosage: UNK
     Route: 042
  453. METHOTREXATE SODIUM [Suspect]
     Active Substance: METHOTREXATE SODIUM
     Indication: Product used for unknown indication
     Dosage: UNK; ;ADDITIONAL INFO: ROUTE:OTHER, UNK; ;
     Route: 065
  454. METHOTREXATE SODIUM [Suspect]
     Active Substance: METHOTREXATE SODIUM
     Dosage: UNK; ;ADDITIONAL INFO: ROUTE:OTHER, UNK; ;
     Route: 065
  455. METHOTREXATE SODIUM [Suspect]
     Active Substance: METHOTREXATE SODIUM
     Dosage: UNK; ADDITIONAL INFO: ROUTE:OTHER, UNK; ;
     Route: 065
  456. METHOTREXATE SODIUM [Suspect]
     Active Substance: METHOTREXATE SODIUM
     Dosage: UNK UNK, UNK
     Route: 065
  457. METHOTREXATE SODIUM [Suspect]
     Active Substance: METHOTREXATE SODIUM
     Dosage: UNKNOWN; OTHER
     Route: 050
  458. METHOTREXATE SODIUM [Suspect]
     Active Substance: METHOTREXATE SODIUM
     Dosage: UNKNOWN; OTHER
     Route: 050
  459. METHOTREXATE SODIUM [Suspect]
     Active Substance: METHOTREXATE SODIUM
     Dosage: UNKNOWN; OTHER
     Route: 050
  460. METHOTREXATE SODIUM [Suspect]
     Active Substance: METHOTREXATE SODIUM
     Dosage: UNK, ADALIMUMAB SOLUTION FOR INJECTION, SINGLE DOSE PEN
     Route: 050
     Dates: start: 20211112
  461. METHOTREXATE SODIUM [Suspect]
     Active Substance: METHOTREXATE SODIUM
     Dosage: UNK UNK, UNK
     Route: 065
  462. METHOTREXATE SODIUM [Suspect]
     Active Substance: METHOTREXATE SODIUM
     Dosage: UNKNOWN (ADALIMUMAB SOLUTION FOR INJECTION, SINGLE DOSE PEN)
     Route: 050
  463. METHOTREXATE SODIUM [Suspect]
     Active Substance: METHOTREXATE SODIUM
     Dosage: UNKNOWN (ADALIMUMAB SOLUTION FOR INJECTION, SINGLE DOSE PEN)
     Route: 050
  464. METHOTREXATE SODIUM [Suspect]
     Active Substance: METHOTREXATE SODIUM
     Dosage: UNK, ADALIMUMAB SOLUTION FOR INJECTION, SINGLE DOSE PEN
     Route: 050
  465. METHOTREXATE SODIUM [Suspect]
     Active Substance: METHOTREXATE SODIUM
     Dosage: UNK, ADALIMUMAB SOLUTION FOR INJECTION, SINGLE DOSE PEN
     Route: 050
     Dates: start: 20211211
  466. METHOTREXATE SODIUM [Suspect]
     Active Substance: METHOTREXATE SODIUM
     Dosage: UNK (ADALIMUMAB SOLUTION FOR INJECTION, SINGLE DOSE PEN)
     Route: 050
  467. METHOTREXATE SODIUM [Suspect]
     Active Substance: METHOTREXATE SODIUM
     Dosage: UNK UNK, UNK
     Route: 065
  468. METHOTREXATE SODIUM [Suspect]
     Active Substance: METHOTREXATE SODIUM
     Dosage: UNK UNK, UNK
     Route: 065
  469. METHOTREXATE SODIUM [Suspect]
     Active Substance: METHOTREXATE SODIUM
     Dosage: UNK UNK, UNK
     Route: 065
  470. METHOTREXATE SODIUM [Suspect]
     Active Substance: METHOTREXATE SODIUM
     Dosage: UNK UNK, UNK
     Route: 065
  471. METHOTREXATE SODIUM [Suspect]
     Active Substance: METHOTREXATE SODIUM
     Dosage: UNKNOWN (ADALIMUMAB SOLUTION FOR INJECTION, SINGLE DOSE PEN)
     Route: 050
  472. METHOTREXATE SODIUM [Suspect]
     Active Substance: METHOTREXATE SODIUM
     Dosage: UNKNOWN (ADALIMUMAB SOLUTION FOR INJECTION, SINGLE DOSE PEN)
     Route: 050
  473. METHOTREXATE SODIUM [Suspect]
     Active Substance: METHOTREXATE SODIUM
     Dosage: UNK
     Route: 050
  474. METHOTREXATE SODIUM [Suspect]
     Active Substance: METHOTREXATE SODIUM
     Dosage: UNK
     Route: 050
  475. METHOTREXATE SODIUM [Suspect]
     Active Substance: METHOTREXATE SODIUM
     Dosage: UNK
     Route: 050
  476. METHOTREXATE SODIUM [Suspect]
     Active Substance: METHOTREXATE SODIUM
     Dosage: UNK
     Route: 050
  477. METHOTREXATE SODIUM [Suspect]
     Active Substance: METHOTREXATE SODIUM
     Dosage: UNK
     Route: 050
  478. METHOTREXATE SODIUM [Suspect]
     Active Substance: METHOTREXATE SODIUM
     Dosage: UNK
     Route: 050
  479. METHOTREXATE SODIUM [Suspect]
     Active Substance: METHOTREXATE SODIUM
     Dosage: UNK
     Route: 050
  480. METHOTREXATE SODIUM [Suspect]
     Active Substance: METHOTREXATE SODIUM
     Dosage: UNK
     Route: 050
  481. METHOTREXATE SODIUM [Suspect]
     Active Substance: METHOTREXATE SODIUM
     Dosage: UNK
     Route: 050
  482. METHOTREXATE SODIUM [Suspect]
     Active Substance: METHOTREXATE SODIUM
     Dosage: UNK
     Route: 050
  483. METHOTREXATE SODIUM [Suspect]
     Active Substance: METHOTREXATE SODIUM
     Dosage: UNKNOWN (ADALIMUMAB SOLUTION FOR INJECTION, SINGLE DOSE PEN)
     Route: 050
  484. METHOTREXATE SODIUM [Suspect]
     Active Substance: METHOTREXATE SODIUM
     Dosage: UNK; ;
     Route: 050
  485. METHOTREXATE SODIUM [Suspect]
     Active Substance: METHOTREXATE SODIUM
     Dosage: UNK
     Route: 050
  486. METHOTREXATE SODIUM [Suspect]
     Active Substance: METHOTREXATE SODIUM
     Dosage: UNK
     Route: 050
  487. METHOTREXATE SODIUM [Suspect]
     Active Substance: METHOTREXATE SODIUM
     Dosage: UNK
     Route: 050
  488. METHOTREXATE SODIUM [Suspect]
     Active Substance: METHOTREXATE SODIUM
     Dosage: UNK
     Route: 050
  489. METHOTREXATE SODIUM [Suspect]
     Active Substance: METHOTREXATE SODIUM
     Dosage: UNK
     Route: 050
  490. METHOTREXATE SODIUM [Suspect]
     Active Substance: METHOTREXATE SODIUM
     Dosage: UNK
     Route: 050
  491. METHOTREXATE SODIUM [Suspect]
     Active Substance: METHOTREXATE SODIUM
     Dosage: UNKNOWN (ADALIMUMAB SOLUTION FOR INJECTION, SINGLE DOSE PEN)
     Route: 050
  492. METHOTREXATE SODIUM [Suspect]
     Active Substance: METHOTREXATE SODIUM
     Dosage: UNKNOWN (ADALIMUMAB SOLUTION FOR INJECTION, SINGLE DOSE PEN)
     Route: 050
  493. METHOTREXATE SODIUM [Suspect]
     Active Substance: METHOTREXATE SODIUM
     Dosage: UNK UNK, UNK
     Route: 065
  494. METHOTREXATE SODIUM [Suspect]
     Active Substance: METHOTREXATE SODIUM
     Dosage: UNK UNK, UNK
     Route: 065
  495. METHOTREXATE SODIUM [Suspect]
     Active Substance: METHOTREXATE SODIUM
     Dosage: UNK UNK, UNK
     Route: 065
  496. METHOTREXATE SODIUM [Suspect]
     Active Substance: METHOTREXATE SODIUM
     Dosage: UNK UNK, UNK
     Route: 065
  497. METHOTREXATE SODIUM [Suspect]
     Active Substance: METHOTREXATE SODIUM
     Dosage: UNK UNK, UNK
     Route: 065
  498. METHOTREXATE SODIUM [Suspect]
     Active Substance: METHOTREXATE SODIUM
     Dosage: UNK UNK, UNK
     Route: 065
  499. METHOTREXATE SODIUM [Suspect]
     Active Substance: METHOTREXATE SODIUM
     Dosage: UNKNOWN (ADALIMUMAB SOLUTION FOR INJECTION, SINGLE DOSE PEN)
     Route: 050
  500. METHOTREXATE SODIUM [Suspect]
     Active Substance: METHOTREXATE SODIUM
     Dosage: UNKNOWN (ADALIMUMAB SOLUTION FOR INJECTION, SINGLE DOSE PEN)
     Route: 050
  501. METHOTREXATE SODIUM [Suspect]
     Active Substance: METHOTREXATE SODIUM
     Dosage: UNKNOWN (ADALIMUMAB SOLUTION FOR INJECTION, SINGLE DOSE PEN)
     Route: 050
  502. METHOTREXATE SODIUM [Suspect]
     Active Substance: METHOTREXATE SODIUM
     Dosage: UNKNOWN (ADALIMUMAB SOLUTION FOR INJECTION, SINGLE DOSE PEN)
     Route: 050
  503. METHOTREXATE SODIUM [Suspect]
     Active Substance: METHOTREXATE SODIUM
     Indication: Product used for unknown indication
     Dosage: UNK
     Route: 050
  504. METHOTREXATE SODIUM [Suspect]
     Active Substance: METHOTREXATE SODIUM
     Dosage: UNK
     Route: 050
  505. METHOTREXATE SODIUM [Suspect]
     Active Substance: METHOTREXATE SODIUM
     Dosage: UNK
     Route: 050
  506. METHOTREXATE SODIUM [Suspect]
     Active Substance: METHOTREXATE SODIUM
     Dosage: UNK, UNK, UNK
     Route: 050
  507. METHOTREXATE SODIUM [Suspect]
     Active Substance: METHOTREXATE SODIUM
     Dosage: UNK
     Route: 050
  508. METHOTREXATE SODIUM [Suspect]
     Active Substance: METHOTREXATE SODIUM
     Dosage: UNK
     Route: 050
  509. METHOTREXATE SODIUM [Suspect]
     Active Substance: METHOTREXATE SODIUM
     Dosage: UNK
     Route: 050
  510. METHOTREXATE SODIUM [Suspect]
     Active Substance: METHOTREXATE SODIUM
     Dosage: UNK
     Route: 050
  511. METHOTREXATE SODIUM [Suspect]
     Active Substance: METHOTREXATE SODIUM
     Dosage: UNK
     Route: 050
  512. METHOTREXATE SODIUM [Suspect]
     Active Substance: METHOTREXATE SODIUM
     Dosage: UNK
     Route: 050
  513. METHOTREXATE SODIUM [Suspect]
     Active Substance: METHOTREXATE SODIUM
     Dosage: UNK
     Route: 050
  514. METHOTREXATE SODIUM [Suspect]
     Active Substance: METHOTREXATE SODIUM
     Dosage: UNK
     Route: 050
  515. METHOTREXATE SODIUM [Suspect]
     Active Substance: METHOTREXATE SODIUM
     Dosage: UNK
     Route: 050
  516. METHOTREXATE SODIUM [Suspect]
     Active Substance: METHOTREXATE SODIUM
     Dosage: UNK
     Route: 050
  517. METHOTREXATE SODIUM [Suspect]
     Active Substance: METHOTREXATE SODIUM
     Dosage: UNK
     Route: 050
  518. METHOTREXATE SODIUM [Suspect]
     Active Substance: METHOTREXATE SODIUM
     Dosage: UNK
     Route: 050
  519. METHOTREXATE SODIUM [Suspect]
     Active Substance: METHOTREXATE SODIUM
     Dosage: UNK
     Route: 050
  520. METHOTREXATE SODIUM [Suspect]
     Active Substance: METHOTREXATE SODIUM
     Dosage: UNK UNK, UNK PHARMACEUTICAL DOSE FORM (FREE TEXT): 98
     Route: 050
  521. METHOTREXATE SODIUM [Suspect]
     Active Substance: METHOTREXATE SODIUM
     Dosage: UNK
     Route: 050
  522. METHOTREXATE SODIUM [Suspect]
     Active Substance: METHOTREXATE SODIUM
     Dosage: UNK
     Route: 050
  523. METHOTREXATE SODIUM [Suspect]
     Active Substance: METHOTREXATE SODIUM
     Dosage: UNK
     Route: 065
  524. METHOTREXATE SODIUM [Suspect]
     Active Substance: METHOTREXATE SODIUM
     Dosage: UNK
     Route: 050
  525. METHOTREXATE SODIUM [Suspect]
     Active Substance: METHOTREXATE SODIUM
     Dosage: UNK
     Route: 050
  526. METHOTREXATE SODIUM [Suspect]
     Active Substance: METHOTREXATE SODIUM
     Dosage: UNK
     Route: 065
  527. METHOTREXATE SODIUM [Suspect]
     Active Substance: METHOTREXATE SODIUM
     Dosage: UNK; ADDITIONAL INFORMATION ON DRUG (FREE TEXT): ADALIMUMAB SOLUTION FOR INJECTION, SINGLE DOSE PEN
     Route: 050
     Dates: start: 20211112
  528. METHOTREXATE SODIUM [Suspect]
     Active Substance: METHOTREXATE SODIUM
     Dosage: UNK; ADDITIONAL INFORMATION ON DRUG (FREE TEXT): ADALIMUMAB SOLUTION FOR INJECTION, SINGLE DOSE PEN
     Route: 050
  529. METHOTREXATE SODIUM [Suspect]
     Active Substance: METHOTREXATE SODIUM
     Dosage: UNK; ADDITIONAL INFORMATION ON DRUG (FREE TEXT): ADALIMUMAB SOLUTION FOR INJECTION, SINGLE DOSE PEN
     Route: 050
     Dates: start: 20211211
  530. METHOTREXATE SODIUM [Suspect]
     Active Substance: METHOTREXATE SODIUM
     Dosage: UNK UNK, UNK
     Route: 050
     Dates: start: 20211112
  531. METHOTREXATE SODIUM [Suspect]
     Active Substance: METHOTREXATE SODIUM
     Indication: Product used for unknown indication
     Dosage: UNK UNK, UNK
     Route: 065
  532. METHOTREXATE SODIUM [Suspect]
     Active Substance: METHOTREXATE SODIUM
     Dosage: UNK UNK, UNK
     Route: 065
  533. METHOTREXATE SODIUM [Suspect]
     Active Substance: METHOTREXATE SODIUM
     Dosage: UNK UNK, UNK
     Route: 065
  534. METHOTREXATE SODIUM [Suspect]
     Active Substance: METHOTREXATE SODIUM
     Dosage: UNK UNK, UNK
     Route: 065
  535. METHOTREXATE SODIUM [Suspect]
     Active Substance: METHOTREXATE SODIUM
     Dosage: UNK UNK, UNK
     Route: 065
  536. METHOTREXATE SODIUM [Suspect]
     Active Substance: METHOTREXATE SODIUM
     Dosage: UNK UNK, UNK
     Route: 065
  537. METHOTREXATE SODIUM [Suspect]
     Active Substance: METHOTREXATE SODIUM
     Dosage: UNKNOWN; ;
     Route: 050
     Dates: start: 20211211
  538. METHOTREXATE SODIUM [Suspect]
     Active Substance: METHOTREXATE SODIUM
     Dosage: UNKNOWN; ;
     Route: 050
  539. METHOTREXATE SODIUM [Suspect]
     Active Substance: METHOTREXATE SODIUM
     Dosage: UNKNOWN; ;
     Route: 050
  540. METHOTREXATE SODIUM [Suspect]
     Active Substance: METHOTREXATE SODIUM
     Dosage: UNKNOWN; ;
     Route: 050
  541. METHOTREXATE SODIUM [Suspect]
     Active Substance: METHOTREXATE SODIUM
     Dosage: UNKNOWN; ;
     Route: 050
  542. METHOTREXATE SODIUM [Suspect]
     Active Substance: METHOTREXATE SODIUM
     Dosage: UNKNOWN; ;
     Route: 050
  543. METHOTREXATE SODIUM [Suspect]
     Active Substance: METHOTREXATE SODIUM
     Dosage: UNKNOWN; ;
     Route: 050
  544. METHOTREXATE SODIUM [Suspect]
     Active Substance: METHOTREXATE SODIUM
     Dosage: UNKNOWN; ;
     Route: 050
  545. METHOTREXATE SODIUM [Suspect]
     Active Substance: METHOTREXATE SODIUM
     Dosage: UNKNOWN; ;
     Route: 050
  546. METHOTREXATE SODIUM [Suspect]
     Active Substance: METHOTREXATE SODIUM
     Dosage: UNKNOWN; ;
     Route: 050
  547. METHOTREXATE SODIUM [Suspect]
     Active Substance: METHOTREXATE SODIUM
     Dosage: UNKNOWN; ;
     Route: 050
  548. METHOTREXATE SODIUM [Suspect]
     Active Substance: METHOTREXATE SODIUM
     Dosage: UNKNOWN; ;
     Route: 050
  549. METHOTREXATE SODIUM [Suspect]
     Active Substance: METHOTREXATE SODIUM
     Dosage: UNKNOWN; ;
     Route: 050
  550. METHOTREXATE SODIUM [Suspect]
     Active Substance: METHOTREXATE SODIUM
     Dosage: UNKNOWN; ;
     Route: 050
  551. METHOTREXATE SODIUM [Suspect]
     Active Substance: METHOTREXATE SODIUM
     Dosage: UNKNOWN; ;
     Route: 050
  552. METHOTREXATE SODIUM [Suspect]
     Active Substance: METHOTREXATE SODIUM
     Dosage: UNK, UNK
     Route: 050
  553. METHOTREXATE SODIUM [Suspect]
     Active Substance: METHOTREXATE SODIUM
     Dosage: UNK
     Route: 050
  554. METHOTREXATE SODIUM [Suspect]
     Active Substance: METHOTREXATE SODIUM
     Dosage: UNK
     Route: 050
  555. METHOTREXATE SODIUM [Suspect]
     Active Substance: METHOTREXATE SODIUM
     Dosage: UNK, UNK
     Route: 050
  556. METHOTREXATE SODIUM [Suspect]
     Active Substance: METHOTREXATE SODIUM
     Dosage: UNK
     Route: 050
  557. METHOTREXATE SODIUM [Suspect]
     Active Substance: METHOTREXATE SODIUM
     Dosage: UNK, UNK
     Route: 050
  558. METHOTREXATE SODIUM [Suspect]
     Active Substance: METHOTREXATE SODIUM
     Dosage: UNK, UNK
     Route: 050
  559. METHOTREXATE SODIUM [Suspect]
     Active Substance: METHOTREXATE SODIUM
     Dosage: UNK
     Route: 050
  560. METHOTREXATE SODIUM [Suspect]
     Active Substance: METHOTREXATE SODIUM
     Dosage: UNK, UNK
     Route: 050
  561. METHOTREXATE SODIUM [Suspect]
     Active Substance: METHOTREXATE SODIUM
     Dosage: UNK
     Route: 050
  562. METHOTREXATE SODIUM [Suspect]
     Active Substance: METHOTREXATE SODIUM
     Dosage: UNK
     Route: 050
  563. METHOTREXATE SODIUM [Suspect]
     Active Substance: METHOTREXATE SODIUM
     Dosage: UNK
     Route: 050
  564. METHOTREXATE SODIUM [Suspect]
     Active Substance: METHOTREXATE SODIUM
     Dosage: UNK, UNK
     Route: 050
  565. METHOTREXATE SODIUM [Suspect]
     Active Substance: METHOTREXATE SODIUM
     Dosage: UNK
     Route: 065
  566. METHOTREXATE SODIUM [Suspect]
     Active Substance: METHOTREXATE SODIUM
     Dosage: UNK
     Route: 050
     Dates: start: 20211211
  567. METHOTREXATE SODIUM [Suspect]
     Active Substance: METHOTREXATE SODIUM
     Dosage: UNKNOWN
     Route: 050
     Dates: start: 20211112
  568. METHOTREXATE SODIUM [Suspect]
     Active Substance: METHOTREXATE SODIUM
     Dosage: UNK
     Route: 065
  569. METHOTREXATE SODIUM [Suspect]
     Active Substance: METHOTREXATE SODIUM
     Dosage: UNK
     Route: 065
  570. METHOTREXATE SODIUM [Suspect]
     Active Substance: METHOTREXATE SODIUM
     Dosage: UNK
     Route: 065
  571. METHOTREXATE SODIUM [Suspect]
     Active Substance: METHOTREXATE SODIUM
     Dosage: UNK
     Route: 065
  572. METHOTREXATE SODIUM [Suspect]
     Active Substance: METHOTREXATE SODIUM
     Dosage: UNK
     Route: 065
  573. METHOTREXATE SODIUM [Suspect]
     Active Substance: METHOTREXATE SODIUM
     Dosage: UNK
     Route: 065
  574. METHOTREXATE SODIUM [Suspect]
     Active Substance: METHOTREXATE SODIUM
     Dosage: UNK
     Route: 065
  575. METHOTREXATE SODIUM [Suspect]
     Active Substance: METHOTREXATE SODIUM
     Dosage: UNK
     Route: 065
  576. METHOTREXATE SODIUM [Suspect]
     Active Substance: METHOTREXATE SODIUM
     Dosage: UNK
     Route: 065
  577. METHOTREXATE SODIUM [Suspect]
     Active Substance: METHOTREXATE SODIUM
     Dosage: UNK
     Route: 065
  578. METHOTREXATE SODIUM [Suspect]
     Active Substance: METHOTREXATE SODIUM
     Dosage: UNK
     Route: 065
  579. METHOTREXATE SODIUM [Suspect]
     Active Substance: METHOTREXATE SODIUM
     Dosage: UNK
     Route: 065
  580. METHOTREXATE SODIUM [Suspect]
     Active Substance: METHOTREXATE SODIUM
     Dosage: UNK
     Route: 065
  581. METHOTREXATE SODIUM [Suspect]
     Active Substance: METHOTREXATE SODIUM
     Indication: Product used for unknown indication
     Dosage: UNK
     Route: 065
  582. METHOTREXATE SODIUM [Suspect]
     Active Substance: METHOTREXATE SODIUM
     Dosage: UNK
     Route: 065
  583. METHOTREXATE SODIUM [Suspect]
     Active Substance: METHOTREXATE SODIUM
     Dosage: UNK
     Route: 065
  584. METHOTREXATE SODIUM [Suspect]
     Active Substance: METHOTREXATE SODIUM
     Dosage: UNK
     Route: 065
  585. METHOTREXATE SODIUM [Suspect]
     Active Substance: METHOTREXATE SODIUM
     Dosage: UNK
     Route: 065
  586. METHOTREXATE SODIUM [Suspect]
     Active Substance: METHOTREXATE SODIUM
     Dosage: UNK
     Route: 065
  587. METHOTREXATE SODIUM [Suspect]
     Active Substance: METHOTREXATE SODIUM
     Dosage: UNK
     Route: 065
  588. METHOTREXATE SODIUM [Suspect]
     Active Substance: METHOTREXATE SODIUM
     Dosage: UNK
     Route: 065
  589. METHOTREXATE SODIUM [Suspect]
     Active Substance: METHOTREXATE SODIUM
     Dosage: UNK
     Route: 065
  590. METHOTREXATE SODIUM [Suspect]
     Active Substance: METHOTREXATE SODIUM
     Dosage: UNK
     Route: 065
  591. METHOTREXATE SODIUM [Suspect]
     Active Substance: METHOTREXATE SODIUM
     Dosage: UNK
     Route: 065
  592. METHOTREXATE SODIUM [Suspect]
     Active Substance: METHOTREXATE SODIUM
     Dosage: UNK
     Route: 065
  593. METHOTREXATE SODIUM [Suspect]
     Active Substance: METHOTREXATE SODIUM
     Route: 065
  594. METHOTREXATE SODIUM [Suspect]
     Active Substance: METHOTREXATE SODIUM
     Route: 050
  595. METHOTREXATE SODIUM [Suspect]
     Active Substance: METHOTREXATE SODIUM
     Route: 050
  596. METHOTREXATE SODIUM [Suspect]
     Active Substance: METHOTREXATE SODIUM
     Route: 050
  597. METHOTREXATE SODIUM [Suspect]
     Active Substance: METHOTREXATE SODIUM
     Route: 050
  598. METHOTREXATE SODIUM [Suspect]
     Active Substance: METHOTREXATE SODIUM
     Route: 050
  599. METHOTREXATE SODIUM [Suspect]
     Active Substance: METHOTREXATE SODIUM
     Dosage: UNK
     Route: 050
  600. METHOTREXATE SODIUM [Suspect]
     Active Substance: METHOTREXATE SODIUM
     Dosage: UNKNOWN (ADALIMUMAB SOLUTION FOR INJECTION, SINGLE DOSE PEN)
     Route: 050
  601. METHOTREXATE SODIUM [Suspect]
     Active Substance: METHOTREXATE SODIUM
     Dosage: UNKNOWN (ADALIMUMAB SOLUTION FOR INJECTION, SINGLE DOSE PEN)
     Route: 050
  602. METHOTREXATE SODIUM [Suspect]
     Active Substance: METHOTREXATE SODIUM
     Dosage: UNK
     Route: 050
     Dates: start: 20211112
  603. REMICADE [Suspect]
     Active Substance: INFLIXIMAB
     Indication: Crohn^s disease
     Dosage: UNK (ADALIMUMAB SOLUTION FOR INJECTION, SINGLE DOSE PEN)
     Route: 050
  604. REMICADE [Suspect]
     Active Substance: INFLIXIMAB
     Dosage: UNK
     Route: 050
  605. REMICADE [Suspect]
     Active Substance: INFLIXIMAB
     Dosage: UNK; ; ADDITIONAL INFO: ROUTE:OTHER ROUTE:OTHER
  606. REMICADE [Suspect]
     Active Substance: INFLIXIMAB
     Dosage: UNK; ;ADDITIONAL INFO: ROUTE:OTHER ROUTE:OTHER
  607. REMICADE [Suspect]
     Active Substance: INFLIXIMAB
     Dosage: UNKNOWN; OTHER
     Route: 050
  608. REMICADE [Suspect]
     Active Substance: INFLIXIMAB
     Dosage: UNKNOWN; OTHER
     Route: 050
  609. REMICADE [Suspect]
     Active Substance: INFLIXIMAB
     Dosage: UNKNOWN
     Route: 050
  610. REMICADE [Suspect]
     Active Substance: INFLIXIMAB
     Dosage: UNK; ; ADDITIONAL INFO: ROUTE:OTHER
     Route: 050
  611. REMICADE [Suspect]
     Active Substance: INFLIXIMAB
     Dosage: UNKNOWN
     Route: 050
  612. REMICADE [Suspect]
     Active Substance: INFLIXIMAB
     Dosage: UNK
     Route: 050
  613. REMICADE [Suspect]
     Active Substance: INFLIXIMAB
     Dosage: PHARMACEUTICAL DOSE FORM (FREE TEXT): 230
     Route: 050
  614. REMICADE [Suspect]
     Active Substance: INFLIXIMAB
     Dosage: UNKNOWN; PHARMACEUTICAL DOSE FORM (FREE TEXT): 230
     Route: 050
  615. REMICADE [Suspect]
     Active Substance: INFLIXIMAB
     Dosage: UNK
     Route: 042
  616. REMICADE [Suspect]
     Active Substance: INFLIXIMAB
     Dosage: UNK
     Route: 042
  617. REMICADE [Suspect]
     Active Substance: INFLIXIMAB
     Dosage: UNK
     Route: 042
  618. REMICADE [Suspect]
     Active Substance: INFLIXIMAB
     Dosage: UNK
     Route: 042
  619. REMICADE [Suspect]
     Active Substance: INFLIXIMAB
     Dosage: UNK
     Route: 050
  620. REMICADE [Suspect]
     Active Substance: INFLIXIMAB
     Dosage: UNKNOWN
     Route: 050
  621. REMICADE [Suspect]
     Active Substance: INFLIXIMAB
     Dosage: UNK
     Route: 050
  622. REMICADE [Suspect]
     Active Substance: INFLIXIMAB
     Dosage: UNKNOWN
     Route: 050
  623. REMICADE [Suspect]
     Active Substance: INFLIXIMAB
     Dosage: UNK
     Route: 050
  624. REMICADE [Suspect]
     Active Substance: INFLIXIMAB
     Dosage: UNK
     Route: 042
  625. REMICADE [Suspect]
     Active Substance: INFLIXIMAB
     Dosage: UNK
     Route: 050
  626. REMICADE [Suspect]
     Active Substance: INFLIXIMAB
     Dosage: UNK
     Route: 050
  627. REMICADE [Suspect]
     Active Substance: INFLIXIMAB
     Dosage: UNK
     Route: 065
  628. REMICADE [Suspect]
     Active Substance: INFLIXIMAB
     Dosage: UNK
     Route: 042
  629. REMICADE [Suspect]
     Active Substance: INFLIXIMAB
     Dosage: UNK
     Route: 042
  630. REMICADE [Suspect]
     Active Substance: INFLIXIMAB
     Dosage: UNK
     Route: 042
  631. REMICADE [Suspect]
     Active Substance: INFLIXIMAB
     Dosage: UNK
     Route: 042
  632. REMICADE [Suspect]
     Active Substance: INFLIXIMAB
     Dosage: UNK
     Route: 042
  633. REMICADE [Suspect]
     Active Substance: INFLIXIMAB
     Dosage: UNK
     Route: 042
  634. REMICADE [Suspect]
     Active Substance: INFLIXIMAB
     Dosage: UNK
     Route: 042
  635. REMICADE [Suspect]
     Active Substance: INFLIXIMAB
     Dosage: UNKNOWN
     Route: 042
  636. REMICADE [Suspect]
     Active Substance: INFLIXIMAB
     Dosage: UNKNOWN
     Route: 042
  637. REMICADE [Suspect]
     Active Substance: INFLIXIMAB
     Dosage: UNK; ;
     Route: 050
  638. REMICADE [Suspect]
     Active Substance: INFLIXIMAB
     Dosage: UNK
     Route: 042
  639. REMICADE [Suspect]
     Active Substance: INFLIXIMAB
     Dosage: UNK
     Route: 042
  640. REMICADE [Suspect]
     Active Substance: INFLIXIMAB
     Dosage: UNK
     Route: 042
  641. REMICADE [Suspect]
     Active Substance: INFLIXIMAB
     Dosage: UNK
     Route: 042
  642. REMICADE [Suspect]
     Active Substance: INFLIXIMAB
     Dosage: UNK
     Route: 042
  643. REMICADE [Suspect]
     Active Substance: INFLIXIMAB
     Dosage: UNK
     Route: 042
  644. REMICADE [Suspect]
     Active Substance: INFLIXIMAB
     Dosage: UNK
     Route: 042
  645. REMICADE [Suspect]
     Active Substance: INFLIXIMAB
     Dosage: UNK
     Route: 042
  646. REMICADE [Suspect]
     Active Substance: INFLIXIMAB
     Dosage: UNK
     Route: 042
  647. REMICADE [Suspect]
     Active Substance: INFLIXIMAB
     Dosage: UNK
     Route: 042
  648. REMICADE [Suspect]
     Active Substance: INFLIXIMAB
     Dosage: UNK
     Route: 042
  649. REMICADE [Suspect]
     Active Substance: INFLIXIMAB
     Dosage: UNK
     Route: 042
  650. REMICADE [Suspect]
     Active Substance: INFLIXIMAB
     Dosage: UNK
     Route: 042
  651. REMICADE [Suspect]
     Active Substance: INFLIXIMAB
     Dosage: UNK
     Route: 042
  652. REMICADE [Suspect]
     Active Substance: INFLIXIMAB
     Dosage: UNK
     Route: 042
  653. REMICADE [Suspect]
     Active Substance: INFLIXIMAB
     Indication: Crohn^s disease
     Dosage: UNK
     Route: 065
  654. REMICADE [Suspect]
     Active Substance: INFLIXIMAB
     Dosage: UNKNOWN
     Route: 042
  655. REMICADE [Suspect]
     Active Substance: INFLIXIMAB
     Dosage: UNK (ADALIMUMAB SOLUTION FOR INJECTION, SINGLE DOSE PEN)
     Route: 050
  656. REMICADE [Suspect]
     Active Substance: INFLIXIMAB
     Dosage: UNK
     Route: 042
  657. REMICADE [Suspect]
     Active Substance: INFLIXIMAB
     Dosage: UNK
     Route: 042
  658. REMICADE [Suspect]
     Active Substance: INFLIXIMAB
     Dosage: UNKNOWN
     Route: 042
  659. REMICADE [Suspect]
     Active Substance: INFLIXIMAB
     Dosage: UNK (ADALIMUMAB SOLUTION FOR INJECTION, SINGLE DOSE PEN)
     Route: 065
  660. REMICADE [Suspect]
     Active Substance: INFLIXIMAB
     Dosage: UNK
     Route: 042
  661. REMICADE [Suspect]
     Active Substance: INFLIXIMAB
     Dosage: UNK
     Route: 050
  662. REMICADE [Suspect]
     Active Substance: INFLIXIMAB
     Dosage: UNK
     Route: 050
  663. REMICADE [Suspect]
     Active Substance: INFLIXIMAB
     Dosage: UNK, OTHER (ADALIMUMAB SOLUTION FOR INJECTION, SINGLE DOSE PEN)
     Route: 065
  664. REMICADE [Suspect]
     Active Substance: INFLIXIMAB
     Dosage: UNK, OTHER
     Route: 065
  665. REMICADE [Suspect]
     Active Substance: INFLIXIMAB
     Dosage: UNK, OTHER
     Route: 042
  666. REMICADE [Suspect]
     Active Substance: INFLIXIMAB
     Dosage: UNK, OTHER
     Route: 042
  667. REMICADE [Suspect]
     Active Substance: INFLIXIMAB
     Dosage: UNK
     Route: 042
  668. REMICADE [Suspect]
     Active Substance: INFLIXIMAB
     Dosage: UNK, OTHER
  669. REMICADE [Suspect]
     Active Substance: INFLIXIMAB
     Dosage: UNKNOWN; ;
     Route: 050
  670. REMICADE [Suspect]
     Active Substance: INFLIXIMAB
     Dosage: UNKNOWN; ;
     Route: 050
  671. REMICADE [Suspect]
     Active Substance: INFLIXIMAB
     Dosage: UNKNOWN; ;
     Route: 050
  672. REMICADE [Suspect]
     Active Substance: INFLIXIMAB
     Dosage: UNKNOWN; ;
     Route: 050
  673. REMICADE [Suspect]
     Active Substance: INFLIXIMAB
     Dosage: UNKNOWN; ;
     Route: 050
  674. REMICADE [Suspect]
     Active Substance: INFLIXIMAB
     Dosage: UNKNOWN; ;
     Route: 050
  675. REMICADE [Suspect]
     Active Substance: INFLIXIMAB
     Dosage: UNKNOWN; ;
     Route: 050
  676. REMICADE [Suspect]
     Active Substance: INFLIXIMAB
     Dosage: UNK; ;
     Route: 050
  677. REMICADE [Suspect]
     Active Substance: INFLIXIMAB
     Dosage: UNK; ;
     Route: 050
  678. REMICADE [Suspect]
     Active Substance: INFLIXIMAB
     Dosage: UNK; ;
     Route: 050
  679. REMICADE [Suspect]
     Active Substance: INFLIXIMAB
     Dosage: UNK; ;
     Route: 050
  680. REMICADE [Suspect]
     Active Substance: INFLIXIMAB
     Dosage: UNK
     Route: 065
  681. REMICADE [Suspect]
     Active Substance: INFLIXIMAB
     Dosage: UNK
  682. REMICADE [Suspect]
     Active Substance: INFLIXIMAB
     Dosage: UNK, OTHER
     Route: 042
  683. REMICADE [Suspect]
     Active Substance: INFLIXIMAB
     Dosage: UNK
     Route: 065
  684. REMICADE [Suspect]
     Active Substance: INFLIXIMAB
     Dosage: UNK
     Route: 065
  685. REMICADE [Suspect]
     Active Substance: INFLIXIMAB
     Dosage: UNK, OTHER
     Route: 042
  686. REMICADE [Suspect]
     Active Substance: INFLIXIMAB
     Dosage: UNK, OTHER
     Route: 042
  687. REMICADE [Suspect]
     Active Substance: INFLIXIMAB
     Dosage: UNK
     Route: 065
  688. REMICADE [Suspect]
     Active Substance: INFLIXIMAB
     Dosage: UNK, OTHER
     Route: 042
  689. REMICADE [Suspect]
     Active Substance: INFLIXIMAB
     Dosage: UNK, OTHER
     Route: 042
  690. REMICADE [Suspect]
     Active Substance: INFLIXIMAB
     Dosage: UNK, OTHER
     Route: 042
  691. REMICADE [Suspect]
     Active Substance: INFLIXIMAB
     Dosage: UNK, OTHER
     Route: 042
  692. REMICADE [Suspect]
     Active Substance: INFLIXIMAB
     Dosage: UNK, OTHER
     Route: 042
  693. REMICADE [Suspect]
     Active Substance: INFLIXIMAB
     Dosage: UNK, OTHER
     Route: 042
  694. REMICADE [Suspect]
     Active Substance: INFLIXIMAB
     Dosage: UNK
     Route: 065
  695. REMICADE [Suspect]
     Active Substance: INFLIXIMAB
     Indication: Crohn^s disease
     Dosage: UNK, ADALIMUMAB SOLUTION FOR INJECTION, SINGLE DOSE PEN
     Route: 042
  696. REMICADE [Suspect]
     Active Substance: INFLIXIMAB
     Dosage: UNK
     Route: 042
  697. REMICADE [Suspect]
     Active Substance: INFLIXIMAB
     Dosage: UNK
     Route: 042
  698. REMICADE [Suspect]
     Active Substance: INFLIXIMAB
     Dosage: UNK
     Route: 042
  699. REMICADE [Suspect]
     Active Substance: INFLIXIMAB
     Dosage: UNK
     Route: 065
  700. REMICADE [Suspect]
     Active Substance: INFLIXIMAB
     Dosage: UNK
     Route: 065
  701. REMICADE [Suspect]
     Active Substance: INFLIXIMAB
     Dosage: UNK
     Route: 042
  702. REMICADE [Suspect]
     Active Substance: INFLIXIMAB
     Dosage: UNK, ADALIMUMAB SOLUTION FOR INJECTION, SINGLE DOSE PEN
     Route: 050
  703. REMICADE [Suspect]
     Active Substance: INFLIXIMAB
     Dosage: UNK
     Route: 042
  704. REMICADE [Suspect]
     Active Substance: INFLIXIMAB
     Dosage: UNK
     Route: 042
  705. REMICADE [Suspect]
     Active Substance: INFLIXIMAB
     Dosage: UNK
     Route: 042
  706. REMICADE [Suspect]
     Active Substance: INFLIXIMAB
     Dosage: UNK, ADALIMUMAB SOLUTION FOR INJECTION, SINGLE DOSE PEN
     Route: 050
  707. REMICADE [Suspect]
     Active Substance: INFLIXIMAB
     Dosage: UNK
     Route: 042
  708. REMICADE [Suspect]
     Active Substance: INFLIXIMAB
     Dosage: UNK
     Route: 042
  709. REMICADE [Suspect]
     Active Substance: INFLIXIMAB
     Dosage: UNK
     Route: 050
  710. REMICADE [Suspect]
     Active Substance: INFLIXIMAB
     Dosage: UNK
     Route: 042
  711. REMICADE [Suspect]
     Active Substance: INFLIXIMAB
     Dosage: UNK
  712. REMICADE [Suspect]
     Active Substance: INFLIXIMAB
     Dosage: UNK
  713. REMICADE [Suspect]
     Active Substance: INFLIXIMAB
     Dosage: UNK
     Route: 050
  714. REMICADE [Suspect]
     Active Substance: INFLIXIMAB
     Dosage: UNKNOWN
     Route: 042
  715. REMICADE [Suspect]
     Active Substance: INFLIXIMAB
     Dosage: UNKNOWN
     Route: 042
  716. REMICADE [Suspect]
     Active Substance: INFLIXIMAB
     Dosage: UNK
     Route: 050
  717. REMICADE [Suspect]
     Active Substance: INFLIXIMAB
     Dosage: UNK
     Route: 050
  718. REMICADE [Suspect]
     Active Substance: INFLIXIMAB
     Dosage: UNK
     Route: 050
  719. REMICADE [Suspect]
     Active Substance: INFLIXIMAB
     Dosage: UNK
     Route: 050
  720. REMICADE [Suspect]
     Active Substance: INFLIXIMAB
     Dosage: UNK
     Route: 042
  721. REMICADE [Suspect]
     Active Substance: INFLIXIMAB
     Dosage: UNK
     Route: 042
  722. REMICADE [Suspect]
     Active Substance: INFLIXIMAB
     Dosage: UNK
     Route: 050
  723. REMICADE [Suspect]
     Active Substance: INFLIXIMAB
     Dosage: UNK
     Route: 050
  724. REMICADE [Suspect]
     Active Substance: INFLIXIMAB
     Dosage: UNK
     Route: 050
  725. REMICADE [Suspect]
     Active Substance: INFLIXIMAB
     Dosage: UNK
     Route: 050
  726. REMICADE [Suspect]
     Active Substance: INFLIXIMAB
     Dosage: UNK
     Route: 065
  727. REMICADE [Suspect]
     Active Substance: INFLIXIMAB
     Dosage: UNK
     Route: 065
  728. REMICADE [Suspect]
     Active Substance: INFLIXIMAB
     Dosage: UNK
     Route: 050
  729. REMICADE [Suspect]
     Active Substance: INFLIXIMAB
     Dosage: UNK
     Route: 050
  730. REMICADE [Suspect]
     Active Substance: INFLIXIMAB
     Dosage: UNK
     Route: 050
  731. REMICADE [Suspect]
     Active Substance: INFLIXIMAB
     Dosage: UNK
     Route: 050
  732. REMICADE [Suspect]
     Active Substance: INFLIXIMAB
     Dosage: UNK
     Route: 050
  733. REMICADE [Suspect]
     Active Substance: INFLIXIMAB
     Dosage: UNK
     Route: 050
  734. REMICADE [Suspect]
     Active Substance: INFLIXIMAB
     Dosage: UNK
     Route: 050
  735. REMICADE [Suspect]
     Active Substance: INFLIXIMAB
     Dosage: UNK
     Route: 050
  736. REMICADE [Suspect]
     Active Substance: INFLIXIMAB
     Indication: Crohn^s disease
     Dosage: UNK
     Route: 042
  737. REMICADE [Suspect]
     Active Substance: INFLIXIMAB
     Dosage: UNK
     Route: 042
  738. REMICADE [Suspect]
     Active Substance: INFLIXIMAB
     Dosage: UNK
     Route: 042
  739. REMICADE [Suspect]
     Active Substance: INFLIXIMAB
     Dosage: UNK
     Route: 050
  740. REMICADE [Suspect]
     Active Substance: INFLIXIMAB
     Dosage: UNK
     Route: 050
  741. REMICADE [Suspect]
     Active Substance: INFLIXIMAB
     Dosage: UNK
     Route: 050
  742. REMICADE [Suspect]
     Active Substance: INFLIXIMAB
     Dosage: UNK
     Route: 050
  743. REMICADE [Suspect]
     Active Substance: INFLIXIMAB
     Dosage: UNK
     Route: 050
  744. REMICADE [Suspect]
     Active Substance: INFLIXIMAB
     Dosage: UNK
     Route: 050
  745. REMICADE [Suspect]
     Active Substance: INFLIXIMAB
     Dosage: UNK
     Route: 050
  746. REMICADE [Suspect]
     Active Substance: INFLIXIMAB
     Dosage: UNK
     Route: 050
  747. REMICADE [Suspect]
     Active Substance: INFLIXIMAB
     Dosage: UNK
     Route: 050
  748. REMICADE [Suspect]
     Active Substance: INFLIXIMAB
     Dosage: UNK
     Route: 050
  749. REMICADE [Suspect]
     Active Substance: INFLIXIMAB
     Dosage: UNK
     Route: 050
  750. REMICADE [Suspect]
     Active Substance: INFLIXIMAB
     Dosage: UNK
     Route: 050
  751. REMICADE [Suspect]
     Active Substance: INFLIXIMAB
     Dosage: UNK
     Route: 050
  752. REMICADE [Suspect]
     Active Substance: INFLIXIMAB
     Dosage: UNK
     Route: 050
  753. REMICADE [Suspect]
     Active Substance: INFLIXIMAB
     Dosage: UNK
     Route: 050
  754. REMICADE [Suspect]
     Active Substance: INFLIXIMAB
     Dosage: UNK
     Route: 050
  755. REMICADE [Suspect]
     Active Substance: INFLIXIMAB
     Dosage: UNK
     Route: 050
  756. REMICADE [Suspect]
     Active Substance: INFLIXIMAB
     Dosage: UNK
     Route: 050
  757. REMICADE [Suspect]
     Active Substance: INFLIXIMAB
     Dosage: UNK
     Route: 050
  758. REMICADE [Suspect]
     Active Substance: INFLIXIMAB
     Dosage: UNK
     Route: 050
  759. REMICADE [Suspect]
     Active Substance: INFLIXIMAB
     Dosage: UNK
     Route: 050
  760. REMICADE [Suspect]
     Active Substance: INFLIXIMAB
     Dosage: UNK
     Route: 050
  761. REMICADE [Suspect]
     Active Substance: INFLIXIMAB
     Dosage: UNK
     Route: 050
  762. REMICADE [Suspect]
     Active Substance: INFLIXIMAB
     Dosage: UNK
     Route: 065
  763. REMICADE [Suspect]
     Active Substance: INFLIXIMAB
     Dosage: UNK
     Route: 065
  764. REMICADE [Suspect]
     Active Substance: INFLIXIMAB
     Dosage: UNK
     Route: 065
  765. REMICADE [Suspect]
     Active Substance: INFLIXIMAB
     Dosage: UNK
     Route: 065
  766. REMICADE [Suspect]
     Active Substance: INFLIXIMAB
     Dosage: UNK
     Route: 065
  767. REMICADE [Suspect]
     Active Substance: INFLIXIMAB
     Dosage: UNK
     Route: 065
  768. REMICADE [Suspect]
     Active Substance: INFLIXIMAB
     Dosage: UNK
     Route: 065
  769. REMICADE [Suspect]
     Active Substance: INFLIXIMAB
     Dosage: UNK
     Route: 065
  770. REMICADE [Suspect]
     Active Substance: INFLIXIMAB
     Dosage: UNK
     Route: 065
  771. REMICADE [Suspect]
     Active Substance: INFLIXIMAB
     Dosage: UNK
     Route: 065
  772. REMICADE [Suspect]
     Active Substance: INFLIXIMAB
     Dosage: UNK
     Route: 065
  773. REMICADE [Suspect]
     Active Substance: INFLIXIMAB
     Dosage: UNK
     Route: 065
  774. REMICADE [Suspect]
     Active Substance: INFLIXIMAB
     Dosage: UNK
     Route: 065
  775. REMICADE [Suspect]
     Active Substance: INFLIXIMAB
     Dosage: UNK
     Route: 065
  776. REMICADE [Suspect]
     Active Substance: INFLIXIMAB
     Dosage: UNK
     Route: 065
  777. REMICADE [Suspect]
     Active Substance: INFLIXIMAB
     Dosage: UNK
     Route: 065
  778. REMICADE [Suspect]
     Active Substance: INFLIXIMAB
     Dosage: UNK
     Route: 065
  779. REMICADE [Suspect]
     Active Substance: INFLIXIMAB
     Dosage: UNK
     Route: 065
  780. REMICADE [Suspect]
     Active Substance: INFLIXIMAB
     Dosage: UNK
     Route: 065
  781. REMICADE [Suspect]
     Active Substance: INFLIXIMAB
     Dosage: UNK
     Route: 065
  782. REMICADE [Suspect]
     Active Substance: INFLIXIMAB
     Dosage: UNK
     Route: 065
  783. REMICADE [Suspect]
     Active Substance: INFLIXIMAB
     Dosage: UNK
     Route: 065
  784. REMICADE [Suspect]
     Active Substance: INFLIXIMAB
     Dosage: UNK
     Route: 065
  785. REMICADE [Suspect]
     Active Substance: INFLIXIMAB
     Dosage: UNK
     Route: 065
  786. REMICADE [Suspect]
     Active Substance: INFLIXIMAB
     Indication: Crohn^s disease
     Dosage: UNK
     Route: 065
  787. REMICADE [Suspect]
     Active Substance: INFLIXIMAB
     Dosage: UNK
     Route: 065
  788. REMICADE [Suspect]
     Active Substance: INFLIXIMAB
     Dosage: UNK
     Route: 065
  789. REMICADE [Suspect]
     Active Substance: INFLIXIMAB
     Indication: Crohn^s disease
     Dosage: UNK, OTHER
     Route: 042
  790. REMICADE [Suspect]
     Active Substance: INFLIXIMAB
     Dosage: UNK
     Route: 065
  791. REMICADE [Suspect]
     Active Substance: INFLIXIMAB
     Dosage: UNK, OTHER
     Route: 042
  792. REMICADE [Suspect]
     Active Substance: INFLIXIMAB
     Dosage: UNK, OTHER
     Route: 042
  793. REMICADE [Suspect]
     Active Substance: INFLIXIMAB
     Dosage: UNK
     Route: 065
  794. REMICADE [Suspect]
     Active Substance: INFLIXIMAB
     Dosage: UNK, OTHER
     Route: 050
  795. REMICADE [Suspect]
     Active Substance: INFLIXIMAB
     Dosage: UNK
     Route: 050
  796. REMICADE [Suspect]
     Active Substance: INFLIXIMAB
     Dosage: UNK, OTHER
     Route: 042
  797. REMICADE [Suspect]
     Active Substance: INFLIXIMAB
     Dosage: UNK, OTHER
     Route: 042
  798. REMICADE [Suspect]
     Active Substance: INFLIXIMAB
     Dosage: UNK, OTHER
     Route: 042
  799. REMICADE [Suspect]
     Active Substance: INFLIXIMAB
     Dosage: UNK, OTHER
     Route: 042
  800. REMICADE [Suspect]
     Active Substance: INFLIXIMAB
     Dosage: UNK, OTHER
     Route: 042
  801. REMICADE [Suspect]
     Active Substance: INFLIXIMAB
     Dosage: UNK
     Route: 065
  802. REMICADE [Suspect]
     Active Substance: INFLIXIMAB
     Dosage: UNK, OTHER
     Route: 065
  803. REMICADE [Suspect]
     Active Substance: INFLIXIMAB
     Dosage: UNK, OTHER
     Route: 050
  804. REMICADE [Suspect]
     Active Substance: INFLIXIMAB
     Dosage: UNK
     Route: 065
  805. REMICADE [Suspect]
     Active Substance: INFLIXIMAB
     Dosage: UNK
     Route: 050
  806. REMICADE [Suspect]
     Active Substance: INFLIXIMAB
     Dosage: UNK
     Route: 065
  807. REMICADE [Suspect]
     Active Substance: INFLIXIMAB
     Dosage: UNK
     Route: 065
  808. REMICADE [Suspect]
     Active Substance: INFLIXIMAB
     Dosage: UNK, OTHER
     Route: 042
  809. REMICADE [Suspect]
     Active Substance: INFLIXIMAB
     Dosage: UNK
     Route: 065
  810. REMICADE [Suspect]
     Active Substance: INFLIXIMAB
     Dosage: UNK, OTHER
     Route: 042
  811. REMICADE [Suspect]
     Active Substance: INFLIXIMAB
     Dosage: UNK, OTHER
     Route: 042
  812. REMICADE [Suspect]
     Active Substance: INFLIXIMAB
     Dosage: UNKNOWN
     Route: 042
  813. REMICADE [Suspect]
     Active Substance: INFLIXIMAB
     Dosage: UNK
     Route: 050
  814. REMICADE [Suspect]
     Active Substance: INFLIXIMAB
     Dosage: UNK
     Route: 065
  815. REMICADE [Suspect]
     Active Substance: INFLIXIMAB
     Dosage: UNK
     Route: 050
  816. REMICADE [Suspect]
     Active Substance: INFLIXIMAB
     Dosage: UNK
     Route: 050
  817. REMICADE [Suspect]
     Active Substance: INFLIXIMAB
     Dosage: UNK
     Route: 050
  818. REMICADE [Suspect]
     Active Substance: INFLIXIMAB
     Dosage: UNK
     Route: 050
  819. REMICADE [Suspect]
     Active Substance: INFLIXIMAB
     Dosage: UNK, OTHER
     Route: 042
  820. REMICADE [Suspect]
     Active Substance: INFLIXIMAB
     Dosage: UNK, OTHER
     Route: 042
  821. REMICADE [Suspect]
     Active Substance: INFLIXIMAB
     Dosage: UNK
     Route: 065
  822. REMICADE [Suspect]
     Active Substance: INFLIXIMAB
     Dosage: UNK
     Route: 065
  823. REMICADE [Suspect]
     Active Substance: INFLIXIMAB
     Dosage: UNK, OTHER
     Route: 042
  824. REMICADE [Suspect]
     Active Substance: INFLIXIMAB
     Dosage: UNK, OTHER
     Route: 042
  825. REMICADE [Suspect]
     Active Substance: INFLIXIMAB
     Dosage: UNK, OTHER
     Route: 042
  826. REMICADE [Suspect]
     Active Substance: INFLIXIMAB
     Dosage: UNK, OTHER
     Route: 042
  827. REMICADE [Suspect]
     Active Substance: INFLIXIMAB
     Dosage: UNK, OTHER
     Route: 042
  828. REMICADE [Suspect]
     Active Substance: INFLIXIMAB
     Dosage: UNK
     Route: 065
  829. REMICADE [Suspect]
     Active Substance: INFLIXIMAB
     Dosage: UNK, OTHER
     Route: 065
  830. REMICADE [Suspect]
     Active Substance: INFLIXIMAB
     Dosage: UNK
     Route: 042
  831. REMICADE [Suspect]
     Active Substance: INFLIXIMAB
     Dosage: UNK
     Route: 042
  832. REMICADE [Suspect]
     Active Substance: INFLIXIMAB
     Dosage: UNK
     Route: 042
  833. REMICADE [Suspect]
     Active Substance: INFLIXIMAB
     Dosage: UNK
     Route: 042
  834. REMICADE [Suspect]
     Active Substance: INFLIXIMAB
     Indication: Crohn^s disease
     Dosage: UNK
     Route: 042
  835. REMICADE [Suspect]
     Active Substance: INFLIXIMAB
     Indication: Crohn^s disease
     Dosage: UNK
     Route: 042
  836. REMICADE [Suspect]
     Active Substance: INFLIXIMAB
     Dosage: UNK
     Route: 042
  837. REMICADE [Suspect]
     Active Substance: INFLIXIMAB
     Dosage: UNK
     Route: 042
  838. RIFAXIMIN [Suspect]
     Active Substance: RIFAXIMIN
     Indication: Product used for unknown indication
     Dosage: UNKNOWN (ADDITIONAL INFORMATION ON DRUG (FREE TEXT): DENTAL EMULSION)
     Route: 065
  839. RIFAXIMIN [Suspect]
     Active Substance: RIFAXIMIN
     Dosage: UNK; ADDITIONAL INFO: ROUTE:OTHER, UNK; ;UNK
  840. RIFAXIMIN [Suspect]
     Active Substance: RIFAXIMIN
     Dosage: UNK; ADDITIONAL INFO: ROUTE:OTHER, UNK; ;UNK
  841. RIFAXIMIN [Suspect]
     Active Substance: RIFAXIMIN
     Dosage: UNK; ADDITIONAL INFO: ROUTE:OTHER, UNK; ;UNK
  842. RIFAXIMIN [Suspect]
     Active Substance: RIFAXIMIN
     Dosage: UNKNOWN (ADDITIONAL INFORMATION ON DRUG (FREE TEXT): DENTAL EMULSION)
     Route: 050
  843. RIFAXIMIN [Suspect]
     Active Substance: RIFAXIMIN
     Dosage: UNKNOWN (ADDITIONAL INFORMATION ON DRUG (FREE TEXT): DENTAL EMULSION)
     Route: 050
  844. RIFAXIMIN [Suspect]
     Active Substance: RIFAXIMIN
     Dosage: UNKNOWN (ADDITIONAL INFORMATION ON DRUG (FREE TEXT): DENTAL EMULSION)
     Route: 050
  845. RIFAXIMIN [Suspect]
     Active Substance: RIFAXIMIN
     Dosage: UNK; ADDITIONAL INFO: ROUTE:OTHER
     Route: 050
  846. RIFAXIMIN [Suspect]
     Active Substance: RIFAXIMIN
     Dosage: UNK, ADALIMUMAB SOLUTION FOR INJECTION, SINGLE DOSE PEN
     Route: 050
  847. RIFAXIMIN [Suspect]
     Active Substance: RIFAXIMIN
     Dosage: UNK (ADDITIONAL INFORMATION ON DRUG (FREE TEXT): DENTAL EMULSION)
     Route: 050
  848. RIFAXIMIN [Suspect]
     Active Substance: RIFAXIMIN
     Dosage: UNK (ADDITIONAL INFORMATION ON DRUG (FREE TEXT): DENTAL EMULSION)
     Route: 050
  849. RIFAXIMIN [Suspect]
     Active Substance: RIFAXIMIN
     Dosage: UNK (ADDITIONAL INFORMATION ON DRUG (FREE TEXT): DENTAL EMULSION)
     Route: 050
  850. RIFAXIMIN [Suspect]
     Active Substance: RIFAXIMIN
     Dosage: UNK (ADDITIONAL INFORMATION ON DRUG (FREE TEXT): DENTAL EMULSION)
     Route: 050
  851. RIFAXIMIN [Suspect]
     Active Substance: RIFAXIMIN
     Dosage: UNK (ADDITIONAL INFORMATION ON DRUG (FREE TEXT): DENTAL EMULSION)
     Route: 050
  852. RIFAXIMIN [Suspect]
     Active Substance: RIFAXIMIN
     Dosage: UNK (ADDITIONAL INFORMATION ON DRUG (FREE TEXT): DENTAL EMULSION)
     Route: 050
  853. RIFAXIMIN [Suspect]
     Active Substance: RIFAXIMIN
     Dosage: FILM COATED TABLET
     Route: 050
  854. RIFAXIMIN [Suspect]
     Active Substance: RIFAXIMIN
     Dosage: FILM COATED TABLET
     Route: 050
  855. RIFAXIMIN [Suspect]
     Active Substance: RIFAXIMIN
     Dosage: UNK UNK, UNK
     Route: 050
  856. RIFAXIMIN [Suspect]
     Active Substance: RIFAXIMIN
     Dosage: UNK (ADDITIONAL INFORMATION ON DRUG (FREE TEXT): DENTAL EMULSION)
     Route: 050
  857. RIFAXIMIN [Suspect]
     Active Substance: RIFAXIMIN
     Dosage: UNK (ADDITIONAL INFORMATION ON DRUG (FREE TEXT): DENTAL EMULSION)
     Route: 050
  858. RIFAXIMIN [Suspect]
     Active Substance: RIFAXIMIN
     Dosage: UNK (ADDITIONAL INFORMATION ON DRUG (FREE TEXT): DENTAL EMULSION)
     Route: 065
  859. RIFAXIMIN [Suspect]
     Active Substance: RIFAXIMIN
     Dosage: UNK (ADDITIONAL INFORMATION ON DRUG (FREE TEXT): DENTAL EMULSION)
     Route: 065
  860. RIFAXIMIN [Suspect]
     Active Substance: RIFAXIMIN
     Dosage: UNK (ADDITIONAL INFORMATION ON DRUG (FREE TEXT): DENTAL EMULSION)
     Route: 065
  861. RIFAXIMIN [Suspect]
     Active Substance: RIFAXIMIN
     Dosage: UNK (ADDITIONAL INFORMATION ON DRUG (FREE TEXT): DENTAL EMULSION)
     Route: 065
  862. RIFAXIMIN [Suspect]
     Active Substance: RIFAXIMIN
     Dosage: UNK (ADDITIONAL INFORMATION ON DRUG (FREE TEXT): DENTAL EMULSION)
     Route: 065
  863. RIFAXIMIN [Suspect]
     Active Substance: RIFAXIMIN
     Dosage: UNK (ADDITIONAL INFORMATION ON DRUG (FREE TEXT): DENTAL EMULSION)
     Route: 065
  864. RIFAXIMIN [Suspect]
     Active Substance: RIFAXIMIN
     Dosage: UNK (ADDITIONAL INFORMATION ON DRUG (FREE TEXT): DENTAL EMULSION)
     Route: 065
  865. RIFAXIMIN [Suspect]
     Active Substance: RIFAXIMIN
     Dosage: FILM COATED TABLET
     Route: 050
  866. RIFAXIMIN [Suspect]
     Active Substance: RIFAXIMIN
     Dosage: UNK
     Route: 065
  867. RIFAXIMIN [Suspect]
     Active Substance: RIFAXIMIN
     Dosage: UNK
     Route: 065
  868. RIFAXIMIN [Suspect]
     Active Substance: RIFAXIMIN
     Dosage: UNK
     Route: 065
  869. RIFAXIMIN [Suspect]
     Active Substance: RIFAXIMIN
     Dosage: UNK
     Route: 065
  870. RIFAXIMIN [Suspect]
     Active Substance: RIFAXIMIN
     Dosage: UNK
     Route: 065
  871. RIFAXIMIN [Suspect]
     Active Substance: RIFAXIMIN
     Dosage: UNK
     Route: 065
  872. RIFAXIMIN [Suspect]
     Active Substance: RIFAXIMIN
     Dosage: UNK
     Route: 065
  873. RIFAXIMIN [Suspect]
     Active Substance: RIFAXIMIN
     Dosage: UNK
     Route: 065
  874. RIFAXIMIN [Suspect]
     Active Substance: RIFAXIMIN
     Dosage: UNK
     Route: 065
  875. RIFAXIMIN [Suspect]
     Active Substance: RIFAXIMIN
     Dosage: UNK; ;
     Route: 050
  876. RIFAXIMIN [Suspect]
     Active Substance: RIFAXIMIN
     Dosage: UNK; ;
     Route: 050
  877. RIFAXIMIN [Suspect]
     Active Substance: RIFAXIMIN
     Dosage: UNKNOWN
     Route: 050
  878. RIFAXIMIN [Suspect]
     Active Substance: RIFAXIMIN
     Dosage: UNKNOWN
     Route: 050
  879. RIFAXIMIN [Suspect]
     Active Substance: RIFAXIMIN
     Dosage: UNKNOWN
     Route: 050
  880. RIFAXIMIN [Suspect]
     Active Substance: RIFAXIMIN
     Dosage: UNKNOWN
     Route: 050
  881. RIFAXIMIN [Suspect]
     Active Substance: RIFAXIMIN
     Dosage: UNKNOWN
     Route: 050
  882. RIFAXIMIN [Suspect]
     Active Substance: RIFAXIMIN
     Dosage: UNKNOWN
     Route: 050
  883. RIFAXIMIN [Suspect]
     Active Substance: RIFAXIMIN
     Dosage: UNKNOWN
     Route: 050
  884. RIFAXIMIN [Suspect]
     Active Substance: RIFAXIMIN
     Dosage: UNKNOWN
     Route: 050
  885. RIFAXIMIN [Suspect]
     Active Substance: RIFAXIMIN
     Dosage: UNKNOWN
     Route: 050
  886. RIFAXIMIN [Suspect]
     Active Substance: RIFAXIMIN
     Dosage: UNKNOWN
     Route: 050
  887. RIFAXIMIN [Suspect]
     Active Substance: RIFAXIMIN
     Dosage: UNKNOWN
     Route: 050
  888. RIFAXIMIN [Suspect]
     Active Substance: RIFAXIMIN
     Indication: Product used for unknown indication
     Dosage: ADDITIONAL INFO: ROUTE:OTHER, UNK; ;
  889. RIFAXIMIN [Suspect]
     Active Substance: RIFAXIMIN
     Dosage: UNKNOWN; OTHER
     Route: 050
  890. RIFAXIMIN [Suspect]
     Active Substance: RIFAXIMIN
     Dosage: UNKNOWN; OTHER
  891. RIFAXIMIN [Suspect]
     Active Substance: RIFAXIMIN
     Dosage: UNKNOWN; OTHER
  892. RIFAXIMIN [Suspect]
     Active Substance: RIFAXIMIN
     Dosage: UNK, ADDITIONAL INFO: ADALIMUMAB SOLUTION FOR INJECTION, SINGLE DOSE PEN
     Route: 050
  893. RIFAXIMIN [Suspect]
     Active Substance: RIFAXIMIN
     Dosage: UNK (ADDITIONAL INFORMATION ON DRUG (FREE TEXT): ADALIMUMAB SOLUTION FOR INJECTION, SINGLE DOSE PEN)
     Route: 050
  894. RIFAXIMIN [Suspect]
     Active Substance: RIFAXIMIN
     Dosage: UNKNOWN
     Route: 050
  895. RIFAXIMIN [Suspect]
     Active Substance: RIFAXIMIN
     Dosage: UNKNOWN
     Route: 050
  896. RIFAXIMIN [Suspect]
     Active Substance: RIFAXIMIN
     Dosage: UNK UNK, UNK
     Route: 065
  897. RIFAXIMIN [Suspect]
     Active Substance: RIFAXIMIN
     Dosage: UNK UNK, UNK
     Route: 065
  898. RIFAXIMIN [Suspect]
     Active Substance: RIFAXIMIN
     Dosage: UNK UNK, UNK
     Route: 065
  899. RIFAXIMIN [Suspect]
     Active Substance: RIFAXIMIN
     Dosage: UNK UNK, UNK
     Route: 065
  900. RIFAXIMIN [Suspect]
     Active Substance: RIFAXIMIN
     Dosage: UNK UNK, UNK
     Route: 065
  901. RIFAXIMIN [Suspect]
     Active Substance: RIFAXIMIN
     Dosage: UNK UNK, UNK
     Route: 065
  902. RIFAXIMIN [Suspect]
     Active Substance: RIFAXIMIN
     Dosage: UNK UNK, UNK
     Route: 065
  903. RIFAXIMIN [Suspect]
     Active Substance: RIFAXIMIN
     Dosage: UNK UNK, UNK
     Route: 065
  904. RIFAXIMIN [Suspect]
     Active Substance: RIFAXIMIN
     Dosage: UNK (ADALIMUMAB SOLUTION FOR INJECTION, SINGLE DOSE PEN)
     Route: 065
  905. RIFAXIMIN [Suspect]
     Active Substance: RIFAXIMIN
     Dosage: UNK
     Route: 065
  906. RIFAXIMIN [Suspect]
     Active Substance: RIFAXIMIN
     Dosage: UNK
     Route: 065
  907. RIFAXIMIN [Suspect]
     Active Substance: RIFAXIMIN
     Dosage: UNK
     Route: 065
  908. RIFAXIMIN [Suspect]
     Active Substance: RIFAXIMIN
     Dosage: UNK
     Route: 065
  909. RIFAXIMIN [Suspect]
     Active Substance: RIFAXIMIN
     Dosage: UNK
     Route: 065
  910. RIFAXIMIN [Suspect]
     Active Substance: RIFAXIMIN
     Dosage: UNK
     Route: 065
  911. RIFAXIMIN [Suspect]
     Active Substance: RIFAXIMIN
     Dosage: UNK
     Route: 050
  912. RIFAXIMIN [Suspect]
     Active Substance: RIFAXIMIN
     Dosage: UNK
     Route: 050
  913. RIFAXIMIN [Suspect]
     Active Substance: RIFAXIMIN
     Dosage: UNK
     Route: 050
  914. RIFAXIMIN [Suspect]
     Active Substance: RIFAXIMIN
     Dosage: UNK
     Route: 050
  915. RIFAXIMIN [Suspect]
     Active Substance: RIFAXIMIN
     Dosage: UNK
     Route: 050
  916. RIFAXIMIN [Suspect]
     Active Substance: RIFAXIMIN
     Dosage: UNK
     Route: 050
  917. RIFAXIMIN [Suspect]
     Active Substance: RIFAXIMIN
     Dosage: FILM COATED TABLET (ADDITIONAL INFORMATION ON DRUG (FREE TEXT): ADALIMUMAB SOLUTION FOR INJECTION, S
     Route: 065
  918. RIFAXIMIN [Suspect]
     Active Substance: RIFAXIMIN
     Dosage: FILM COATED TABLET
     Route: 065
  919. RIFAXIMIN [Suspect]
     Active Substance: RIFAXIMIN
     Dosage: FILM COATED TABLET
     Route: 065
  920. RIFAXIMIN [Suspect]
     Active Substance: RIFAXIMIN
     Dosage: FILM COATED TABLET
     Route: 065
  921. RIFAXIMIN [Suspect]
     Active Substance: RIFAXIMIN
     Dosage: FILM COATED TABLET
     Route: 065
  922. RIFAXIMIN [Suspect]
     Active Substance: RIFAXIMIN
     Dosage: FILM COATED TABLET
     Route: 065
  923. RIFAXIMIN [Suspect]
     Active Substance: RIFAXIMIN
     Dosage: FILM COATED TABLET (ADDITIONAL INFORMATION ON DRUG (FREE TEXT): ADALIMUMAB SOLUTION FOR INJECTION, S
     Route: 050
  924. RIFAXIMIN [Suspect]
     Active Substance: RIFAXIMIN
     Dosage: FILM COATED TABLET
     Route: 065
  925. RIFAXIMIN [Suspect]
     Active Substance: RIFAXIMIN
     Dosage: FILM COATED TABLET
     Route: 065
  926. RIFAXIMIN [Suspect]
     Active Substance: RIFAXIMIN
     Dosage: UNK
     Route: 050
  927. RIFAXIMIN [Suspect]
     Active Substance: RIFAXIMIN
     Dosage: UNK (ADALIMUMAB SOLUTION FOR INJECTION, SINGLE DOSE PEN)
     Route: 065
  928. RIFAXIMIN [Suspect]
     Active Substance: RIFAXIMIN
     Dosage: UNK
     Route: 065
  929. RIFAXIMIN [Suspect]
     Active Substance: RIFAXIMIN
     Dosage: UNK
     Route: 065
  930. RIFAXIMIN [Suspect]
     Active Substance: RIFAXIMIN
     Dosage: UNK
     Route: 065
  931. RIFAXIMIN [Suspect]
     Active Substance: RIFAXIMIN
     Dosage: UNK
     Route: 065
  932. RIFAXIMIN [Suspect]
     Active Substance: RIFAXIMIN
     Dosage: UNK
     Route: 065
  933. RIFAXIMIN [Suspect]
     Active Substance: RIFAXIMIN
     Dosage: UNK
     Route: 065
  934. RIFAXIMIN [Suspect]
     Active Substance: RIFAXIMIN
     Dosage: UNK, OTHER (ADALIMUMAB SOLUTION FOR INJECTION, SINGLE DOSE PEN)
     Route: 065
  935. RIFAXIMIN [Suspect]
     Active Substance: RIFAXIMIN
     Dosage: UNK, OTHER
     Route: 065
  936. RIFAXIMIN [Suspect]
     Active Substance: RIFAXIMIN
     Dosage: UNK; ;
     Route: 050
  937. RIFAXIMIN [Suspect]
     Active Substance: RIFAXIMIN
     Dosage: UNK; ;
     Route: 050
  938. RIFAXIMIN [Suspect]
     Active Substance: RIFAXIMIN
     Indication: Product used for unknown indication
     Route: 050
  939. RIFAXIMIN [Suspect]
     Active Substance: RIFAXIMIN
     Dosage: UNK, UNK, UNK
     Route: 050
  940. RIFAXIMIN [Suspect]
     Active Substance: RIFAXIMIN
     Indication: Product used for unknown indication
     Dosage: UNK; ;
     Route: 050
  941. RIFAXIMIN [Suspect]
     Active Substance: RIFAXIMIN
     Dosage: UNK; ;
     Route: 050
  942. RIFAXIMIN [Suspect]
     Active Substance: RIFAXIMIN
     Dosage: UNK; ;
     Route: 050
  943. RIFAXIMIN [Suspect]
     Active Substance: RIFAXIMIN
     Dosage: UNK; ;
     Route: 050
  944. RIFAXIMIN [Suspect]
     Active Substance: RIFAXIMIN
     Dosage: UNK; ;
     Route: 050
  945. RIFAXIMIN [Suspect]
     Active Substance: RIFAXIMIN
     Dosage: UNK; ;
     Route: 050
  946. RIFAXIMIN [Suspect]
     Active Substance: RIFAXIMIN
     Dosage: UNK; ;
     Route: 050
  947. RIFAXIMIN [Suspect]
     Active Substance: RIFAXIMIN
     Dosage: UNK; ;
     Route: 050
  948. RIFAXIMIN [Suspect]
     Active Substance: RIFAXIMIN
     Dosage: FILM COATED TABLET
     Route: 050
  949. RIFAXIMIN [Suspect]
     Active Substance: RIFAXIMIN
     Dosage: FILM COATED TABLET
     Route: 050
  950. RIFAXIMIN [Suspect]
     Active Substance: RIFAXIMIN
     Dosage: FILM COATED TABLET
     Route: 050
  951. RIFAXIMIN [Suspect]
     Active Substance: RIFAXIMIN
     Dosage: UNK
     Route: 065
  952. RIFAXIMIN [Suspect]
     Active Substance: RIFAXIMIN
     Dosage: UNK
     Route: 065
  953. RIFAXIMIN [Suspect]
     Active Substance: RIFAXIMIN
     Dosage: UNK
     Route: 065
  954. RIFAXIMIN [Suspect]
     Active Substance: RIFAXIMIN
     Dosage: UNK
     Route: 065
  955. RIFAXIMIN [Suspect]
     Active Substance: RIFAXIMIN
     Dosage: UNK
     Route: 065
  956. RIFAXIMIN [Suspect]
     Active Substance: RIFAXIMIN
     Dosage: UNK
     Route: 065
  957. RIFAXIMIN [Suspect]
     Active Substance: RIFAXIMIN
     Dosage: UNK
     Route: 065
  958. RIFAXIMIN [Suspect]
     Active Substance: RIFAXIMIN
     Indication: Product used for unknown indication
     Dosage: UNK; ;
     Route: 050
  959. RIFAXIMIN [Suspect]
     Active Substance: RIFAXIMIN
     Indication: Product used for unknown indication
     Dosage: FILM COATED TABLET
     Route: 050
  960. RIFAXIMIN [Suspect]
     Active Substance: RIFAXIMIN
     Dosage: UNK
     Route: 050
  961. RIFAXIMIN [Suspect]
     Active Substance: RIFAXIMIN
     Dosage: FILM COATED TABLET
     Route: 050
  962. RIFAXIMIN [Suspect]
     Active Substance: RIFAXIMIN
     Dosage: FILM COATED TABLET
     Route: 050
  963. RIFAXIMIN [Suspect]
     Active Substance: RIFAXIMIN
     Dosage: UNK UNK, UNK
     Route: 050
  964. RIFAXIMIN [Suspect]
     Active Substance: RIFAXIMIN
     Dosage: FILM COATED TABLET
     Route: 050
  965. RIFAXIMIN [Suspect]
     Active Substance: RIFAXIMIN
     Dosage: FILM COATED TABLET
     Route: 050
  966. RIFAXIMIN [Suspect]
     Active Substance: RIFAXIMIN
     Dosage: FILM COATED TABLET
     Route: 050
  967. RIFAXIMIN [Suspect]
     Active Substance: RIFAXIMIN
     Dosage: FILM COATED TABLET
     Route: 050
  968. RIFAXIMIN [Suspect]
     Active Substance: RIFAXIMIN
     Dosage: FILM COATED TABLET
     Route: 050
  969. RIFAXIMIN [Suspect]
     Active Substance: RIFAXIMIN
     Dosage: FILM COATED TABLET
     Route: 050
  970. RIFAXIMIN [Suspect]
     Active Substance: RIFAXIMIN
     Dosage: FILM COATED TABLET
     Route: 050
  971. RIFAXIMIN [Suspect]
     Active Substance: RIFAXIMIN
     Dosage: FILM COATED TABLET
     Route: 050
  972. RIFAXIMIN [Suspect]
     Active Substance: RIFAXIMIN
     Dosage: FILM COATED TABLET
     Route: 050
  973. RIFAXIMIN [Suspect]
     Active Substance: RIFAXIMIN
     Dosage: FILM COATED TABLET
     Route: 050
  974. RIFAXIMIN [Suspect]
     Active Substance: RIFAXIMIN
     Dosage: FILM COATED TABLET
     Route: 050
  975. RIFAXIMIN [Suspect]
     Active Substance: RIFAXIMIN
     Dosage: FILM COATED TABLET
     Route: 050
  976. RIFAXIMIN [Suspect]
     Active Substance: RIFAXIMIN
     Dosage: FILM COATED TABLET
     Route: 050
  977. RIFAXIMIN [Suspect]
     Active Substance: RIFAXIMIN
     Dosage: FILM COATED TABLET
     Route: 050
  978. RIFAXIMIN [Suspect]
     Active Substance: RIFAXIMIN
     Dosage: FILM COATED TABLET
     Route: 050
  979. RIFAXIMIN [Suspect]
     Active Substance: RIFAXIMIN
     Dosage: FILM COATED TABLET
     Route: 050
  980. RIFAXIMIN [Suspect]
     Active Substance: RIFAXIMIN
     Dosage: FILM COATED TABLET
     Route: 050
  981. RIFAXIMIN [Suspect]
     Active Substance: RIFAXIMIN
     Indication: Product used for unknown indication
     Dosage: UNK
  982. RIFAXIMIN [Suspect]
     Active Substance: RIFAXIMIN
     Indication: Product used for unknown indication
     Dosage: UNKNOWN
     Route: 050
  983. RIFAXIMIN [Suspect]
     Active Substance: RIFAXIMIN
     Dosage: UNKNOWN
     Route: 050
  984. RIFAXIMIN [Suspect]
     Active Substance: RIFAXIMIN
     Dosage: UNKNOWN
     Route: 050
  985. RIFAXIMIN [Suspect]
     Active Substance: RIFAXIMIN
     Dosage: UNKNOWN
     Route: 050
  986. RIFAXIMIN [Suspect]
     Active Substance: RIFAXIMIN
     Dosage: UNKNOWN
     Route: 050
  987. RIFAXIMIN [Suspect]
     Active Substance: RIFAXIMIN
     Dosage: UNK; ADDITIONAL INFORMATION ON DRUG (FREE TEXT): ADALIMUMAB SOLUTION FOR INJECTION, SINGLE DOSE PEN
     Route: 050
  988. RIFAXIMIN [Suspect]
     Active Substance: RIFAXIMIN
     Dosage: UNK
     Route: 050
  989. RIFAXIMIN [Suspect]
     Active Substance: RIFAXIMIN
     Dosage: UNK
     Route: 050
  990. RIFAXIMIN [Suspect]
     Active Substance: RIFAXIMIN
     Dosage: FILM COATED TABLET
     Route: 065
  991. VEDOLIZUMAB [Suspect]
     Active Substance: VEDOLIZUMAB
     Indication: Crohn^s disease
     Dosage: UNK (ADALIMUMAB SOLUTION FOR INJECTION, SINGLE DOSE PEN)
     Route: 065
     Dates: start: 20211112
  992. VEDOLIZUMAB [Suspect]
     Active Substance: VEDOLIZUMAB
     Dosage: UNK (ADALIMUMAB SOLUTION FOR INJECTION, SINGLE DOSE PEN)
  993. VEDOLIZUMAB [Suspect]
     Active Substance: VEDOLIZUMAB
     Dosage: UNK; ADDITIONAL INFO: ROUTE:OTHER ROUTE:OTHER ROUTE:OTHER ROUTE:
  994. VEDOLIZUMAB [Suspect]
     Active Substance: VEDOLIZUMAB
     Dosage: UNK; ADDITIONAL INFO: ROUTE:OTHER ROUTE:
     Route: 050
  995. VEDOLIZUMAB [Suspect]
     Active Substance: VEDOLIZUMAB
     Dosage: UNKNOWN; ADDITIONAL INFO: ROUTE:OTHER ROUTE:
     Route: 050
  996. VEDOLIZUMAB [Suspect]
     Active Substance: VEDOLIZUMAB
     Dosage: UNKNOWN; OTHER
     Route: 050
  997. VEDOLIZUMAB [Suspect]
     Active Substance: VEDOLIZUMAB
     Dosage: UNKNOWN; OTHER
     Route: 050
  998. VEDOLIZUMAB [Suspect]
     Active Substance: VEDOLIZUMAB
     Dosage: UNKNOWN; OTHER
     Route: 050
  999. VEDOLIZUMAB [Suspect]
     Active Substance: VEDOLIZUMAB
     Dosage: UNK
     Route: 050
  1000. VEDOLIZUMAB [Suspect]
     Active Substance: VEDOLIZUMAB
     Dosage: UNK
     Route: 050
  1001. VEDOLIZUMAB [Suspect]
     Active Substance: VEDOLIZUMAB
     Dosage: UNK
     Route: 050
  1002. VEDOLIZUMAB [Suspect]
     Active Substance: VEDOLIZUMAB
     Dosage: UNK
     Route: 050
  1003. VEDOLIZUMAB [Suspect]
     Active Substance: VEDOLIZUMAB
     Dosage: UNK
     Route: 050
  1004. VEDOLIZUMAB [Suspect]
     Active Substance: VEDOLIZUMAB
     Dosage: UNK
     Route: 050
  1005. VEDOLIZUMAB [Suspect]
     Active Substance: VEDOLIZUMAB
     Dosage: UNK (ADALIMUMAB SOLUTION FOR INJECTION, SINGLE DOSE PEN)
     Route: 050
     Dates: start: 20211112
  1006. VEDOLIZUMAB [Suspect]
     Active Substance: VEDOLIZUMAB
     Dosage: UNK (ADALIMUMAB SOLUTION FOR INJECTION, SINGLE DOSE PEN)
     Route: 050
  1007. VEDOLIZUMAB [Suspect]
     Active Substance: VEDOLIZUMAB
     Dosage: UNK
     Route: 050
  1008. VEDOLIZUMAB [Suspect]
     Active Substance: VEDOLIZUMAB
     Dosage: UNK
     Route: 065
     Dates: start: 20211112
  1009. VEDOLIZUMAB [Suspect]
     Active Substance: VEDOLIZUMAB
     Dosage: UNK UNK UNK
     Route: 065
  1010. VEDOLIZUMAB [Suspect]
     Active Substance: VEDOLIZUMAB
     Dosage: UNK UNK UNK
     Route: 065
  1011. VEDOLIZUMAB [Suspect]
     Active Substance: VEDOLIZUMAB
     Dosage: UNK UNK UNK
     Route: 065
  1012. VEDOLIZUMAB [Suspect]
     Active Substance: VEDOLIZUMAB
     Dosage: UNK UNK UNK
     Route: 065
  1013. VEDOLIZUMAB [Suspect]
     Active Substance: VEDOLIZUMAB
     Dosage: UNK UNK UNK
     Route: 065
  1014. VEDOLIZUMAB [Suspect]
     Active Substance: VEDOLIZUMAB
     Dosage: UNK UNK UNK
     Route: 065
  1015. VEDOLIZUMAB [Suspect]
     Active Substance: VEDOLIZUMAB
     Dosage: UNK UNK UNK
     Route: 065
  1016. VEDOLIZUMAB [Suspect]
     Active Substance: VEDOLIZUMAB
     Dosage: UNK UNK UNK
     Route: 065
  1017. VEDOLIZUMAB [Suspect]
     Active Substance: VEDOLIZUMAB
     Dosage: UNK UNK UNK
     Route: 065
  1018. VEDOLIZUMAB [Suspect]
     Active Substance: VEDOLIZUMAB
     Dosage: UNK UNK UNK
     Route: 065
  1019. VEDOLIZUMAB [Suspect]
     Active Substance: VEDOLIZUMAB
     Dosage: UNK UNK UNK
     Route: 065
  1020. VEDOLIZUMAB [Suspect]
     Active Substance: VEDOLIZUMAB
     Dosage: UNK UNK UNK
     Route: 065
  1021. VEDOLIZUMAB [Suspect]
     Active Substance: VEDOLIZUMAB
     Dosage: SOLUTION FOR INJECTION
     Route: 065
  1022. VEDOLIZUMAB [Suspect]
     Active Substance: VEDOLIZUMAB
     Dosage: SOLUTION FOR INJECTION
     Route: 065
  1023. VEDOLIZUMAB [Suspect]
     Active Substance: VEDOLIZUMAB
     Dosage: SOLUTION FOR INJECTION
     Route: 065
  1024. VEDOLIZUMAB [Suspect]
     Active Substance: VEDOLIZUMAB
     Dosage: SOLUTION FOR INJECTION
     Route: 065
  1025. VEDOLIZUMAB [Suspect]
     Active Substance: VEDOLIZUMAB
     Dosage: SOLUTION FOR INJECTION
     Route: 065
  1026. VEDOLIZUMAB [Suspect]
     Active Substance: VEDOLIZUMAB
     Dosage: SOLUTION FOR INJECTION
     Route: 065
  1027. VEDOLIZUMAB [Suspect]
     Active Substance: VEDOLIZUMAB
     Dosage: SOLUTION FOR INJECTION
     Route: 065
  1028. VEDOLIZUMAB [Suspect]
     Active Substance: VEDOLIZUMAB
     Dosage: SOLUTION FOR INJECTION
     Route: 065
  1029. VEDOLIZUMAB [Suspect]
     Active Substance: VEDOLIZUMAB
     Dosage: SOLUTION FOR INJECTION
     Route: 065
  1030. VEDOLIZUMAB [Suspect]
     Active Substance: VEDOLIZUMAB
     Dosage: SOLUTION FOR INJECTION
     Route: 065
  1031. VEDOLIZUMAB [Suspect]
     Active Substance: VEDOLIZUMAB
     Dosage: SOLUTION FOR INJECTION
     Route: 065
  1032. VEDOLIZUMAB [Suspect]
     Active Substance: VEDOLIZUMAB
     Dosage: SOLUTION FOR INJECTION
     Route: 065
  1033. VEDOLIZUMAB [Suspect]
     Active Substance: VEDOLIZUMAB
     Dosage: SOLUTION FOR INJECTION
     Route: 065
  1034. VEDOLIZUMAB [Suspect]
     Active Substance: VEDOLIZUMAB
     Dosage: SOLUTION FOR INJECTION
     Route: 065
  1035. VEDOLIZUMAB [Suspect]
     Active Substance: VEDOLIZUMAB
     Dosage: SOLUTION FOR INJECTION
     Route: 065
  1036. VEDOLIZUMAB [Suspect]
     Active Substance: VEDOLIZUMAB
     Dosage: SOLUTION FOR INJECTION
     Route: 065
  1037. VEDOLIZUMAB [Suspect]
     Active Substance: VEDOLIZUMAB
     Dosage: SOLUTION FOR INJECTION
     Route: 065
  1038. VEDOLIZUMAB [Suspect]
     Active Substance: VEDOLIZUMAB
     Dosage: SOLUTION FOR INJECTION
     Route: 065
  1039. VEDOLIZUMAB [Suspect]
     Active Substance: VEDOLIZUMAB
     Dosage: SOLUTION FOR INJECTION
     Route: 065
  1040. VEDOLIZUMAB [Suspect]
     Active Substance: VEDOLIZUMAB
     Dosage: SOLUTION FOR INJECTION
     Route: 065
  1041. VEDOLIZUMAB [Suspect]
     Active Substance: VEDOLIZUMAB
     Indication: Crohn^s disease
     Dosage: SOLUTION FOR INJECTION
     Route: 050
  1042. VEDOLIZUMAB [Suspect]
     Active Substance: VEDOLIZUMAB
     Dosage: SOLUTION FOR INJECTION
     Route: 050
  1043. VEDOLIZUMAB [Suspect]
     Active Substance: VEDOLIZUMAB
     Dosage: SOLUTION FOR INJECTION
     Route: 050
  1044. VEDOLIZUMAB [Suspect]
     Active Substance: VEDOLIZUMAB
     Dosage: SOLUTION FOR INJECTION
     Route: 050
  1045. VEDOLIZUMAB [Suspect]
     Active Substance: VEDOLIZUMAB
     Dosage: SOLUTION FOR INJECTION
     Route: 050
  1046. VEDOLIZUMAB [Suspect]
     Active Substance: VEDOLIZUMAB
     Dosage: SOLUTION FOR INJECTION
     Route: 050
  1047. VEDOLIZUMAB [Suspect]
     Active Substance: VEDOLIZUMAB
     Dosage: UNK
     Route: 050
  1048. VEDOLIZUMAB [Suspect]
     Active Substance: VEDOLIZUMAB
     Dosage: UNK
     Route: 050
  1049. VEDOLIZUMAB [Suspect]
     Active Substance: VEDOLIZUMAB
     Dosage: UNK
     Route: 050
  1050. VEDOLIZUMAB [Suspect]
     Active Substance: VEDOLIZUMAB
     Dosage: UNK, ADALIMUMAB SOLUTION FOR INJECTION, SINGLE DOSE PEN
     Route: 050
  1051. VEDOLIZUMAB [Suspect]
     Active Substance: VEDOLIZUMAB
     Dosage: UNK
     Route: 050
  1052. VEDOLIZUMAB [Suspect]
     Active Substance: VEDOLIZUMAB
     Dosage: UNK
     Route: 050
  1053. VEDOLIZUMAB [Suspect]
     Active Substance: VEDOLIZUMAB
     Dosage: UNK
     Route: 050
  1054. VEDOLIZUMAB [Suspect]
     Active Substance: VEDOLIZUMAB
     Dosage: UNK
     Route: 050
  1055. VEDOLIZUMAB [Suspect]
     Active Substance: VEDOLIZUMAB
     Dosage: UNK, ADALIMUMAB SOLUTION FOR INJECTION, SINGLE DOSE PEN
     Route: 065
     Dates: start: 20211112
  1056. VEDOLIZUMAB [Suspect]
     Active Substance: VEDOLIZUMAB
     Dosage: UNK
     Route: 065
  1057. VEDOLIZUMAB [Suspect]
     Active Substance: VEDOLIZUMAB
     Dosage: UNK
     Route: 065
  1058. VEDOLIZUMAB [Suspect]
     Active Substance: VEDOLIZUMAB
     Dosage: UNK
     Route: 065
  1059. VEDOLIZUMAB [Suspect]
     Active Substance: VEDOLIZUMAB
     Dosage: UNK
     Route: 065
  1060. VEDOLIZUMAB [Suspect]
     Active Substance: VEDOLIZUMAB
     Dosage: UNK
     Route: 065
  1061. VEDOLIZUMAB [Suspect]
     Active Substance: VEDOLIZUMAB
     Dosage: UNK
     Route: 065
  1062. VEDOLIZUMAB [Suspect]
     Active Substance: VEDOLIZUMAB
     Dosage: UNK
     Route: 065
  1063. VEDOLIZUMAB [Suspect]
     Active Substance: VEDOLIZUMAB
     Dosage: UNK
     Route: 065
  1064. VEDOLIZUMAB [Suspect]
     Active Substance: VEDOLIZUMAB
     Dosage: UNK
     Route: 065
  1065. VEDOLIZUMAB [Suspect]
     Active Substance: VEDOLIZUMAB
     Dosage: UNK
     Route: 065
  1066. VEDOLIZUMAB [Suspect]
     Active Substance: VEDOLIZUMAB
     Dosage: UNK
     Route: 065
  1067. VEDOLIZUMAB [Suspect]
     Active Substance: VEDOLIZUMAB
     Dosage: UNK
     Route: 065
  1068. VEDOLIZUMAB [Suspect]
     Active Substance: VEDOLIZUMAB
     Dosage: UNK
     Route: 065
  1069. VEDOLIZUMAB [Suspect]
     Active Substance: VEDOLIZUMAB
     Dosage: UNK
     Route: 065
  1070. VEDOLIZUMAB [Suspect]
     Active Substance: VEDOLIZUMAB
     Dosage: UNKNOWN
     Route: 050
  1071. VEDOLIZUMAB [Suspect]
     Active Substance: VEDOLIZUMAB
     Dosage: UNKNOWN
     Route: 050
  1072. VEDOLIZUMAB [Suspect]
     Active Substance: VEDOLIZUMAB
     Dosage: UNKNOWN
     Route: 050
  1073. VEDOLIZUMAB [Suspect]
     Active Substance: VEDOLIZUMAB
     Dosage: UNKNOWN
     Route: 050
  1074. VEDOLIZUMAB [Suspect]
     Active Substance: VEDOLIZUMAB
     Dosage: UNKNOWN
     Route: 050
  1075. VEDOLIZUMAB [Suspect]
     Active Substance: VEDOLIZUMAB
     Dosage: UNKNOWN
     Route: 050
  1076. VEDOLIZUMAB [Suspect]
     Active Substance: VEDOLIZUMAB
     Dosage: UNKNOWN
     Route: 050
  1077. VEDOLIZUMAB [Suspect]
     Active Substance: VEDOLIZUMAB
     Dosage: UNKNOWN
     Route: 050
  1078. VEDOLIZUMAB [Suspect]
     Active Substance: VEDOLIZUMAB
     Dosage: UNKNOWN
     Route: 050
  1079. VEDOLIZUMAB [Suspect]
     Active Substance: VEDOLIZUMAB
     Dosage: UNK, SINGLE DOSE PEN
     Route: 050
  1080. VEDOLIZUMAB [Suspect]
     Active Substance: VEDOLIZUMAB
     Dosage: UNK (SOLUTION FOR INJECTION)
     Route: 065
  1081. VEDOLIZUMAB [Suspect]
     Active Substance: VEDOLIZUMAB
     Dosage: UNKNOWN; ;
     Route: 050
  1082. VEDOLIZUMAB [Suspect]
     Active Substance: VEDOLIZUMAB
     Dosage: UNKNOWN; ;
     Route: 050
  1083. VEDOLIZUMAB [Suspect]
     Active Substance: VEDOLIZUMAB
     Dosage: UNKNOWN; ;
     Route: 050
  1084. VEDOLIZUMAB [Suspect]
     Active Substance: VEDOLIZUMAB
     Dosage: UNKNOWN; ;
     Route: 050
  1085. VEDOLIZUMAB [Suspect]
     Active Substance: VEDOLIZUMAB
     Dosage: UNKNOWN; ;
     Route: 050
  1086. VEDOLIZUMAB [Suspect]
     Active Substance: VEDOLIZUMAB
     Dosage: UNKNOWN; ;
     Route: 050
  1087. VEDOLIZUMAB [Suspect]
     Active Substance: VEDOLIZUMAB
     Dosage: UNK; ;
     Route: 050
  1088. VEDOLIZUMAB [Suspect]
     Active Substance: VEDOLIZUMAB
     Dosage: UNK; ;
     Route: 050
  1089. VEDOLIZUMAB [Suspect]
     Active Substance: VEDOLIZUMAB
     Dosage: UNK; ;
     Route: 050
  1090. VEDOLIZUMAB [Suspect]
     Active Substance: VEDOLIZUMAB
     Dosage: UNK; ;
     Route: 050
  1091. VEDOLIZUMAB [Suspect]
     Active Substance: VEDOLIZUMAB
     Indication: Crohn^s disease
     Dosage: SOLUTION FOR INJECTION
     Route: 065
  1092. VEDOLIZUMAB [Suspect]
     Active Substance: VEDOLIZUMAB
     Dosage: UNK
     Route: 065
  1093. VEDOLIZUMAB [Suspect]
     Active Substance: VEDOLIZUMAB
     Dosage: UNK
     Route: 065
  1094. VEDOLIZUMAB [Suspect]
     Active Substance: VEDOLIZUMAB
     Dosage: UNK
     Route: 065
  1095. VEDOLIZUMAB [Suspect]
     Active Substance: VEDOLIZUMAB
     Dosage: UNK
     Route: 065
  1096. VEDOLIZUMAB [Suspect]
     Active Substance: VEDOLIZUMAB
     Dosage: UNK
     Route: 065
  1097. VEDOLIZUMAB [Suspect]
     Active Substance: VEDOLIZUMAB
     Dosage: UNK
     Route: 065
  1098. VEDOLIZUMAB [Suspect]
     Active Substance: VEDOLIZUMAB
     Dosage: UNK
     Route: 065
  1099. VEDOLIZUMAB [Suspect]
     Active Substance: VEDOLIZUMAB
     Dosage: UNK
     Route: 065
  1100. VEDOLIZUMAB [Suspect]
     Active Substance: VEDOLIZUMAB
     Dosage: UNK
     Route: 065
  1101. VEDOLIZUMAB [Suspect]
     Active Substance: VEDOLIZUMAB
     Dosage: UNK
     Route: 065
  1102. VEDOLIZUMAB [Suspect]
     Active Substance: VEDOLIZUMAB
     Dosage: UNK
     Route: 065
  1103. VEDOLIZUMAB [Suspect]
     Active Substance: VEDOLIZUMAB
     Dosage: UNK
     Route: 065
  1104. VEDOLIZUMAB [Suspect]
     Active Substance: VEDOLIZUMAB
     Dosage: UNK
     Route: 065
  1105. VEDOLIZUMAB [Suspect]
     Active Substance: VEDOLIZUMAB
     Dosage: UNK
     Route: 065
  1106. VEDOLIZUMAB [Suspect]
     Active Substance: VEDOLIZUMAB
     Dosage: UNK, OTHER
     Route: 065
  1107. VEDOLIZUMAB [Suspect]
     Active Substance: VEDOLIZUMAB
     Dosage: UNK, OTHER
     Route: 065
  1108. VEDOLIZUMAB [Suspect]
     Active Substance: VEDOLIZUMAB
     Dosage: UNK, OTHER
     Route: 065
  1109. VEDOLIZUMAB [Suspect]
     Active Substance: VEDOLIZUMAB
     Dosage: UNK, OTHER
     Route: 065
  1110. VEDOLIZUMAB [Suspect]
     Active Substance: VEDOLIZUMAB
     Dosage: UNK, OTHER
     Route: 065
  1111. VEDOLIZUMAB [Suspect]
     Active Substance: VEDOLIZUMAB
     Dosage: UNK, OTHER
     Route: 065
  1112. VEDOLIZUMAB [Suspect]
     Active Substance: VEDOLIZUMAB
     Dosage: UNK
     Route: 050
  1113. VEDOLIZUMAB [Suspect]
     Active Substance: VEDOLIZUMAB
     Dosage: UNK
  1114. VEDOLIZUMAB [Suspect]
     Active Substance: VEDOLIZUMAB
     Dosage: UNK
  1115. VEDOLIZUMAB [Suspect]
     Active Substance: VEDOLIZUMAB
     Indication: Crohn^s disease
     Dosage: UNK; ;
     Route: 050
  1116. VEDOLIZUMAB [Suspect]
     Active Substance: VEDOLIZUMAB
     Dosage: UNK; ;
     Route: 050
  1117. VEDOLIZUMAB [Suspect]
     Active Substance: VEDOLIZUMAB
     Dosage: UNK; ;
     Route: 050
  1118. VEDOLIZUMAB [Suspect]
     Active Substance: VEDOLIZUMAB
     Dosage: UNK; ;
     Route: 050
  1119. VEDOLIZUMAB [Suspect]
     Active Substance: VEDOLIZUMAB
     Dosage: UNK; ;
     Route: 050
  1120. VEDOLIZUMAB [Suspect]
     Active Substance: VEDOLIZUMAB
     Dosage: UNK; ;
     Route: 050
  1121. VEDOLIZUMAB [Suspect]
     Active Substance: VEDOLIZUMAB
     Dosage: UNK; ;
     Route: 050
  1122. VEDOLIZUMAB [Suspect]
     Active Substance: VEDOLIZUMAB
     Dosage: UNK; ;
     Route: 050
  1123. VEDOLIZUMAB [Suspect]
     Active Substance: VEDOLIZUMAB
     Dosage: UNK; ;
     Route: 050
  1124. VEDOLIZUMAB [Suspect]
     Active Substance: VEDOLIZUMAB
     Dosage: UNK; ;
     Route: 050
  1125. VEDOLIZUMAB [Suspect]
     Active Substance: VEDOLIZUMAB
     Dosage: UNK
     Route: 065
     Dates: start: 20211112
  1126. VEDOLIZUMAB [Suspect]
     Active Substance: VEDOLIZUMAB
     Dosage: UNK OTHER
     Route: 050
     Dates: start: 20211112
  1127. VEDOLIZUMAB [Suspect]
     Active Substance: VEDOLIZUMAB
     Dosage: UNK OTHER
     Route: 050
     Dates: start: 20211112
  1128. VEDOLIZUMAB [Suspect]
     Active Substance: VEDOLIZUMAB
     Dosage: UNK OTHER
     Route: 050
     Dates: start: 20211112
  1129. VEDOLIZUMAB [Suspect]
     Active Substance: VEDOLIZUMAB
     Dosage: SOLUTION FOR INJECTION
     Route: 050
     Dates: start: 20211112
  1130. VEDOLIZUMAB [Suspect]
     Active Substance: VEDOLIZUMAB
     Dosage: SOLUTION FOR INJECTION
     Route: 050
     Dates: start: 20211112
  1131. VEDOLIZUMAB [Suspect]
     Active Substance: VEDOLIZUMAB
     Dosage: SOLUTION FOR INJECTION
     Route: 050
     Dates: start: 20211112
  1132. VEDOLIZUMAB [Suspect]
     Active Substance: VEDOLIZUMAB
     Dosage: SOLUTION FOR INJECTION
     Route: 050
     Dates: start: 20211112
  1133. VEDOLIZUMAB [Suspect]
     Active Substance: VEDOLIZUMAB
     Dosage: SOLUTION FOR INJECTION
     Route: 050
     Dates: start: 20211112
  1134. VEDOLIZUMAB [Suspect]
     Active Substance: VEDOLIZUMAB
     Dosage: SOLUTION FOR INJECTION
     Route: 050
     Dates: start: 20211112
  1135. VEDOLIZUMAB [Suspect]
     Active Substance: VEDOLIZUMAB
     Dosage: SOLUTION FOR INJECTION
     Route: 050
     Dates: start: 20211112
  1136. VEDOLIZUMAB [Suspect]
     Active Substance: VEDOLIZUMAB
     Dosage: SOLUTION FOR INJECTION
     Route: 050
     Dates: start: 20211112
  1137. VEDOLIZUMAB [Suspect]
     Active Substance: VEDOLIZUMAB
     Dosage: SOLUTION FOR INJECTION
     Route: 050
     Dates: start: 20211112
  1138. VEDOLIZUMAB [Suspect]
     Active Substance: VEDOLIZUMAB
     Dosage: SOLUTION FOR INJECTION
     Route: 050
     Dates: start: 20211112
  1139. VEDOLIZUMAB [Suspect]
     Active Substance: VEDOLIZUMAB
     Dosage: SOLUTION FOR INJECTION
     Route: 050
     Dates: start: 20211112
  1140. VEDOLIZUMAB [Suspect]
     Active Substance: VEDOLIZUMAB
     Dosage: SOLUTION FOR INJECTION
     Route: 050
     Dates: start: 20211112
  1141. VEDOLIZUMAB [Suspect]
     Active Substance: VEDOLIZUMAB
     Dosage: SOLUTION FOR INJECTION
     Route: 050
     Dates: start: 20211112
  1142. VEDOLIZUMAB [Suspect]
     Active Substance: VEDOLIZUMAB
     Dosage: SOLUTION FOR INJECTION
     Route: 050
     Dates: start: 20211112
  1143. VEDOLIZUMAB [Suspect]
     Active Substance: VEDOLIZUMAB
     Dosage: SOLUTION FOR INJECTION
     Route: 050
     Dates: start: 20211112
  1144. VEDOLIZUMAB [Suspect]
     Active Substance: VEDOLIZUMAB
     Dosage: SOLUTION FOR INJECTION
     Route: 050
     Dates: start: 20211112
  1145. VEDOLIZUMAB [Suspect]
     Active Substance: VEDOLIZUMAB
     Dosage: SOLUTION FOR INJECTION
     Route: 050
     Dates: start: 20211112
  1146. VEDOLIZUMAB [Suspect]
     Active Substance: VEDOLIZUMAB
     Dosage: UNK; ADDITIONAL INFORMATION ON DRUG (FREE TEXT): ADALIMUMAB SOLUTION FOR INJECTION, SINGLE DOSE PEN
     Route: 050
  1147. VEDOLIZUMAB [Suspect]
     Active Substance: VEDOLIZUMAB
     Dosage: UNK; ADDITIONAL INFORMATION ON DRUG (FREE TEXT): ADALIMUMAB SOLUTION FOR INJECTION, SINGLE DOSE PEN
     Route: 065
     Dates: start: 20211112
  1148. VEDOLIZUMAB [Suspect]
     Active Substance: VEDOLIZUMAB
     Indication: Crohn^s disease
     Dosage: SOLUTION FOR INJECTION
     Route: 050
  1149. VEDOLIZUMAB [Suspect]
     Active Substance: VEDOLIZUMAB
     Dosage: SOLUTION FOR INJECTION
     Route: 050
  1150. VEDOLIZUMAB [Suspect]
     Active Substance: VEDOLIZUMAB
     Dosage: SOLUTION FOR INJECTION
     Route: 050
  1151. VEDOLIZUMAB [Suspect]
     Active Substance: VEDOLIZUMAB
     Dosage: SOLUTION FOR INJECTION
     Route: 050
  1152. VEDOLIZUMAB [Suspect]
     Active Substance: VEDOLIZUMAB
     Dosage: UNK OTHER
     Route: 050
  1153. VEDOLIZUMAB [Suspect]
     Active Substance: VEDOLIZUMAB
     Dosage: SOLUTION FOR INJECTION
     Route: 050
  1154. VEDOLIZUMAB [Suspect]
     Active Substance: VEDOLIZUMAB
     Dosage: SOLUTION FOR INJECTION
     Route: 050
  1155. VEDOLIZUMAB [Suspect]
     Active Substance: VEDOLIZUMAB
     Dosage: SOLUTION FOR INJECTION
     Route: 050
  1156. VEDOLIZUMAB [Suspect]
     Active Substance: VEDOLIZUMAB
     Dosage: SOLUTION FOR INJECTION
     Route: 050
  1157. VEDOLIZUMAB [Suspect]
     Active Substance: VEDOLIZUMAB
     Dosage: SOLUTION FOR INJECTION
     Route: 050
  1158. VEDOLIZUMAB [Suspect]
     Active Substance: VEDOLIZUMAB
     Dosage: SOLUTION FOR INJECTION
     Route: 050
  1159. VEDOLIZUMAB [Suspect]
     Active Substance: VEDOLIZUMAB
     Dosage: UNK OTHER
     Route: 050
  1160. VEDOLIZUMAB [Suspect]
     Active Substance: VEDOLIZUMAB
     Dosage: SOLUTION FOR INJECTION
     Route: 050
  1161. VEDOLIZUMAB [Suspect]
     Active Substance: VEDOLIZUMAB
     Dosage: SOLUTION FOR INJECTION
     Route: 050
  1162. VEDOLIZUMAB [Suspect]
     Active Substance: VEDOLIZUMAB
     Dosage: SOLUTION FOR INJECTION
     Route: 050
  1163. VEDOLIZUMAB [Suspect]
     Active Substance: VEDOLIZUMAB
     Dosage: SOLUTION FOR INJECTION
     Route: 050
  1164. VEDOLIZUMAB [Suspect]
     Active Substance: VEDOLIZUMAB
     Dosage: SOLUTION FOR INJECTION
     Route: 050
  1165. VEDOLIZUMAB [Suspect]
     Active Substance: VEDOLIZUMAB
     Dosage: SOLUTION FOR INJECTION
     Route: 050
  1166. VEDOLIZUMAB [Suspect]
     Active Substance: VEDOLIZUMAB
     Dosage: UNK OTHER
     Route: 050
  1167. VEDOLIZUMAB [Suspect]
     Active Substance: VEDOLIZUMAB
     Dosage: SOLUTION FOR INJECTION
     Route: 050
  1168. VEDOLIZUMAB [Suspect]
     Active Substance: VEDOLIZUMAB
     Dosage: SOLUTION FOR INJECTION
     Route: 050
  1169. VEDOLIZUMAB [Suspect]
     Active Substance: VEDOLIZUMAB
     Dosage: SOLUTION FOR INJECTION
     Route: 050
  1170. VEDOLIZUMAB [Suspect]
     Active Substance: VEDOLIZUMAB
     Dosage: SOLUTION FOR INJECTION
     Route: 050
  1171. VEDOLIZUMAB [Suspect]
     Active Substance: VEDOLIZUMAB
     Dosage: SOLUTION FOR INJECTION
     Route: 050
  1172. VEDOLIZUMAB [Suspect]
     Active Substance: VEDOLIZUMAB
     Dosage: SOLUTION FOR INJECTION
     Route: 050
  1173. VEDOLIZUMAB [Suspect]
     Active Substance: VEDOLIZUMAB
     Dosage: SOLUTION FOR INJECTION
     Route: 050
  1174. VEDOLIZUMAB [Suspect]
     Active Substance: VEDOLIZUMAB
     Dosage: SOLUTION FOR INJECTION
     Route: 050
  1175. VEDOLIZUMAB [Suspect]
     Active Substance: VEDOLIZUMAB
     Dosage: UNKNOWN, UNK, SINGLE DOSE PEN
     Route: 050
  1176. VEDOLIZUMAB [Suspect]
     Active Substance: VEDOLIZUMAB
     Dosage: UNKNOWN, UNK, SINGLE DOSE PEN
     Route: 050
  1177. VEDOLIZUMAB [Suspect]
     Active Substance: VEDOLIZUMAB
     Dosage: SOLUTION FOR INJECTION
     Route: 065
  1178. VEDOLIZUMAB [Suspect]
     Active Substance: VEDOLIZUMAB
     Dosage: SOLUTION FOR INJECTION
     Route: 065
  1179. VEDOLIZUMAB [Suspect]
     Active Substance: VEDOLIZUMAB
     Dosage: SOLUTION FOR INJECTION
     Route: 065
  1180. VEDOLIZUMAB [Suspect]
     Active Substance: VEDOLIZUMAB
     Dosage: SOLUTION FOR INJECTION
     Route: 065
  1181. VEDOLIZUMAB [Suspect]
     Active Substance: VEDOLIZUMAB
     Dosage: SOLUTION FOR INJECTION
     Route: 065
  1182. VEDOLIZUMAB [Suspect]
     Active Substance: VEDOLIZUMAB
     Dosage: SOLUTION FOR INJECTION
     Route: 065
  1183. VEDOLIZUMAB [Suspect]
     Active Substance: VEDOLIZUMAB
     Dosage: SOLUTION FOR INJECTION
     Route: 065
  1184. VEDOLIZUMAB [Suspect]
     Active Substance: VEDOLIZUMAB
     Dosage: SOLUTION FOR INJECTION
     Route: 065
  1185. VEDOLIZUMAB [Suspect]
     Active Substance: VEDOLIZUMAB
     Dosage: SOLUTION FOR INJECTION
     Route: 065
  1186. VEDOLIZUMAB [Suspect]
     Active Substance: VEDOLIZUMAB
     Dosage: UNK, OTHER
     Route: 065
  1187. VEDOLIZUMAB [Suspect]
     Active Substance: VEDOLIZUMAB
     Dosage: SOLUTION FOR INJECTION
     Route: 065
  1188. VEDOLIZUMAB [Suspect]
     Active Substance: VEDOLIZUMAB
     Dosage: SOLUTION FOR INJECTION
     Route: 065
  1189. VEDOLIZUMAB [Suspect]
     Active Substance: VEDOLIZUMAB
     Dosage: SOLUTION FOR INJECTION
     Route: 065
  1190. VEDOLIZUMAB [Suspect]
     Active Substance: VEDOLIZUMAB
     Dosage: SOLUTION FOR INJECTION
     Route: 065
  1191. VEDOLIZUMAB [Suspect]
     Active Substance: VEDOLIZUMAB
     Dosage: SOLUTION FOR INJECTION
     Route: 065
  1192. VEDOLIZUMAB [Suspect]
     Active Substance: VEDOLIZUMAB
     Dosage: SOLUTION FOR INJECTION
     Route: 065
  1193. VEDOLIZUMAB [Suspect]
     Active Substance: VEDOLIZUMAB
     Dosage: SOLUTION FOR INJECTION
     Route: 065
  1194. VEDOLIZUMAB [Suspect]
     Active Substance: VEDOLIZUMAB
     Dosage: UNK, OTHER
     Route: 065
  1195. VEDOLIZUMAB [Suspect]
     Active Substance: VEDOLIZUMAB
     Dosage: SOLUTION FOR INJECTION
     Route: 065
  1196. VEDOLIZUMAB [Suspect]
     Active Substance: VEDOLIZUMAB
     Dosage: SOLUTION FOR INJECTION
     Route: 065
  1197. VEDOLIZUMAB [Suspect]
     Active Substance: VEDOLIZUMAB
     Dosage: SOLUTION FOR INJECTION
     Route: 065
  1198. VEDOLIZUMAB [Suspect]
     Active Substance: VEDOLIZUMAB
     Indication: Crohn^s disease
     Dosage: SOLUTION FOR INJECTION
     Route: 065
  1199. VEDOLIZUMAB [Suspect]
     Active Substance: VEDOLIZUMAB
     Dosage: SOLUTION FOR INJECTION
     Route: 065
  1200. VEDOLIZUMAB [Suspect]
     Active Substance: VEDOLIZUMAB
     Dosage: SOLUTION FOR INJECTION
     Route: 065
  1201. VEDOLIZUMAB [Suspect]
     Active Substance: VEDOLIZUMAB
     Dosage: SOLUTION FOR INJECTION
     Route: 065
  1202. VEDOLIZUMAB [Suspect]
     Active Substance: VEDOLIZUMAB
     Dosage: SOLUTION FOR INJECTION
     Route: 065
  1203. VEDOLIZUMAB [Suspect]
     Active Substance: VEDOLIZUMAB
     Dosage: SOLUTION FOR INJECTION
     Route: 065
  1204. VEDOLIZUMAB [Suspect]
     Active Substance: VEDOLIZUMAB
     Dosage: SOLUTION FOR INJECTION
     Route: 065
  1205. VEDOLIZUMAB [Suspect]
     Active Substance: VEDOLIZUMAB
     Dosage: SOLUTION FOR INJECTION
     Route: 065
  1206. VEDOLIZUMAB [Suspect]
     Active Substance: VEDOLIZUMAB
     Dosage: SOLUTION FOR INJECTION
     Route: 065
  1207. VEDOLIZUMAB [Suspect]
     Active Substance: VEDOLIZUMAB
     Dosage: SOLUTION FOR INJECTION
     Route: 065
  1208. VEDOLIZUMAB [Suspect]
     Active Substance: VEDOLIZUMAB
     Dosage: SOLUTION FOR INJECTION
     Route: 065
  1209. VEDOLIZUMAB [Suspect]
     Active Substance: VEDOLIZUMAB
     Dosage: SOLUTION FOR INJECTION
     Route: 065
  1210. VEDOLIZUMAB [Suspect]
     Active Substance: VEDOLIZUMAB
     Dosage: SOLUTION FOR INJECTION
     Route: 065
  1211. VEDOLIZUMAB [Suspect]
     Active Substance: VEDOLIZUMAB
     Dosage: SOLUTION FOR INJECTION
     Route: 065
  1212. VEDOLIZUMAB [Suspect]
     Active Substance: VEDOLIZUMAB
     Dosage: SOLUTION FOR INJECTION
     Route: 065
  1213. VEDOLIZUMAB [Suspect]
     Active Substance: VEDOLIZUMAB
     Dosage: SOLUTION FOR INJECTION
     Route: 065
  1214. VEDOLIZUMAB [Suspect]
     Active Substance: VEDOLIZUMAB
     Dosage: SOLUTION FOR INJECTION
     Route: 065
  1215. VEDOLIZUMAB [Suspect]
     Active Substance: VEDOLIZUMAB
     Dosage: SOLUTION FOR INJECTION
     Route: 065
  1216. VEDOLIZUMAB [Suspect]
     Active Substance: VEDOLIZUMAB
     Dosage: SOLUTION FOR INJECTION
     Route: 065
  1217. VEDOLIZUMAB [Suspect]
     Active Substance: VEDOLIZUMAB
     Dosage: SOLUTION FOR INJECTION
     Route: 065
  1218. VEDOLIZUMAB [Suspect]
     Active Substance: VEDOLIZUMAB
     Dosage: SOLUTION FOR INJECTION
     Route: 065
  1219. VEDOLIZUMAB [Suspect]
     Active Substance: VEDOLIZUMAB
     Dosage: SOLUTION FOR INJECTION
     Route: 065
  1220. VEDOLIZUMAB [Suspect]
     Active Substance: VEDOLIZUMAB
     Dosage: SOLUTION FOR INJECTION
     Route: 065
  1221. VEDOLIZUMAB [Suspect]
     Active Substance: VEDOLIZUMAB
     Dosage: SOLUTION FOR INJECTION
     Route: 065
  1222. VEDOLIZUMAB [Suspect]
     Active Substance: VEDOLIZUMAB
     Dosage: SOLUTION FOR INJECTION
     Route: 065
  1223. VEDOLIZUMAB [Suspect]
     Active Substance: VEDOLIZUMAB
     Dosage: SOLUTION FOR INJECTION
     Route: 065
  1224. VEDOLIZUMAB [Suspect]
     Active Substance: VEDOLIZUMAB
     Dosage: SOLUTION FOR INJECTION
     Route: 065
  1225. VEDOLIZUMAB [Suspect]
     Active Substance: VEDOLIZUMAB
     Dosage: UNK
     Route: 050
  1226. VEDOLIZUMAB [Suspect]
     Active Substance: VEDOLIZUMAB
     Dosage: UNK
     Route: 050
  1227. VEDOLIZUMAB [Suspect]
     Active Substance: VEDOLIZUMAB
     Dosage: UNK
     Route: 050
  1228. VEDOLIZUMAB [Suspect]
     Active Substance: VEDOLIZUMAB
     Dosage: UNK
     Route: 050
  1229. VEDOLIZUMAB [Suspect]
     Active Substance: VEDOLIZUMAB
     Dosage: UNK
     Route: 050
  1230. VEDOLIZUMAB [Suspect]
     Active Substance: VEDOLIZUMAB
     Dosage: UNK
     Route: 050
  1231. VEDOLIZUMAB [Suspect]
     Active Substance: VEDOLIZUMAB
     Dosage: UNK
     Route: 050
  1232. VEDOLIZUMAB [Suspect]
     Active Substance: VEDOLIZUMAB
     Dosage: UNK
     Route: 050
  1233. VEDOLIZUMAB [Suspect]
     Active Substance: VEDOLIZUMAB
     Dosage: UNK
     Route: 050
  1234. RIFAXIMIN [Suspect]
     Active Substance: RIFAXIMIN
     Indication: Product used for unknown indication
     Dosage: UNKNOWN
     Route: 050
  1235. RIFAXIMIN [Suspect]
     Active Substance: RIFAXIMIN
     Dosage: UNKNOWN
     Route: 050
  1236. RIFAXIMIN [Suspect]
     Active Substance: RIFAXIMIN
     Dosage: UNKNOWN
     Route: 050
  1237. RIFAXIMIN [Suspect]
     Active Substance: RIFAXIMIN
     Dosage: UNKNOWN
     Route: 050
  1238. RIFAXIMIN [Suspect]
     Active Substance: RIFAXIMIN
     Dosage: UNK
     Route: 050
  1239. RIFAXIMIN [Suspect]
     Active Substance: RIFAXIMIN
     Dosage: UNKNOWN
     Route: 050
  1240. RIFAXIMIN [Suspect]
     Active Substance: RIFAXIMIN
     Dosage: UNK
     Route: 065
  1241. RIFAXIMIN [Suspect]
     Active Substance: RIFAXIMIN
     Dosage: UNK
     Route: 065
  1242. RIFAXIMIN [Suspect]
     Active Substance: RIFAXIMIN
     Dosage: UNK
     Route: 065
  1243. RIFAXIMIN [Suspect]
     Active Substance: RIFAXIMIN
     Dosage: UNK
     Route: 065
  1244. RIFAXIMIN [Suspect]
     Active Substance: RIFAXIMIN
     Dosage: UNK
     Route: 065
  1245. RIFAXIMIN [Suspect]
     Active Substance: RIFAXIMIN
     Dosage: UNK
     Route: 050
  1246. RIFAXIMIN [Suspect]
     Active Substance: RIFAXIMIN
     Dosage: UNK
     Route: 050
  1247. RIFAXIMIN [Suspect]
     Active Substance: RIFAXIMIN
     Dosage: UNK
     Route: 050
  1248. RIFAXIMIN [Suspect]
     Active Substance: RIFAXIMIN
     Dosage: UNK
     Route: 050
  1249. RIFAXIMIN [Suspect]
     Active Substance: RIFAXIMIN
     Dosage: UNK
     Route: 050
  1250. RIFAXIMIN [Suspect]
     Active Substance: RIFAXIMIN
     Dosage: UNKNOWN
     Route: 050
  1251. RIFAXIMIN [Suspect]
     Active Substance: RIFAXIMIN
     Dosage: UNK
     Route: 050
  1252. RIFAXIMIN [Suspect]
     Active Substance: RIFAXIMIN
     Dosage: UNK
     Route: 050
  1253. RIFAXIMIN [Suspect]
     Active Substance: RIFAXIMIN
     Dosage: UNK
     Route: 050
  1254. RIFAXIMIN [Suspect]
     Active Substance: RIFAXIMIN
     Dosage: UNK
     Route: 050
  1255. RIFAXIMIN [Suspect]
     Active Substance: RIFAXIMIN
     Dosage: UNK
     Route: 050
  1256. RIFAXIMIN [Suspect]
     Active Substance: RIFAXIMIN
     Dosage: UNK
     Route: 050
  1257. RIFAXIMIN [Suspect]
     Active Substance: RIFAXIMIN
     Dosage: UNKNOWN
     Route: 050
  1258. RIFAXIMIN [Suspect]
     Active Substance: RIFAXIMIN
     Dosage: UNKNOWN
     Route: 050
  1259. RIFAXIMIN [Suspect]
     Active Substance: RIFAXIMIN
     Dosage: UNKNOWN
     Route: 050
  1260. RIFAXIMIN [Suspect]
     Active Substance: RIFAXIMIN
     Dosage: UNKNOWN
     Route: 050
  1261. RIFAXIMIN [Suspect]
     Active Substance: RIFAXIMIN
     Dosage: UNKNOWN
     Route: 050
  1262. RIFAXIMIN [Suspect]
     Active Substance: RIFAXIMIN
     Dosage: UNK; ; ADDITIONAL INFO: ROUTE:OTHER
     Route: 050
  1263. RIFAXIMIN [Suspect]
     Active Substance: RIFAXIMIN
     Dosage: UNK, OTHER (ADALIMUMAB SOLUTION FOR INJECTION, SINGLE DOSE PEN)
     Route: 065
  1264. RIFAXIMIN [Suspect]
     Active Substance: RIFAXIMIN
     Dosage: UNK, OTHER
     Route: 065
  1265. RIFAXIMIN [Suspect]
     Active Substance: RIFAXIMIN
     Dosage: UNK, OTHER
     Route: 065
  1266. RIFAXIMIN [Suspect]
     Active Substance: RIFAXIMIN
     Dosage: UNK, OTHER
     Route: 065
  1267. RIFAXIMIN [Suspect]
     Active Substance: RIFAXIMIN
     Dosage: UNK, OTHER
     Route: 065
  1268. RIFAXIMIN [Suspect]
     Active Substance: RIFAXIMIN
     Dosage: UNK, OTHER
     Route: 065
  1269. RIFAXIMIN [Suspect]
     Active Substance: RIFAXIMIN
     Dosage: UNK, OTHER
     Route: 065
  1270. RIFAXIMIN [Suspect]
     Active Substance: RIFAXIMIN
     Dosage: UNK, OTHER
     Route: 065
  1271. RIFAXIMIN [Suspect]
     Active Substance: RIFAXIMIN
     Dosage: UNK, OTHER
     Route: 065
  1272. RIFAXIMIN [Suspect]
     Active Substance: RIFAXIMIN
     Dosage: UNK, OTHER
     Route: 065
  1273. RIFAXIMIN [Suspect]
     Active Substance: RIFAXIMIN
     Dosage: UNK, OTHER
     Route: 065
  1274. RIFAXIMIN [Suspect]
     Active Substance: RIFAXIMIN
     Dosage: UNK, OTHER
     Route: 065
  1275. RIFAXIMIN [Suspect]
     Active Substance: RIFAXIMIN
     Dosage: UNK
     Route: 065
  1276. RIFAXIMIN [Suspect]
     Active Substance: RIFAXIMIN
     Dosage: UNK
     Route: 065
  1277. RIFAXIMIN [Suspect]
     Active Substance: RIFAXIMIN
     Dosage: UNK
     Route: 065
  1278. RIFAXIMIN [Suspect]
     Active Substance: RIFAXIMIN
     Dosage: UNK
     Route: 065
  1279. RIFAXIMIN [Suspect]
     Active Substance: RIFAXIMIN
     Dosage: UNK
     Route: 065
  1280. RIFAXIMIN [Suspect]
     Active Substance: RIFAXIMIN
     Dosage: UNK
     Route: 065
  1281. RIFAXIMIN [Suspect]
     Active Substance: RIFAXIMIN
     Dosage: UNK
     Route: 065
  1282. RIFAXIMIN [Suspect]
     Active Substance: RIFAXIMIN
     Dosage: UNKNOWN; ;
     Route: 050
  1283. RIFAXIMIN [Suspect]
     Active Substance: RIFAXIMIN
     Dosage: UNKNOWN; ;
     Route: 050
  1284. RIFAXIMIN [Suspect]
     Active Substance: RIFAXIMIN
     Indication: Product used for unknown indication
     Dosage: UNK, ADALIMUMAB SOLUTION FOR INJECTION, SINGLE DOSE PEN
     Route: 050
  1285. RIFAXIMIN [Suspect]
     Active Substance: RIFAXIMIN
     Dosage: UNK, ADALIMUMAB SOLUTION FOR INJECTION, SINGLE DOSE PEN
     Route: 050
  1286. RIFAXIMIN [Suspect]
     Active Substance: RIFAXIMIN
     Dosage: UNK, ADALIMUMAB SOLUTION FOR INJECTION, SINGLE DOSE PEN
     Route: 050
  1287. RIFAXIMIN [Suspect]
     Active Substance: RIFAXIMIN
     Dosage: UNK, ADALIMUMAB SOLUTION FOR INJECTION, SINGLE DOSE PEN
     Route: 050
  1288. RIFAXIMIN [Suspect]
     Active Substance: RIFAXIMIN
     Dosage: UNK, ADALIMUMAB SOLUTION FOR INJECTION, SINGLE DOSE PEN
     Route: 050
  1289. RIFAXIMIN [Suspect]
     Active Substance: RIFAXIMIN
     Dosage: UNK, ADALIMUMAB SOLUTION FOR INJECTION, SINGLE DOSE PEN
     Route: 050
  1290. RIFAXIMIN [Suspect]
     Active Substance: RIFAXIMIN
     Dosage: UNKNOWN
     Route: 050
  1291. RIFAXIMIN [Suspect]
     Active Substance: RIFAXIMIN
     Dosage: UNKNOWN
     Route: 050
  1292. RIFAXIMIN [Suspect]
     Active Substance: RIFAXIMIN
     Dosage: UNKNOWN
     Route: 050
  1293. RIFAXIMIN [Suspect]
     Active Substance: RIFAXIMIN
     Dosage: DOSE FORM: 82
     Route: 050
  1294. RIFAXIMIN [Suspect]
     Active Substance: RIFAXIMIN
     Dosage: DOSE FORM: 82
     Route: 050
  1295. RIFAXIMIN [Suspect]
     Active Substance: RIFAXIMIN
     Dosage: DOSE FORM: 82
     Route: 050
  1296. RIFAXIMIN [Suspect]
     Active Substance: RIFAXIMIN
     Dosage: DOSE FORM: 82
     Route: 050
  1297. RIFAXIMIN [Suspect]
     Active Substance: RIFAXIMIN
     Dosage: DOSE FORM: 82
     Route: 050
  1298. RIFAXIMIN [Suspect]
     Active Substance: RIFAXIMIN
     Dosage: DOSE FORM: 82
     Route: 050
  1299. RIFAXIMIN [Suspect]
     Active Substance: RIFAXIMIN
     Dosage: DOSE FORM: 82
     Route: 050
  1300. RIFAXIMIN [Suspect]
     Active Substance: RIFAXIMIN
     Dosage: DOSE FORM: 82
     Route: 050
  1301. RIFAXIMIN [Suspect]
     Active Substance: RIFAXIMIN
     Dosage: DOSE FORM: 82
     Route: 050
  1302. RIFAXIMIN [Suspect]
     Active Substance: RIFAXIMIN
     Dosage: DOSE FORM: 82
     Route: 050
  1303. RIFAXIMIN [Suspect]
     Active Substance: RIFAXIMIN
     Dosage: DOSE FORM: 82
     Route: 050
  1304. RIFAXIMIN [Suspect]
     Active Substance: RIFAXIMIN
     Dosage: DOSE FORM: 82
     Route: 050
  1305. RIFAXIMIN [Suspect]
     Active Substance: RIFAXIMIN
     Dosage: UNK, OTHER / ADALIMUMAB SOLUTION FOR INJECTION, SINGLE DOSE PEN
     Route: 065
  1306. RIFAXIMIN [Suspect]
     Active Substance: RIFAXIMIN
     Dosage: UNK
     Route: 065
  1307. RIFAXIMIN [Suspect]
     Active Substance: RIFAXIMIN
     Dosage: UNK
     Route: 065
  1308. RIFAXIMIN [Suspect]
     Active Substance: RIFAXIMIN
     Dosage: UNK
     Route: 065
  1309. RIFAXIMIN [Suspect]
     Active Substance: RIFAXIMIN
     Dosage: UNKNOWN
     Route: 050
  1310. RIFAXIMIN [Suspect]
     Active Substance: RIFAXIMIN
     Dosage: UNKNOWN
     Route: 050
  1311. RIFAXIMIN [Suspect]
     Active Substance: RIFAXIMIN
     Dosage: UNKNOWN
     Route: 050
  1312. RIFAXIMIN [Suspect]
     Active Substance: RIFAXIMIN
     Dosage: UNKNOWN
     Route: 050
  1313. RIFAXIMIN [Suspect]
     Active Substance: RIFAXIMIN
     Dosage: UNKNOWN
     Route: 050
  1314. RIFAXIMIN [Suspect]
     Active Substance: RIFAXIMIN
     Dosage: UNKNOWN
     Route: 050
  1315. RIFAXIMIN [Suspect]
     Active Substance: RIFAXIMIN
     Dosage: UNKNOWN
     Route: 050
  1316. RIFAXIMIN [Suspect]
     Active Substance: RIFAXIMIN
     Dosage: UNKNOWN
     Route: 050
  1317. RIFAXIMIN [Suspect]
     Active Substance: RIFAXIMIN
     Dosage: UNKNOWN
     Route: 050
  1318. RIFAXIMIN [Suspect]
     Active Substance: RIFAXIMIN
     Dosage: UNK
     Route: 050
  1319. RIFAXIMIN [Suspect]
     Active Substance: RIFAXIMIN
     Dosage: UNK
     Route: 050
  1320. RIFAXIMIN [Suspect]
     Active Substance: RIFAXIMIN
     Dosage: UNKNOWN
     Route: 050
  1321. RIFAXIMIN [Suspect]
     Active Substance: RIFAXIMIN
     Dosage: UNKNOWN
     Route: 050
  1322. RIFAXIMIN [Suspect]
     Active Substance: RIFAXIMIN
     Dosage: UNKNOWN
     Route: 050
  1323. RIFAXIMIN [Suspect]
     Active Substance: RIFAXIMIN
     Dosage: UNK
     Route: 065
  1324. RIFAXIMIN [Suspect]
     Active Substance: RIFAXIMIN
     Dosage: UNK
     Route: 065
  1325. RIFAXIMIN [Suspect]
     Active Substance: RIFAXIMIN
     Dosage: UNK
     Route: 065
  1326. RIFAXIMIN [Suspect]
     Active Substance: RIFAXIMIN
     Dosage: UNK
     Route: 065
  1327. RIFAXIMIN [Suspect]
     Active Substance: RIFAXIMIN
     Dosage: UNK
     Route: 065
  1328. RIFAXIMIN [Suspect]
     Active Substance: RIFAXIMIN
     Dosage: UNK
     Route: 065
  1329. RIFAXIMIN [Suspect]
     Active Substance: RIFAXIMIN
     Dosage: UNK
     Route: 065
  1330. RIFAXIMIN [Suspect]
     Active Substance: RIFAXIMIN
     Dosage: UNK
     Route: 065
  1331. RIFAXIMIN [Suspect]
     Active Substance: RIFAXIMIN
     Dosage: UNK
     Route: 065
  1332. RIFAXIMIN [Suspect]
     Active Substance: RIFAXIMIN
     Dosage: UNK
     Route: 065
  1333. RIFAXIMIN [Suspect]
     Active Substance: RIFAXIMIN
     Dosage: UNK
     Route: 065
  1334. RIFAXIMIN [Suspect]
     Active Substance: RIFAXIMIN
     Indication: Product used for unknown indication
     Dosage: UNKNOWN
     Route: 065
  1335. RIFAXIMIN [Suspect]
     Active Substance: RIFAXIMIN
     Dosage: UNKNOWN
     Route: 065
  1336. RIFAXIMIN [Suspect]
     Active Substance: RIFAXIMIN
     Dosage: UNKNOWN
     Route: 065
  1337. RIFAXIMIN [Suspect]
     Active Substance: RIFAXIMIN
     Dosage: UNKNOWN
     Route: 065
  1338. RIFAXIMIN [Suspect]
     Active Substance: RIFAXIMIN
     Dosage: UNKNOWN
     Route: 065
  1339. RIFAXIMIN [Suspect]
     Active Substance: RIFAXIMIN
     Dosage: UNKNOWN
     Route: 065
  1340. RIFAXIMIN [Suspect]
     Active Substance: RIFAXIMIN
     Dosage: UNKNOWN
     Route: 065
  1341. RIFAXIMIN [Suspect]
     Active Substance: RIFAXIMIN
     Dosage: UNKNOWN
     Route: 065
  1342. RIFAXIMIN [Suspect]
     Active Substance: RIFAXIMIN
     Dosage: UNKNOWN
     Route: 065
  1343. RIFAXIMIN [Suspect]
     Active Substance: RIFAXIMIN
     Dosage: UNKNOWN
     Route: 065
  1344. RIFAXIMIN [Suspect]
     Active Substance: RIFAXIMIN
     Dosage: UNKNOWN
     Route: 065
  1345. RIFAXIMIN [Suspect]
     Active Substance: RIFAXIMIN
     Dosage: UNK
     Route: 050
  1346. RIFAXIMIN [Suspect]
     Active Substance: RIFAXIMIN
     Dosage: UNK
     Route: 050
  1347. RIFAXIMIN [Suspect]
     Active Substance: RIFAXIMIN
     Dosage: UNK
     Route: 050
  1348. RIFAXIMIN [Suspect]
     Active Substance: RIFAXIMIN
     Dosage: UNK
     Route: 050
  1349. RIFAXIMIN [Suspect]
     Active Substance: RIFAXIMIN
     Indication: Product used for unknown indication
     Dosage: UNKNOWN; ;
     Route: 050
  1350. RIFAXIMIN [Suspect]
     Active Substance: RIFAXIMIN
     Dosage: UNKNOWN; ;
     Route: 050
  1351. RIFAXIMIN [Suspect]
     Active Substance: RIFAXIMIN
     Dosage: UNKNOWN; ;
     Route: 050
  1352. RIFAXIMIN [Suspect]
     Active Substance: RIFAXIMIN
     Dosage: UNKNOWN; ;
     Route: 050
  1353. RIFAXIMIN [Suspect]
     Active Substance: RIFAXIMIN
     Dosage: UNK; ;
     Route: 050
  1354. RIFAXIMIN [Suspect]
     Active Substance: RIFAXIMIN
     Dosage: UNK
     Route: 050
  1355. RIFAXIMIN [Suspect]
     Active Substance: RIFAXIMIN
     Dosage: UNKNOWN
     Route: 065
  1356. RIFAXIMIN [Suspect]
     Active Substance: RIFAXIMIN
     Dosage: UNKNOWN
     Route: 065
  1357. RIFAXIMIN [Suspect]
     Active Substance: RIFAXIMIN
     Dosage: UNKNOWN
     Route: 065
  1358. RIFAXIMIN [Suspect]
     Active Substance: RIFAXIMIN
     Dosage: UNKNOWN
     Route: 065
  1359. RIFAXIMIN [Suspect]
     Active Substance: RIFAXIMIN
     Dosage: UNKNOWN
     Route: 065
  1360. RIFAXIMIN [Suspect]
     Active Substance: RIFAXIMIN
     Dosage: UNKNOWN
     Route: 065
  1361. RIFAXIMIN [Suspect]
     Active Substance: RIFAXIMIN
     Dosage: UNKNOWN
     Route: 065
  1362. RIFAXIMIN [Suspect]
     Active Substance: RIFAXIMIN
     Dosage: UNKNOWN
     Route: 065
  1363. RIFAXIMIN [Suspect]
     Active Substance: RIFAXIMIN
     Dosage: UNKNOWN
     Route: 065
  1364. RIFAXIMIN [Suspect]
     Active Substance: RIFAXIMIN
     Dosage: UNKNOWN
     Route: 065
  1365. RIFAXIMIN [Suspect]
     Active Substance: RIFAXIMIN
     Dosage: UNKNOWN
     Route: 065
  1366. RIFAXIMIN [Suspect]
     Active Substance: RIFAXIMIN
     Dosage: UNKNOWN
     Route: 065
  1367. RIFAXIMIN [Suspect]
     Active Substance: RIFAXIMIN
     Dosage: UNKNOWN
     Route: 065
  1368. RIFAXIMIN [Suspect]
     Active Substance: RIFAXIMIN
     Dosage: UNKNOWN
     Route: 065
  1369. RIFAXIMIN [Suspect]
     Active Substance: RIFAXIMIN
     Dosage: UNKNOWN
     Route: 065
  1370. RIFAXIMIN [Suspect]
     Active Substance: RIFAXIMIN
     Dosage: UNKNOWN
     Route: 065
  1371. RIFAXIMIN [Suspect]
     Active Substance: RIFAXIMIN
     Dosage: UNKNOWN
     Route: 065
  1372. RIFAXIMIN [Suspect]
     Active Substance: RIFAXIMIN
     Dosage: UNKNOWN
     Route: 065
  1373. RIFAXIMIN [Suspect]
     Active Substance: RIFAXIMIN
     Dosage: UNKNOWN
     Route: 065
  1374. RIFAXIMIN [Suspect]
     Active Substance: RIFAXIMIN
     Dosage: UNKNOWN
     Route: 065
  1375. RIFAXIMIN [Suspect]
     Active Substance: RIFAXIMIN
     Indication: Product used for unknown indication
     Dosage: UNK; ;
     Route: 050
  1376. RIFAXIMIN [Suspect]
     Active Substance: RIFAXIMIN
     Indication: Product used for unknown indication
     Dosage: UNK
     Route: 050
  1377. RIFAXIMIN [Suspect]
     Active Substance: RIFAXIMIN
     Dosage: UNK
     Route: 050
  1378. RIFAXIMIN [Suspect]
     Active Substance: RIFAXIMIN
     Dosage: UNK
     Route: 050
  1379. RIFAXIMIN [Suspect]
     Active Substance: RIFAXIMIN
     Dosage: UNK
     Route: 050
  1380. RIFAXIMIN [Suspect]
     Active Substance: RIFAXIMIN
     Dosage: UNK
     Route: 050
  1381. RIFAXIMIN [Suspect]
     Active Substance: RIFAXIMIN
     Dosage: UNK
     Route: 050
  1382. RIFAXIMIN [Suspect]
     Active Substance: RIFAXIMIN
     Dosage: UNK
     Route: 050
  1383. RIFAXIMIN [Suspect]
     Active Substance: RIFAXIMIN
     Dosage: UNK
     Route: 050
  1384. RIFAXIMIN [Suspect]
     Active Substance: RIFAXIMIN
     Dosage: UNK
     Route: 050
  1385. RIFAXIMIN [Suspect]
     Active Substance: RIFAXIMIN
     Dosage: UNK
     Route: 050
  1386. RIFAXIMIN [Suspect]
     Active Substance: RIFAXIMIN
     Dosage: UNK
     Route: 050
  1387. RIFAXIMIN [Suspect]
     Active Substance: RIFAXIMIN
     Dosage: UNK
     Route: 050
  1388. RIFAXIMIN [Suspect]
     Active Substance: RIFAXIMIN
     Dosage: UNK
     Route: 050
  1389. RIFAXIMIN [Suspect]
     Active Substance: RIFAXIMIN
     Dosage: UNK
     Route: 050
  1390. RIFAXIMIN [Suspect]
     Active Substance: RIFAXIMIN
     Dosage: UNK
     Route: 050
  1391. RIFAXIMIN [Suspect]
     Active Substance: RIFAXIMIN
     Dosage: UNK
     Route: 050
  1392. RIFAXIMIN [Suspect]
     Active Substance: RIFAXIMIN
     Dosage: UNK
     Route: 050
  1393. RIFAXIMIN [Suspect]
     Active Substance: RIFAXIMIN
     Dosage: UNK
     Route: 050
  1394. RIFAXIMIN [Suspect]
     Active Substance: RIFAXIMIN
     Dosage: UNK
     Route: 050
  1395. RIFAXIMIN [Suspect]
     Active Substance: RIFAXIMIN
     Dosage: UNK
     Route: 050
  1396. RIFAXIMIN [Suspect]
     Active Substance: RIFAXIMIN
     Dosage: UNK
     Route: 050
  1397. RIFAXIMIN [Suspect]
     Active Substance: RIFAXIMIN
     Dosage: UNK
     Route: 050
  1398. RIFAXIMIN [Suspect]
     Active Substance: RIFAXIMIN
     Dosage: UNK
     Route: 050
  1399. RIFAXIMIN [Suspect]
     Active Substance: RIFAXIMIN
     Dosage: UNK
     Route: 050
  1400. RIFAXIMIN [Suspect]
     Active Substance: RIFAXIMIN
     Dosage: UNK
     Route: 050
  1401. RIFAXIMIN [Suspect]
     Active Substance: RIFAXIMIN
     Dosage: UNK
     Route: 050
  1402. RIFAXIMIN [Suspect]
     Active Substance: RIFAXIMIN
     Dosage: UNK
     Route: 050
  1403. RIFAXIMIN [Suspect]
     Active Substance: RIFAXIMIN
     Dosage: UNK
     Route: 050
  1404. RIFAXIMIN [Suspect]
     Active Substance: RIFAXIMIN
     Dosage: UNK
     Route: 050
  1405. RIFAXIMIN [Suspect]
     Active Substance: RIFAXIMIN
     Dosage: UNK
     Route: 050
  1406. RIFAXIMIN [Suspect]
     Active Substance: RIFAXIMIN
     Dosage: UNK
     Route: 050
  1407. RIFAXIMIN [Suspect]
     Active Substance: RIFAXIMIN
     Dosage: UNK
     Route: 050
  1408. RIFAXIMIN [Suspect]
     Active Substance: RIFAXIMIN
     Dosage: UNK
     Route: 050
  1409. RIFAXIMIN [Suspect]
     Active Substance: RIFAXIMIN
     Dosage: UNK
     Route: 050
  1410. RIFAXIMIN [Suspect]
     Active Substance: RIFAXIMIN
     Dosage: UNK
     Route: 050
  1411. RIFAXIMIN [Suspect]
     Active Substance: RIFAXIMIN
     Dosage: UNK
     Route: 050
  1412. RIFAXIMIN [Suspect]
     Active Substance: RIFAXIMIN
     Dosage: UNK
     Route: 050
  1413. RIFAXIMIN [Suspect]
     Active Substance: RIFAXIMIN
     Dosage: UNK
     Route: 050
  1414. RIFAXIMIN [Suspect]
     Active Substance: RIFAXIMIN
     Dosage: UNK
     Route: 050
  1415. RIFAXIMIN [Suspect]
     Active Substance: RIFAXIMIN
     Dosage: UNK
     Route: 050
  1416. RIFAXIMIN [Suspect]
     Active Substance: RIFAXIMIN
     Dosage: UNK
     Route: 050
  1417. RIFAXIMIN [Suspect]
     Active Substance: RIFAXIMIN
     Dosage: UNK
     Route: 050
  1418. RIFAXIMIN [Suspect]
     Active Substance: RIFAXIMIN
     Dosage: UNK
     Route: 050
  1419. RIFAXIMIN [Suspect]
     Active Substance: RIFAXIMIN
     Dosage: UNK
     Route: 050
  1420. RIFAXIMIN [Suspect]
     Active Substance: RIFAXIMIN
     Dosage: UNK
     Route: 050
  1421. RIFAXIMIN [Suspect]
     Active Substance: RIFAXIMIN
     Dosage: UNK
     Route: 050
  1422. RIFAXIMIN [Suspect]
     Active Substance: RIFAXIMIN
     Dosage: UNK
     Route: 050
  1423. RIFAXIMIN [Suspect]
     Active Substance: RIFAXIMIN
     Dosage: UNK
     Route: 050
  1424. RIFAXIMIN [Suspect]
     Active Substance: RIFAXIMIN
     Dosage: UNK
     Route: 050
  1425. RIFAXIMIN [Suspect]
     Active Substance: RIFAXIMIN
     Dosage: UNK
     Route: 050
  1426. RIFAXIMIN [Suspect]
     Active Substance: RIFAXIMIN
     Indication: Product used for unknown indication
     Dosage: UNK
     Route: 050
  1427. RIFAXIMIN [Suspect]
     Active Substance: RIFAXIMIN
     Dosage: UNK
     Route: 050
  1428. RIFAXIMIN [Suspect]
     Active Substance: RIFAXIMIN
     Dosage: UNK
     Route: 050
  1429. RIFAXIMIN [Suspect]
     Active Substance: RIFAXIMIN
     Dosage: UNK
     Route: 050
  1430. RIFAXIMIN [Suspect]
     Active Substance: RIFAXIMIN
     Dosage: UNK
     Route: 050
  1431. RIFAXIMIN [Suspect]
     Active Substance: RIFAXIMIN
     Dosage: UNK
     Route: 050
  1432. RIFAXIMIN [Suspect]
     Active Substance: RIFAXIMIN
     Dosage: UNK
     Route: 050
  1433. RIFAXIMIN [Suspect]
     Active Substance: RIFAXIMIN
     Dosage: UNK
     Route: 050
  1434. RIFAXIMIN [Suspect]
     Active Substance: RIFAXIMIN
     Dosage: UNK
     Route: 050
  1435. RIFAXIMIN [Suspect]
     Active Substance: RIFAXIMIN
     Dosage: UNK
     Route: 050
  1436. RIFAXIMIN [Suspect]
     Active Substance: RIFAXIMIN
     Dosage: UNK
     Route: 050
  1437. RIFAXIMIN [Suspect]
     Active Substance: RIFAXIMIN
     Dosage: UNK
     Route: 050
  1438. RIFAXIMIN [Suspect]
     Active Substance: RIFAXIMIN
     Dosage: UNK
     Route: 050
  1439. RIFAXIMIN [Suspect]
     Active Substance: RIFAXIMIN
     Dosage: UNK
     Route: 050
  1440. RIFAXIMIN [Suspect]
     Active Substance: RIFAXIMIN
     Dosage: UNK
     Route: 050
  1441. RIFAXIMIN [Suspect]
     Active Substance: RIFAXIMIN
     Dosage: UNK
     Route: 050
  1442. RIFAXIMIN [Suspect]
     Active Substance: RIFAXIMIN
     Dosage: UNK
     Route: 050
  1443. RIFAXIMIN [Suspect]
     Active Substance: RIFAXIMIN
     Dosage: UNK
     Route: 050
  1444. RIFAXIMIN [Suspect]
     Active Substance: RIFAXIMIN
     Dosage: UNK
     Route: 050
  1445. RIFAXIMIN [Suspect]
     Active Substance: RIFAXIMIN
     Dosage: UNK
     Route: 050
  1446. RIFAXIMIN [Suspect]
     Active Substance: RIFAXIMIN
     Dosage: UNK
     Route: 050
  1447. RIFAXIMIN [Suspect]
     Active Substance: RIFAXIMIN
     Dosage: UNK
     Route: 050
  1448. RIFAXIMIN [Suspect]
     Active Substance: RIFAXIMIN
     Dosage: UNK
     Route: 050
  1449. RIFAXIMIN [Suspect]
     Active Substance: RIFAXIMIN
     Dosage: UNK
     Route: 050
  1450. RIFAXIMIN [Suspect]
     Active Substance: RIFAXIMIN
     Dosage: UNK
     Route: 050
  1451. RIFAXIMIN [Suspect]
     Active Substance: RIFAXIMIN
     Dosage: UNK
     Route: 050
  1452. RIFAXIMIN [Suspect]
     Active Substance: RIFAXIMIN
     Dosage: UNK
     Route: 050
  1453. RIFAXIMIN [Suspect]
     Active Substance: RIFAXIMIN
     Dosage: UNK
     Route: 050
  1454. RIFAXIMIN [Suspect]
     Active Substance: RIFAXIMIN
     Dosage: UNK
     Route: 050
  1455. RIFAXIMIN [Suspect]
     Active Substance: RIFAXIMIN
     Dosage: UNK
     Route: 050
  1456. RIFAXIMIN [Suspect]
     Active Substance: RIFAXIMIN
     Dosage: UNK
     Route: 050
  1457. RIFAXIMIN [Suspect]
     Active Substance: RIFAXIMIN
     Dosage: UNK
     Route: 050
  1458. RIFAXIMIN [Suspect]
     Active Substance: RIFAXIMIN
     Dosage: UNK
     Route: 050
  1459. RIFAXIMIN [Suspect]
     Active Substance: RIFAXIMIN
     Dosage: UNK
     Route: 050
  1460. RIFAXIMIN [Suspect]
     Active Substance: RIFAXIMIN
     Dosage: UNK
     Route: 050
  1461. RIFAXIMIN [Suspect]
     Active Substance: RIFAXIMIN
     Dosage: UNK
     Route: 050
  1462. RIFAXIMIN [Suspect]
     Active Substance: RIFAXIMIN
     Dosage: UNK
     Route: 050
  1463. RIFAXIMIN [Suspect]
     Active Substance: RIFAXIMIN
     Dosage: UNK
     Route: 050
  1464. RIFAXIMIN [Suspect]
     Active Substance: RIFAXIMIN
     Dosage: UNK
     Route: 050
  1465. RIFAXIMIN [Suspect]
     Active Substance: RIFAXIMIN
     Dosage: UNK
     Route: 050
  1466. RIFAXIMIN [Suspect]
     Active Substance: RIFAXIMIN
     Dosage: UNK
     Route: 065
  1467. RIFAXIMIN [Suspect]
     Active Substance: RIFAXIMIN
     Dosage: UNK
     Route: 065
  1468. RIFAXIMIN [Suspect]
     Active Substance: RIFAXIMIN
     Dosage: UNK
     Route: 065
  1469. RIFAXIMIN [Suspect]
     Active Substance: RIFAXIMIN
     Dosage: UNK
     Route: 065
  1470. RIFAXIMIN [Suspect]
     Active Substance: RIFAXIMIN
     Dosage: UNK
     Route: 065
  1471. RIFAXIMIN [Suspect]
     Active Substance: RIFAXIMIN
     Dosage: UNK
     Route: 065
  1472. RIFAXIMIN [Suspect]
     Active Substance: RIFAXIMIN
     Dosage: UNK
     Route: 065
  1473. RIFAXIMIN [Suspect]
     Active Substance: RIFAXIMIN
     Dosage: UNK
     Route: 065
  1474. RIFAXIMIN [Suspect]
     Active Substance: RIFAXIMIN
     Indication: Product used for unknown indication
     Dosage: UNKNOWN
     Route: 065
  1475. RIFAXIMIN [Suspect]
     Active Substance: RIFAXIMIN
     Dosage: UNKNOWN
     Route: 065
  1476. RIFAXIMIN [Suspect]
     Active Substance: RIFAXIMIN
     Dosage: UNKNOWN
     Route: 065
  1477. RIFAXIMIN [Suspect]
     Active Substance: RIFAXIMIN
     Dosage: UNKNOWN
     Route: 065
  1478. RIFAXIMIN [Suspect]
     Active Substance: RIFAXIMIN
     Dosage: UNKNOWN
     Route: 065
  1479. RIFAXIMIN [Suspect]
     Active Substance: RIFAXIMIN
     Dosage: UNK
     Route: 065
  1480. RIFAXIMIN [Suspect]
     Active Substance: RIFAXIMIN
     Dosage: UNKNOWN
     Route: 065
  1481. RIFAXIMIN [Suspect]
     Active Substance: RIFAXIMIN
     Dosage: UNKNOWN
     Route: 065
  1482. RIFAXIMIN [Suspect]
     Active Substance: RIFAXIMIN
     Dosage: UNKNOWN
     Route: 065
  1483. RIFAXIMIN [Suspect]
     Active Substance: RIFAXIMIN
     Dosage: UNK
     Route: 065
  1484. RIFAXIMIN [Suspect]
     Active Substance: RIFAXIMIN
     Dosage: UNKNOWN
     Route: 065
  1485. RIFAXIMIN [Suspect]
     Active Substance: RIFAXIMIN
     Dosage: UNKNOWN
     Route: 065
  1486. RIFAXIMIN [Suspect]
     Active Substance: RIFAXIMIN
     Dosage: UNKNOWN
     Route: 065
  1487. RIFAXIMIN [Suspect]
     Active Substance: RIFAXIMIN
     Dosage: UNKNOWN
     Route: 065
  1488. RIFAXIMIN [Suspect]
     Active Substance: RIFAXIMIN
     Dosage: UNKNOWN
     Route: 065
  1489. RIFAXIMIN [Suspect]
     Active Substance: RIFAXIMIN
     Dosage: UNKNOWN
     Route: 065
  1490. RIFAXIMIN [Suspect]
     Active Substance: RIFAXIMIN
     Dosage: UNKNOWN
     Route: 065
  1491. RIFAXIMIN [Suspect]
     Active Substance: RIFAXIMIN
     Dosage: UNKNOWN
     Route: 065
  1492. RIFAXIMIN [Suspect]
     Active Substance: RIFAXIMIN
     Dosage: UNK
     Route: 065
  1493. RIFAXIMIN [Suspect]
     Active Substance: RIFAXIMIN
     Dosage: UNK
     Route: 065
  1494. RIFAXIMIN [Suspect]
     Active Substance: RIFAXIMIN
     Dosage: UNKNOWN
     Route: 065
  1495. RIFAXIMIN [Suspect]
     Active Substance: RIFAXIMIN
     Dosage: UNKNOWN
     Route: 065
  1496. RIFAXIMIN [Suspect]
     Active Substance: RIFAXIMIN
     Dosage: UNKNOWN
     Route: 065
  1497. RIFAXIMIN [Suspect]
     Active Substance: RIFAXIMIN
     Dosage: UNKNOWN
     Route: 065
  1498. RIFAXIMIN [Suspect]
     Active Substance: RIFAXIMIN
     Dosage: UNK
     Route: 065
  1499. METHOTREXATE [Suspect]
     Active Substance: METHOTREXATE
     Indication: Product used for unknown indication
     Dosage: UNK, ADALIMUMAB SOLUTION FOR INJECTION, SINGLE DOSE PEN
     Route: 050
     Dates: start: 20211112
  1500. METHOTREXATE [Suspect]
     Active Substance: METHOTREXATE
     Dosage: UNK, ADALIMUMAB SOLUTION FOR INJECTION, SINGLE DOSE PEN
     Route: 050
     Dates: start: 20211211
  1501. METHOTREXATE [Suspect]
     Active Substance: METHOTREXATE
     Dosage: UNK
     Route: 050
  1502. METHOTREXATE [Suspect]
     Active Substance: METHOTREXATE
     Dosage: UNK
     Route: 050
  1503. METHOTREXATE [Suspect]
     Active Substance: METHOTREXATE
     Dosage: UNK
     Route: 050
  1504. METHOTREXATE [Suspect]
     Active Substance: METHOTREXATE
     Dosage: UNK
     Route: 050
  1505. METHOTREXATE [Suspect]
     Active Substance: METHOTREXATE
     Dosage: UNK UNK, UNK
     Route: 065
  1506. METHOTREXATE [Suspect]
     Active Substance: METHOTREXATE
     Dosage: UNK UNK, UNK
     Route: 065
  1507. METHOTREXATE [Suspect]
     Active Substance: METHOTREXATE
     Dosage: UNK UNK, UNK
     Route: 065
  1508. METHOTREXATE [Suspect]
     Active Substance: METHOTREXATE
     Dosage: UNK UNK, UNK
     Route: 065
  1509. METHOTREXATE [Suspect]
     Active Substance: METHOTREXATE
     Dosage: UNK UNK, UNK
     Route: 065
  1510. METHOTREXATE [Suspect]
     Active Substance: METHOTREXATE
     Dosage: UNK UNK, UNK
     Route: 065
  1511. METHOTREXATE [Suspect]
     Active Substance: METHOTREXATE
     Dosage: UNK UNK, UNK
     Route: 065
  1512. METHOTREXATE [Suspect]
     Active Substance: METHOTREXATE
     Dosage: UNK UNK, UNK
     Route: 065
  1513. METHOTREXATE [Suspect]
     Active Substance: METHOTREXATE
     Dosage: UNK UNK, UNK
     Route: 065
  1514. METHOTREXATE [Suspect]
     Active Substance: METHOTREXATE
     Dosage: UNK UNK, UNK
     Route: 065
  1515. METHOTREXATE [Suspect]
     Active Substance: METHOTREXATE
     Dosage: UNK UNK, UNK
     Route: 065
  1516. METHOTREXATE [Suspect]
     Active Substance: METHOTREXATE
     Dosage: UNK UNK, UNK
     Route: 065
  1517. METHOTREXATE [Suspect]
     Active Substance: METHOTREXATE
     Dosage: UNK UNK, UNK
     Route: 065
  1518. METHOTREXATE [Suspect]
     Active Substance: METHOTREXATE
     Dosage: UNK (ADALIMUMAB SOLUTION FOR INJECTION, SINGLE DOSE PEN)
     Route: 065
  1519. METHOTREXATE [Suspect]
     Active Substance: METHOTREXATE
     Dosage: UNK
     Route: 065
  1520. METHOTREXATE [Suspect]
     Active Substance: METHOTREXATE
     Dosage: UNK
     Route: 065
  1521. METHOTREXATE [Suspect]
     Active Substance: METHOTREXATE
     Dosage: UNK
     Route: 065
  1522. METHOTREXATE [Suspect]
     Active Substance: METHOTREXATE
     Dosage: UNK
     Route: 065
  1523. METHOTREXATE [Suspect]
     Active Substance: METHOTREXATE
     Dosage: UNK
     Route: 065
  1524. METHOTREXATE [Suspect]
     Active Substance: METHOTREXATE
     Dosage: UNK
     Route: 065
  1525. METHOTREXATE [Suspect]
     Active Substance: METHOTREXATE
     Dosage: UNK
     Route: 065
  1526. METHOTREXATE [Suspect]
     Active Substance: METHOTREXATE
     Dosage: UNK
     Route: 065
  1527. METHOTREXATE [Suspect]
     Active Substance: METHOTREXATE
     Dosage: UNK
     Route: 050
     Dates: start: 20211112
  1528. METHOTREXATE [Suspect]
     Active Substance: METHOTREXATE
     Dosage: UNK
     Route: 050
  1529. METHOTREXATE [Suspect]
     Active Substance: METHOTREXATE
     Dosage: UNK
     Route: 050
  1530. METHOTREXATE [Suspect]
     Active Substance: METHOTREXATE
     Dosage: UNK
     Route: 050
  1531. METHOTREXATE [Suspect]
     Active Substance: METHOTREXATE
     Dosage: UNK
     Route: 050
  1532. METHOTREXATE [Suspect]
     Active Substance: METHOTREXATE
     Dosage: UNK
     Route: 050
  1533. METHOTREXATE [Suspect]
     Active Substance: METHOTREXATE
     Dosage: UNK
     Route: 050
  1534. METHOTREXATE [Suspect]
     Active Substance: METHOTREXATE
     Dosage: UNK
     Route: 065
  1535. METHOTREXATE [Suspect]
     Active Substance: METHOTREXATE
     Dosage: UNK (ADALIMUMAB SOLUTION FOR INJECTION, SINGLE DOSE PEN)
     Route: 065
  1536. METHOTREXATE [Suspect]
     Active Substance: METHOTREXATE
     Dosage: UNK (ADALIMUMAB SOLUTION FOR INJECTION, SINGLE DOSE PEN)
     Route: 065
  1537. METHOTREXATE [Suspect]
     Active Substance: METHOTREXATE
     Dosage: UNK (ADALIMUMAB SOLUTION FOR INJECTION, SINGLE DOSE PEN)
     Route: 065
  1538. METHOTREXATE [Suspect]
     Active Substance: METHOTREXATE
     Dosage: UNK (ADALIMUMAB SOLUTION FOR INJECTION, SINGLE DOSE PEN)
     Route: 065
  1539. METHOTREXATE [Suspect]
     Active Substance: METHOTREXATE
     Dosage: UNK (ADALIMUMAB SOLUTION FOR INJECTION, SINGLE DOSE PEN)
     Route: 065
  1540. METHOTREXATE [Suspect]
     Active Substance: METHOTREXATE
     Dosage: UNK (ADALIMUMAB SOLUTION FOR INJECTION, SINGLE DOSE PEN)
     Route: 065
  1541. METHOTREXATE [Suspect]
     Active Substance: METHOTREXATE
     Dosage: UNK, OTHER
     Route: 065
  1542. METHOTREXATE [Suspect]
     Active Substance: METHOTREXATE
     Dosage: UNK, OTHER
     Route: 065
  1543. METHOTREXATE [Suspect]
     Active Substance: METHOTREXATE
     Dosage: UNK, OTHER
     Route: 065
  1544. METHOTREXATE [Suspect]
     Active Substance: METHOTREXATE
     Dosage: UNK, OTHER
     Route: 065
  1545. METHOTREXATE [Suspect]
     Active Substance: METHOTREXATE
     Dosage: UNK, OTHER
     Route: 065
  1546. METHOTREXATE [Suspect]
     Active Substance: METHOTREXATE
     Dosage: UNK, OTHER
     Route: 065
  1547. METHOTREXATE [Suspect]
     Active Substance: METHOTREXATE
     Dosage: UNK, OTHER
     Route: 065
  1548. METHOTREXATE [Suspect]
     Active Substance: METHOTREXATE
     Dosage: UNK, OTHER
     Route: 065
  1549. METHOTREXATE [Suspect]
     Active Substance: METHOTREXATE
     Indication: Product used for unknown indication
     Dosage: UNK; ADDITIONAL INFO: ROUTE:OTHER
     Route: 050
  1550. METHOTREXATE [Suspect]
     Active Substance: METHOTREXATE
     Dosage: UNK; ;
     Route: 050
     Dates: start: 20211112
  1551. METHOTREXATE [Suspect]
     Active Substance: METHOTREXATE
     Indication: Product used for unknown indication
     Dosage: UNK, OTHER
     Route: 065
  1552. METHOTREXATE [Suspect]
     Active Substance: METHOTREXATE
     Dosage: UNK, OTHER
     Route: 065
  1553. METHOTREXATE [Suspect]
     Active Substance: METHOTREXATE
     Dosage: UNK, OTHER
     Route: 065
  1554. METHOTREXATE [Suspect]
     Active Substance: METHOTREXATE
     Dosage: UNK, OTHER
     Route: 065
  1555. METHOTREXATE [Suspect]
     Active Substance: METHOTREXATE
     Dosage: UNK, OTHER
     Route: 065
  1556. METHOTREXATE [Suspect]
     Active Substance: METHOTREXATE
     Dosage: UNK, OTHER
     Route: 065
  1557. METHOTREXATE [Suspect]
     Active Substance: METHOTREXATE
     Dosage: UNK, OTHER
     Route: 065
  1558. METHOTREXATE [Suspect]
     Active Substance: METHOTREXATE
     Dosage: UNK, OTHER
     Route: 065
  1559. METHOTREXATE [Suspect]
     Active Substance: METHOTREXATE
     Dosage: UNK, OTHER
     Route: 065
  1560. METHOTREXATE [Suspect]
     Active Substance: METHOTREXATE
     Dosage: UNK, OTHER
     Route: 065
  1561. METHOTREXATE [Suspect]
     Active Substance: METHOTREXATE
     Dosage: UNK, OTHER
     Route: 065
  1562. METHOTREXATE [Suspect]
     Active Substance: METHOTREXATE
     Dosage: UNK, OTHER
     Route: 065
  1563. METHOTREXATE [Suspect]
     Active Substance: METHOTREXATE
     Dosage: UNKNOWN; ;
     Route: 050
  1564. METHOTREXATE [Suspect]
     Active Substance: METHOTREXATE
     Dosage: UNKNOWN; ;
     Route: 050
  1565. METHOTREXATE [Suspect]
     Active Substance: METHOTREXATE
     Dosage: UNKNOWN; ;
     Route: 050
  1566. METHOTREXATE [Suspect]
     Active Substance: METHOTREXATE
     Dosage: UNKNOWN; ;
     Route: 050
  1567. METHOTREXATE [Suspect]
     Active Substance: METHOTREXATE
     Dosage: UNKNOWN; ;
     Route: 050
  1568. METHOTREXATE [Suspect]
     Active Substance: METHOTREXATE
     Dosage: UNK; ;
     Route: 050
     Dates: start: 20211112
  1569. METHOTREXATE [Suspect]
     Active Substance: METHOTREXATE
     Dosage: UNK; ;
     Route: 050
  1570. METHOTREXATE [Suspect]
     Active Substance: METHOTREXATE
     Dosage: UNK; ;
     Route: 050
  1571. METHOTREXATE [Suspect]
     Active Substance: METHOTREXATE
     Dosage: UNK; ;
     Route: 050
  1572. METHOTREXATE [Suspect]
     Active Substance: METHOTREXATE
     Dosage: UNK; ;
     Route: 050
  1573. METHOTREXATE [Suspect]
     Active Substance: METHOTREXATE
     Dosage: UNK; ;
     Route: 050
  1574. METHOTREXATE [Suspect]
     Active Substance: METHOTREXATE
     Dosage: UNK; ;
     Route: 050
  1575. METHOTREXATE [Suspect]
     Active Substance: METHOTREXATE
     Dosage: UNK; ;
     Route: 050
  1576. METHOTREXATE [Suspect]
     Active Substance: METHOTREXATE
     Dosage: UNK; ;
     Route: 050
  1577. METHOTREXATE [Suspect]
     Active Substance: METHOTREXATE
     Dosage: UNK; ;
     Route: 050
  1578. METHOTREXATE [Suspect]
     Active Substance: METHOTREXATE
     Dosage: UNK; ;
     Route: 050
  1579. METHOTREXATE [Suspect]
     Active Substance: METHOTREXATE
     Dosage: UNK; ;
     Route: 050
  1580. METHOTREXATE [Suspect]
     Active Substance: METHOTREXATE
     Dosage: UNK; ;
     Route: 050
  1581. METHOTREXATE [Suspect]
     Active Substance: METHOTREXATE
     Dosage: UNK; ;
     Route: 050
  1582. METHOTREXATE [Suspect]
     Active Substance: METHOTREXATE
     Dosage: UNK; ;
     Route: 050
  1583. METHOTREXATE [Suspect]
     Active Substance: METHOTREXATE
     Dosage: UNK
     Route: 050
     Dates: start: 20211112
  1584. METHOTREXATE [Suspect]
     Active Substance: METHOTREXATE
     Dosage: UNK (ADALIMUMAB SOLUTION FOR INJECTION, SINGLE DOSE PEN)
     Route: 065
     Dates: start: 20211211
  1585. METHOTREXATE [Suspect]
     Active Substance: METHOTREXATE
     Dosage: UNK (ADALIMUMAB SOLUTION FOR INJECTION, SINGLE DOSE PEN)
     Route: 065
     Dates: start: 20211212
  1586. METHOTREXATE [Suspect]
     Active Substance: METHOTREXATE
     Dosage: UNK; ADDITIONAL INFORMATION ON DRUG (FREE TEXT): ADALIMUMAB SOLUTION FOR INJECTION, SINGLE DOSE PEN
     Route: 050
     Dates: start: 20211211
  1587. METHOTREXATE [Suspect]
     Active Substance: METHOTREXATE
     Dosage: UNK; ADDITIONAL INFORMATION ON DRUG (FREE TEXT): ADALIMUMAB SOLUTION FOR INJECTION, SINGLE DOSE PEN
     Route: 050
     Dates: start: 20211112
  1588. METHOTREXATE [Suspect]
     Active Substance: METHOTREXATE
     Dosage: UNK (ADALIMUMAB SOLUTION FOR INJECTION, SINGLE DOSE PEN)
     Route: 065
  1589. METHOTREXATE [Suspect]
     Active Substance: METHOTREXATE
     Dosage: UNK (ADALIMUMAB SOLUTION FOR INJECTION, SINGLE DOSE PEN)
     Route: 065
  1590. METHOTREXATE [Suspect]
     Active Substance: METHOTREXATE
     Dosage: UNK (ADALIMUMAB SOLUTION FOR INJECTION, SINGLE DOSE PEN)
     Route: 065
  1591. METHOTREXATE [Suspect]
     Active Substance: METHOTREXATE
     Dosage: UNK (ADALIMUMAB SOLUTION FOR INJECTION, SINGLE DOSE PEN)
     Route: 065
  1592. METHOTREXATE [Suspect]
     Active Substance: METHOTREXATE
     Dosage: UNK (ADALIMUMAB SOLUTION FOR INJECTION, SINGLE DOSE PEN)
     Route: 065
  1593. METHOTREXATE [Suspect]
     Active Substance: METHOTREXATE
     Dosage: UNK (ADALIMUMAB SOLUTION FOR INJECTION, SINGLE DOSE PEN)
     Route: 065
  1594. METHOTREXATE [Suspect]
     Active Substance: METHOTREXATE
     Dosage: UNK (ADALIMUMAB SOLUTION FOR INJECTION, SINGLE DOSE PEN)
     Route: 065
  1595. METHOTREXATE [Suspect]
     Active Substance: METHOTREXATE
     Dosage: UNK (ADALIMUMAB SOLUTION FOR INJECTION, SINGLE DOSE PEN)
     Route: 065
  1596. METHOTREXATE [Suspect]
     Active Substance: METHOTREXATE
     Dosage: UNK (ADALIMUMAB SOLUTION FOR INJECTION, SINGLE DOSE PEN)
     Route: 065
  1597. METHOTREXATE [Suspect]
     Active Substance: METHOTREXATE
     Dosage: UNK (ADALIMUMAB SOLUTION FOR INJECTION, SINGLE DOSE PEN)
     Route: 065
  1598. METHOTREXATE [Suspect]
     Active Substance: METHOTREXATE
     Dosage: UNK (ADALIMUMAB SOLUTION FOR INJECTION, SINGLE DOSE PEN)
     Route: 065
  1599. METHOTREXATE [Suspect]
     Active Substance: METHOTREXATE
     Dosage: UNK (ADALIMUMAB SOLUTION FOR INJECTION, SINGLE DOSE PEN)
     Route: 065
  1600. METHOTREXATE [Suspect]
     Active Substance: METHOTREXATE
     Dosage: UNK (ADALIMUMAB SOLUTION FOR INJECTION, SINGLE DOSE PEN)
     Route: 065
  1601. METHOTREXATE [Suspect]
     Active Substance: METHOTREXATE
     Indication: Product used for unknown indication
     Route: 065
  1602. METHOTREXATE [Suspect]
     Active Substance: METHOTREXATE
     Indication: Product used for unknown indication
     Dosage: UNK
     Dates: start: 20211112
  1603. METHOTREXATE [Suspect]
     Active Substance: METHOTREXATE
     Dosage: UNK
  1604. METHOTREXATE [Suspect]
     Active Substance: METHOTREXATE
     Indication: Product used for unknown indication
     Dosage: UNK
     Route: 065
  1605. METHOTREXATE [Suspect]
     Active Substance: METHOTREXATE
     Indication: Product used for unknown indication
     Dosage: UNK (ADALIMUMAB SOLUTION FOR INJECTION, SINGLE DOSE PEN)
     Route: 065
  1606. METHOTREXATE [Suspect]
     Active Substance: METHOTREXATE
     Dosage: UNK (ADALIMUMAB SOLUTION FOR INJECTION, SINGLE DOSE PEN)
     Route: 065
  1607. METHOTREXATE [Suspect]
     Active Substance: METHOTREXATE
     Dosage: UNK (ADALIMUMAB SOLUTION FOR INJECTION, SINGLE DOSE PEN)
     Route: 065
  1608. METHOTREXATE [Suspect]
     Active Substance: METHOTREXATE
     Dosage: UNK (ADALIMUMAB SOLUTION FOR INJECTION, SINGLE DOSE PEN)
     Route: 065
  1609. METHOTREXATE [Suspect]
     Active Substance: METHOTREXATE
     Dosage: UNK (ADALIMUMAB SOLUTION FOR INJECTION, SINGLE DOSE PEN)
     Route: 065
  1610. METHOTREXATE [Suspect]
     Active Substance: METHOTREXATE
     Dosage: UNK (ADALIMUMAB SOLUTION FOR INJECTION, SINGLE DOSE PEN)
     Route: 065
  1611. USTEKINUMAB [Concomitant]
     Active Substance: USTEKINUMAB
     Indication: Product used for unknown indication
     Dosage: UNKNOWN; OTHER
     Route: 050
     Dates: start: 20211112, end: 2022
  1612. USTEKINUMAB [Concomitant]
     Active Substance: USTEKINUMAB
     Dosage: UNKNOWN; OTHER
     Route: 050
     Dates: start: 20211112
  1613. USTEKINUMAB [Concomitant]
     Active Substance: USTEKINUMAB
     Dosage: UNK (ADALIMUMAB SOLUTION FOR INJECTION, SINGLE DOSE PEN)
     Route: 050
     Dates: start: 20211112, end: 2022
  1614. USTEKINUMAB [Concomitant]
     Active Substance: USTEKINUMAB
     Dosage: PHARMACEUTICAL DOSE FORM (FREE TEXT): 98
     Route: 065
     Dates: start: 20211112, end: 2022
  1615. USTEKINUMAB [Concomitant]
     Active Substance: USTEKINUMAB
     Dosage: UNKNOWN
     Route: 065
     Dates: start: 20211112, end: 2022
  1616. USTEKINUMAB [Concomitant]
     Active Substance: USTEKINUMAB
     Dosage: UNK (ADDITIONAL INFO: ROUTE:OTHER ADALIMUMAB SOLUTION FOR INJECTION, SINGLE DOSE PEN)
     Dates: start: 20211112, end: 2022
  1617. USTEKINUMAB [Concomitant]
     Active Substance: USTEKINUMAB
     Dosage: UNK (ADDITIONAL INFO: ROUTE:OTHER ADALIMUMAB SOLUTION FOR INJECTION, SINGLE DOSE PEN)
     Dates: start: 20211112, end: 2022
  1618. USTEKINUMAB [Concomitant]
     Active Substance: USTEKINUMAB
     Dosage: UNK (ADDITIONAL INFO: ROUTE:OTHER ADALIMUMAB SOLUTION FOR INJECTION, SINGLE DOSE PEN)
     Dates: start: 20211112, end: 2022
  1619. USTEKINUMAB [Concomitant]
     Active Substance: USTEKINUMAB
     Dosage: UNK (ADDITIONAL INFO: ROUTE:OTHER ADALIMUMAB SOLUTION FOR INJECTION, SINGLE DOSE PEN)
     Route: 065
     Dates: start: 20211112, end: 2022
  1620. USTEKINUMAB [Concomitant]
     Active Substance: USTEKINUMAB
     Indication: Product used for unknown indication
     Dosage: UNK; ADDITIONAL INFO: ROUTE:OTHER
     Route: 050
     Dates: start: 20211112, end: 2022
  1621. USTEKINUMAB [Concomitant]
     Active Substance: USTEKINUMAB
     Dosage: UNK; ;
     Route: 050
     Dates: start: 20211112, end: 2022
  1622. USTEKINUMAB [Concomitant]
     Active Substance: USTEKINUMAB
     Dosage: UNK
     Route: 065
     Dates: start: 20211112, end: 2022
  1623. USTEKINUMAB [Concomitant]
     Active Substance: USTEKINUMAB
     Dosage: UNK
     Route: 050
     Dates: start: 20211112, end: 2022
  1624. USTEKINUMAB [Concomitant]
     Active Substance: USTEKINUMAB
     Indication: Product used for unknown indication
     Dosage: UNK
     Dates: start: 20211112, end: 2022
  1625. USTEKINUMAB [Concomitant]
     Active Substance: USTEKINUMAB
     Dosage: UNK
     Route: 065
     Dates: start: 20211112, end: 2022
  1626. USTEKINUMAB [Concomitant]
     Active Substance: USTEKINUMAB
     Dosage: UNK
     Route: 065
     Dates: start: 20211112, end: 2022
  1627. HYRIMOZ [Concomitant]
     Active Substance: ADALIMUMAB-ADAZ
     Indication: Product used for unknown indication
     Dosage: UNK, SENSO-READ PEN (ADALIMUMAB SOLUTION FOR INJECTION, SINGLE DOSE PEN)
     Route: 065
  1628. HYRIMOZ [Concomitant]
     Active Substance: ADALIMUMAB-ADAZ
     Indication: Crohn^s disease
     Dosage: UNK, SENSO-READ PEN; PHARMACEUTICAL DOSE FORM: HYRIMOZ SENSO-READ PEN
  1629. HYRIMOZ [Concomitant]
     Active Substance: ADALIMUMAB-ADAZ
     Dosage: UNK, SENSO-READ PEN/ADDITIONAL INFORMATION ON DRUG (FREE TEXT): HYRIMOZ SENSO-READ PEN/ HYRIMOZ PRE-
     Route: 050
  1630. HYRIMOZ [Concomitant]
     Active Substance: ADALIMUMAB-ADAZ
     Dosage: UNK, SENSO-READ PEN; ; (ADALIMUMAB SOLUTION FOR INJECTION, SINGLE DOSE PEN)
     Route: 050
  1631. HYRIMOZ [Concomitant]
     Active Substance: ADALIMUMAB-ADAZ
     Dosage: UNK, SENSO-READ PEN/ADDITIONAL INFORMATION ON DRUG (FREE TEXT): HYRIMOZ SENSO-READ PEN/ HYRIMOZ PRE-
     Route: 050
  1632. HYRIMOZ [Concomitant]
     Active Substance: ADALIMUMAB-ADAZ
     Dosage: UNK; ADDITIONAL INFO: ROUTE:OTHERHYRIMOZ SENSO-READ PEN
     Route: 050
  1633. HYRIMOZ [Concomitant]
     Active Substance: ADALIMUMAB-ADAZ
     Dosage: UNK, SENSO-READ PEN; ;
     Route: 065
  1634. HYRIMOZ [Concomitant]
     Active Substance: ADALIMUMAB-ADAZ
     Dosage: UNK, SENSO-READ PEN; ;
     Route: 065
  1635. HYRIMOZ [Concomitant]
     Active Substance: ADALIMUMAB-ADAZ
     Dosage: UNK, SENSO-READ PEN
     Route: 050
  1636. HYRIMOZ [Concomitant]
     Active Substance: ADALIMUMAB-ADAZ
     Dosage: UNK, SENSO-READ PEN (ADALIMUMAB SOLUTION FOR INJECTION, SINGLE DOSE PEN)
     Route: 050
  1637. HYRIMOZ [Concomitant]
     Active Substance: ADALIMUMAB-ADAZ
     Dosage: UNK (SENSO-READ PEN) (ADALIMUMAB SOLUTION FOR INJECTION, SINGLE DOSE PEN)
     Route: 065
  1638. HYRIMOZ [Concomitant]
     Active Substance: ADALIMUMAB-ADAZ
     Dosage: UNK (SENSO-READ PEN)
     Route: 065
  1639. HYRIMOZ [Concomitant]
     Active Substance: ADALIMUMAB-ADAZ
     Dosage: UNK, SENSO-READ PEN; ;
     Route: 050
  1640. HYRIMOZ [Concomitant]
     Active Substance: ADALIMUMAB-ADAZ
     Dosage: UNK, SENSO-READ PEN; ;
     Route: 050
  1641. HYRIMOZ [Concomitant]
     Active Substance: ADALIMUMAB-ADAZ
     Dosage: UNKNOWN, SENSO-READ PEN HYRIMOZ SENSO-READ PEN/ HYRIMOZ PRE-FILLED SYRINGE+X100L (ADALIMUMAB).; ;
     Route: 050
  1642. HYRIMOZ [Concomitant]
     Active Substance: ADALIMUMAB-ADAZ
     Dosage: ADALIMUMAB SOLUTION FOR INJECTION, SINGLE DOSE PEN; ;
     Route: 050
  1643. HYRIMOZ [Concomitant]
     Active Substance: ADALIMUMAB-ADAZ
     Dosage: UNK (SENSO-READ PEN)
     Route: 050
  1644. HYRIMOZ [Concomitant]
     Active Substance: ADALIMUMAB-ADAZ
     Dosage: UNK (SENSO-READ PEN)
     Route: 050
  1645. HYRIMOZ [Concomitant]
     Active Substance: ADALIMUMAB-ADAZ
     Dosage: ADALIMUMAB SOLUTION FOR INJECTION, SINGLE DOSE PEN; ;
     Route: 050
  1646. HYRIMOZ [Concomitant]
     Active Substance: ADALIMUMAB-ADAZ
     Dosage: ADALIMUMAB SOLUTION FOR INJECTION, SINGLE DOSE PEN; ;
     Route: 050
  1647. HYRIMOZ [Concomitant]
     Active Substance: ADALIMUMAB-ADAZ
     Dosage: ADALIMUMAB SOLUTION FOR INJECTION, SINGLE DOSE PEN; ;
     Route: 050
  1648. HYRIMOZ [Concomitant]
     Active Substance: ADALIMUMAB-ADAZ
     Dosage: UNK (SENSO-READ PEN)
     Route: 050
  1649. HYRIMOZ [Concomitant]
     Active Substance: ADALIMUMAB-ADAZ
     Dosage: UNK (SENSO-READ PEN)
     Route: 050
  1650. HYRIMOZ [Concomitant]
     Active Substance: ADALIMUMAB-ADAZ
     Dosage: UNK (SENSO-READ PEN)
     Route: 050
  1651. HYRIMOZ [Concomitant]
     Active Substance: ADALIMUMAB-ADAZ
     Dosage: HYRIMOZ SENSO-READ PEN/ HYRIMOZ PRE-FILLED SYRINGE+X100L (ADALIMUMAB) (ADALIMUMAB SOLUTION FOR INJEC
     Route: 050
  1652. HYRIMOZ [Concomitant]
     Active Substance: ADALIMUMAB-ADAZ
     Dosage: UNK (SENSO-READ PEN) (ADALIMUMAB SOLUTION FOR INJECTION, SINGLE DOSE PEN)
     Route: 050
  1653. HYRIMOZ [Concomitant]
     Active Substance: ADALIMUMAB-ADAZ
     Dosage: HYRIMOZ SENSO-READ PEN/ HYRIMOZ PRE-FILLED SYRINGE+X100L (ADALIMUMAB); ADDITIONAL INFORMATION ON DRU
     Route: 050
  1654. HYRIMOZ [Concomitant]
     Active Substance: ADALIMUMAB-ADAZ
     Dosage: ADALIMUMAB SOLUTION FOR INJECTION, SINGLE DOSE PEN
  1655. HYRIMOZ [Concomitant]
     Active Substance: ADALIMUMAB-ADAZ
     Dosage: ADALIMUMAB SOLUTION FOR INJECTION, SINGLE DOSE PEN
  1656. HYRIMOZ [Concomitant]
     Active Substance: ADALIMUMAB-ADAZ
     Indication: Product used for unknown indication
     Dosage: UNK, SENSO-READ PEN
     Route: 065
  1657. HYRIMOZ [Concomitant]
     Active Substance: ADALIMUMAB-ADAZ
     Dosage: UNK, SENSO-READ PEN, PHARMACEUTICAL DOSE FORM (FREE TEXT): 98
     Route: 065
  1658. HYRIMOZ [Concomitant]
     Active Substance: ADALIMUMAB-ADAZ
     Indication: Product used for unknown indication
     Dosage: UNK, SENSO-READ PEN
     Route: 050
  1659. HYRIMOZ [Concomitant]
     Active Substance: ADALIMUMAB-ADAZ
     Indication: Crohn^s disease
     Dosage: UNK, SENSO-READ PEN
     Route: 050
  1660. HYRIMOZ [Concomitant]
     Active Substance: ADALIMUMAB-ADAZ
     Dosage: UNK, SENSO-READ PEN
     Route: 065
  1661. HYRIMOZ [Concomitant]
     Active Substance: ADALIMUMAB-ADAZ
     Dosage: UNK, SENSO-READ PEN
     Route: 065
  1662. HYRIMOZ [Concomitant]
     Active Substance: ADALIMUMAB-ADAZ
     Dosage: UNK, SENSO-READ PEN
     Route: 050
  1663. HYRIMOZ [Concomitant]
     Active Substance: ADALIMUMAB-ADAZ
     Dosage: UNK, SENSO-READ PEN/HYRIMOZ PRE-FILLED SYRINGE PLUS X100L (ADALIMUMAB)
     Route: 050

REACTIONS (18)
  - Crohn^s disease [Unknown]
  - Crohn^s disease [Unknown]
  - Small intestinal obstruction [Unknown]
  - Small intestinal obstruction [Unknown]
  - Nerve injury [Unknown]
  - Frequent bowel movements [Unknown]
  - Quality of life decreased [Unknown]
  - Quality of life decreased [Unknown]
  - Impaired quality of life [Unknown]
  - Impaired quality of life [Unknown]
  - Incontinence [Unknown]
  - Drug specific antibody [Unknown]
  - Drug specific antibody present [Unknown]
  - Pancreatitis [Unknown]
  - Pneumonia [Unknown]
  - Gastrointestinal microorganism overgrowth [Unknown]
  - Drug ineffective [Unknown]
  - Drug ineffective [Unknown]

NARRATIVE: CASE EVENT DATE: 20220101
